FAERS Safety Report 24942430 (Version 1)
Quarter: 2025Q1

REPORT INFORMATION
  Report Type: Spontaneous
  Country: GB (occurrence: GB)
  Receive Date: 20250207
  Receipt Date: 20250207
  Transmission Date: 20250409
  Serious: Yes (Hospitalization, Other)
  Sender: CELLTRION
  Company Number: GB-CELLTRION INC.-2023GB019658

PATIENT

DRUGS (2321)
  1. INFLIXIMAB [Suspect]
     Active Substance: INFLIXIMAB
     Indication: Colitis
     Route: 065
  2. INFLIXIMAB [Suspect]
     Active Substance: INFLIXIMAB
     Indication: Colitis
     Route: 065
  3. INFLIXIMAB [Suspect]
     Active Substance: INFLIXIMAB
     Route: 065
  4. INFLIXIMAB [Suspect]
     Active Substance: INFLIXIMAB
     Route: 065
  5. INFLIXIMAB [Suspect]
     Active Substance: INFLIXIMAB
     Route: 065
  6. INFLIXIMAB [Suspect]
     Active Substance: INFLIXIMAB
     Route: 065
  7. INFLIXIMAB [Suspect]
     Active Substance: INFLIXIMAB
     Route: 065
  8. INFLIXIMAB [Suspect]
     Active Substance: INFLIXIMAB
     Route: 065
  9. INFLIXIMAB [Suspect]
     Active Substance: INFLIXIMAB
     Route: 065
  10. INFLIXIMAB [Suspect]
     Active Substance: INFLIXIMAB
     Route: 065
  11. INFLIXIMAB [Suspect]
     Active Substance: INFLIXIMAB
     Route: 065
  12. INFLIXIMAB [Suspect]
     Active Substance: INFLIXIMAB
     Route: 065
  13. INFLIXIMAB [Suspect]
     Active Substance: INFLIXIMAB
     Route: 065
  14. INFLIXIMAB [Suspect]
     Active Substance: INFLIXIMAB
     Route: 065
  15. INFLIXIMAB [Suspect]
     Active Substance: INFLIXIMAB
     Route: 065
     Dates: start: 20200407, end: 20230501
  16. INFLIXIMAB [Suspect]
     Active Substance: INFLIXIMAB
     Route: 065
  17. INFLIXIMAB [Suspect]
     Active Substance: INFLIXIMAB
     Route: 065
  18. INFLIXIMAB [Suspect]
     Active Substance: INFLIXIMAB
     Route: 065
  19. INFLIXIMAB [Suspect]
     Active Substance: INFLIXIMAB
     Route: 065
  20. INFLIXIMAB [Suspect]
     Active Substance: INFLIXIMAB
     Route: 065
  21. INFLIXIMAB [Suspect]
     Active Substance: INFLIXIMAB
     Route: 065
     Dates: start: 20200407, end: 20230501
  22. INFLIXIMAB [Suspect]
     Active Substance: INFLIXIMAB
     Route: 065
  23. INFLIXIMAB [Suspect]
     Active Substance: INFLIXIMAB
     Route: 065
  24. INFLIXIMAB [Suspect]
     Active Substance: INFLIXIMAB
     Route: 065
  25. INFLIXIMAB [Suspect]
     Active Substance: INFLIXIMAB
     Route: 065
  26. INFLIXIMAB [Suspect]
     Active Substance: INFLIXIMAB
     Route: 065
  27. INFLIXIMAB [Suspect]
     Active Substance: INFLIXIMAB
     Route: 065
  28. INFLIXIMAB [Suspect]
     Active Substance: INFLIXIMAB
     Route: 065
  29. INFLIXIMAB [Suspect]
     Active Substance: INFLIXIMAB
     Route: 065
  30. INFLIXIMAB [Suspect]
     Active Substance: INFLIXIMAB
     Route: 065
  31. INFLIXIMAB [Suspect]
     Active Substance: INFLIXIMAB
     Route: 065
  32. INFLIXIMAB [Suspect]
     Active Substance: INFLIXIMAB
     Route: 065
  33. INFLIXIMAB [Suspect]
     Active Substance: INFLIXIMAB
     Route: 065
  34. INFLIXIMAB [Suspect]
     Active Substance: INFLIXIMAB
     Route: 065
  35. INFLIXIMAB [Suspect]
     Active Substance: INFLIXIMAB
     Route: 065
  36. INFLIXIMAB [Suspect]
     Active Substance: INFLIXIMAB
     Route: 065
  37. INFLIXIMAB [Suspect]
     Active Substance: INFLIXIMAB
     Route: 065
  38. INFLIXIMAB [Suspect]
     Active Substance: INFLIXIMAB
     Route: 065
  39. INFLIXIMAB [Suspect]
     Active Substance: INFLIXIMAB
     Route: 065
  40. INFLIXIMAB [Suspect]
     Active Substance: INFLIXIMAB
     Route: 065
  41. INFLIXIMAB [Suspect]
     Active Substance: INFLIXIMAB
     Route: 065
  42. INFLIXIMAB [Suspect]
     Active Substance: INFLIXIMAB
     Route: 065
  43. INFLIXIMAB [Suspect]
     Active Substance: INFLIXIMAB
     Route: 065
  44. INFLIXIMAB [Suspect]
     Active Substance: INFLIXIMAB
     Route: 065
  45. INFLIXIMAB [Suspect]
     Active Substance: INFLIXIMAB
     Route: 065
  46. INFLIXIMAB [Suspect]
     Active Substance: INFLIXIMAB
     Route: 065
  47. INFLIXIMAB [Suspect]
     Active Substance: INFLIXIMAB
     Route: 065
  48. INFLIXIMAB [Suspect]
     Active Substance: INFLIXIMAB
     Route: 065
  49. INFLIXIMAB [Suspect]
     Active Substance: INFLIXIMAB
     Route: 042
  50. INFLIXIMAB [Suspect]
     Active Substance: INFLIXIMAB
     Route: 041
  51. INFLIXIMAB [Suspect]
     Active Substance: INFLIXIMAB
     Indication: Colitis
     Route: 065
  52. INFLIXIMAB [Suspect]
     Active Substance: INFLIXIMAB
     Indication: Colitis
     Route: 042
  53. INFLIXIMAB [Suspect]
     Active Substance: INFLIXIMAB
     Route: 065
  54. INFLIXIMAB [Suspect]
     Active Substance: INFLIXIMAB
     Route: 065
  55. INFLIXIMAB [Suspect]
     Active Substance: INFLIXIMAB
     Route: 065
  56. INFLIXIMAB [Suspect]
     Active Substance: INFLIXIMAB
     Route: 065
  57. INFLIXIMAB [Suspect]
     Active Substance: INFLIXIMAB
     Route: 065
  58. INFLIXIMAB [Suspect]
     Active Substance: INFLIXIMAB
     Route: 065
  59. INFLIXIMAB [Suspect]
     Active Substance: INFLIXIMAB
     Route: 065
  60. INFLIXIMAB [Suspect]
     Active Substance: INFLIXIMAB
     Route: 065
  61. INFLIXIMAB [Suspect]
     Active Substance: INFLIXIMAB
     Route: 065
  62. INFLIXIMAB [Suspect]
     Active Substance: INFLIXIMAB
     Route: 065
  63. INFLIXIMAB [Suspect]
     Active Substance: INFLIXIMAB
     Route: 065
  64. INFLIXIMAB [Suspect]
     Active Substance: INFLIXIMAB
     Route: 065
  65. INFLIXIMAB [Suspect]
     Active Substance: INFLIXIMAB
     Route: 065
  66. INFLIXIMAB [Suspect]
     Active Substance: INFLIXIMAB
     Route: 065
  67. INFLIXIMAB [Suspect]
     Active Substance: INFLIXIMAB
     Route: 065
  68. INFLIXIMAB [Suspect]
     Active Substance: INFLIXIMAB
     Route: 065
  69. INFLIXIMAB [Suspect]
     Active Substance: INFLIXIMAB
     Route: 065
  70. INFLIXIMAB [Suspect]
     Active Substance: INFLIXIMAB
     Route: 065
  71. INFLIXIMAB [Suspect]
     Active Substance: INFLIXIMAB
     Route: 065
  72. INFLIXIMAB [Suspect]
     Active Substance: INFLIXIMAB
     Route: 065
  73. INFLIXIMAB [Suspect]
     Active Substance: INFLIXIMAB
     Route: 065
  74. INFLIXIMAB [Suspect]
     Active Substance: INFLIXIMAB
     Route: 065
  75. INFLIXIMAB [Suspect]
     Active Substance: INFLIXIMAB
     Route: 065
  76. INFLIXIMAB [Suspect]
     Active Substance: INFLIXIMAB
     Route: 065
  77. INFLIXIMAB [Suspect]
     Active Substance: INFLIXIMAB
     Route: 065
  78. INFLIXIMAB [Suspect]
     Active Substance: INFLIXIMAB
     Route: 065
  79. INFLIXIMAB [Suspect]
     Active Substance: INFLIXIMAB
     Route: 065
  80. INFLIXIMAB [Suspect]
     Active Substance: INFLIXIMAB
     Route: 065
  81. INFLIXIMAB [Suspect]
     Active Substance: INFLIXIMAB
     Route: 065
  82. INFLIXIMAB [Suspect]
     Active Substance: INFLIXIMAB
     Route: 065
  83. INFLIXIMAB [Suspect]
     Active Substance: INFLIXIMAB
     Route: 065
  84. INFLIXIMAB [Suspect]
     Active Substance: INFLIXIMAB
     Route: 065
  85. INFLIXIMAB [Suspect]
     Active Substance: INFLIXIMAB
     Route: 065
  86. INFLIXIMAB [Suspect]
     Active Substance: INFLIXIMAB
     Route: 065
  87. INFLIXIMAB [Suspect]
     Active Substance: INFLIXIMAB
     Route: 065
  88. INFLIXIMAB [Suspect]
     Active Substance: INFLIXIMAB
     Route: 065
  89. INFLIXIMAB [Suspect]
     Active Substance: INFLIXIMAB
     Route: 065
  90. INFLIXIMAB [Suspect]
     Active Substance: INFLIXIMAB
     Route: 065
  91. INFLIXIMAB [Suspect]
     Active Substance: INFLIXIMAB
     Route: 065
  92. INFLIXIMAB [Suspect]
     Active Substance: INFLIXIMAB
     Route: 065
  93. INFLIXIMAB [Suspect]
     Active Substance: INFLIXIMAB
     Route: 065
  94. INFLIXIMAB [Suspect]
     Active Substance: INFLIXIMAB
     Route: 065
  95. INFLIXIMAB [Suspect]
     Active Substance: INFLIXIMAB
     Route: 065
  96. INFLIXIMAB [Suspect]
     Active Substance: INFLIXIMAB
     Route: 065
  97. INFLIXIMAB [Suspect]
     Active Substance: INFLIXIMAB
     Route: 065
  98. INFLIXIMAB [Suspect]
     Active Substance: INFLIXIMAB
     Route: 065
  99. INFLIXIMAB [Suspect]
     Active Substance: INFLIXIMAB
     Indication: Colitis
     Route: 065
  100. INFLIXIMAB [Suspect]
     Active Substance: INFLIXIMAB
     Indication: Colitis
     Route: 065
  101. INFLIXIMAB [Suspect]
     Active Substance: INFLIXIMAB
     Route: 065
  102. INFLIXIMAB [Suspect]
     Active Substance: INFLIXIMAB
     Route: 065
  103. INFLIXIMAB [Suspect]
     Active Substance: INFLIXIMAB
     Route: 065
  104. INFLIXIMAB [Suspect]
     Active Substance: INFLIXIMAB
     Route: 065
  105. INFLIXIMAB [Suspect]
     Active Substance: INFLIXIMAB
     Route: 065
  106. INFLIXIMAB [Suspect]
     Active Substance: INFLIXIMAB
     Route: 065
  107. INFLIXIMAB [Suspect]
     Active Substance: INFLIXIMAB
     Route: 065
  108. INFLIXIMAB [Suspect]
     Active Substance: INFLIXIMAB
     Route: 065
  109. INFLIXIMAB [Suspect]
     Active Substance: INFLIXIMAB
     Route: 065
  110. INFLIXIMAB [Suspect]
     Active Substance: INFLIXIMAB
     Route: 065
  111. INFLIXIMAB [Suspect]
     Active Substance: INFLIXIMAB
     Route: 065
  112. INFLIXIMAB [Suspect]
     Active Substance: INFLIXIMAB
     Route: 065
  113. INFLIXIMAB [Suspect]
     Active Substance: INFLIXIMAB
     Route: 065
  114. INFLIXIMAB [Suspect]
     Active Substance: INFLIXIMAB
     Route: 065
  115. INFLIXIMAB [Suspect]
     Active Substance: INFLIXIMAB
     Route: 065
  116. INFLIXIMAB [Suspect]
     Active Substance: INFLIXIMAB
     Route: 065
  117. INFLIXIMAB [Suspect]
     Active Substance: INFLIXIMAB
     Route: 065
  118. INFLIXIMAB [Suspect]
     Active Substance: INFLIXIMAB
     Route: 065
  119. INFLIXIMAB [Suspect]
     Active Substance: INFLIXIMAB
     Route: 065
  120. INFLIXIMAB [Suspect]
     Active Substance: INFLIXIMAB
     Route: 065
  121. INFLIXIMAB [Suspect]
     Active Substance: INFLIXIMAB
     Route: 065
  122. INFLIXIMAB [Suspect]
     Active Substance: INFLIXIMAB
     Route: 065
  123. INFLIXIMAB [Suspect]
     Active Substance: INFLIXIMAB
     Route: 065
  124. INFLIXIMAB [Suspect]
     Active Substance: INFLIXIMAB
     Route: 065
  125. INFLIXIMAB [Suspect]
     Active Substance: INFLIXIMAB
     Route: 065
  126. INFLIXIMAB [Suspect]
     Active Substance: INFLIXIMAB
     Route: 065
  127. INFLIXIMAB [Suspect]
     Active Substance: INFLIXIMAB
  128. INFLIXIMAB [Suspect]
     Active Substance: INFLIXIMAB
  129. INFLIXIMAB [Suspect]
     Active Substance: INFLIXIMAB
  130. INFLIXIMAB [Suspect]
     Active Substance: INFLIXIMAB
  131. INFLIXIMAB [Suspect]
     Active Substance: INFLIXIMAB
  132. INFLIXIMAB [Suspect]
     Active Substance: INFLIXIMAB
  133. INFLIXIMAB [Suspect]
     Active Substance: INFLIXIMAB
  134. INFLIXIMAB [Suspect]
     Active Substance: INFLIXIMAB
  135. INFLIXIMAB [Suspect]
     Active Substance: INFLIXIMAB
  136. INFLIXIMAB [Suspect]
     Active Substance: INFLIXIMAB
  137. INFLIXIMAB [Suspect]
     Active Substance: INFLIXIMAB
  138. INFLIXIMAB [Suspect]
     Active Substance: INFLIXIMAB
  139. INFLIXIMAB [Suspect]
     Active Substance: INFLIXIMAB
  140. INFLIXIMAB [Suspect]
     Active Substance: INFLIXIMAB
  141. INFLIXIMAB [Suspect]
     Active Substance: INFLIXIMAB
  142. INFLIXIMAB [Suspect]
     Active Substance: INFLIXIMAB
  143. INFLIXIMAB [Suspect]
     Active Substance: INFLIXIMAB
  144. INFLIXIMAB [Suspect]
     Active Substance: INFLIXIMAB
  145. INFLIXIMAB [Suspect]
     Active Substance: INFLIXIMAB
  146. INFLIXIMAB [Suspect]
     Active Substance: INFLIXIMAB
  147. INFLIXIMAB [Suspect]
     Active Substance: INFLIXIMAB
  148. INFLIXIMAB [Suspect]
     Active Substance: INFLIXIMAB
  149. INFLIXIMAB [Suspect]
     Active Substance: INFLIXIMAB
     Indication: Colitis
  150. INFLIXIMAB [Suspect]
     Active Substance: INFLIXIMAB
     Indication: Colitis
  151. INFLIXIMAB [Suspect]
     Active Substance: INFLIXIMAB
  152. INFLIXIMAB [Suspect]
     Active Substance: INFLIXIMAB
  153. INFLIXIMAB [Suspect]
     Active Substance: INFLIXIMAB
  154. INFLIXIMAB [Suspect]
     Active Substance: INFLIXIMAB
  155. INFLIXIMAB [Suspect]
     Active Substance: INFLIXIMAB
  156. INFLIXIMAB [Suspect]
     Active Substance: INFLIXIMAB
  157. INFLIXIMAB [Suspect]
     Active Substance: INFLIXIMAB
     Route: 065
  158. ADALIMUMAB [Suspect]
     Active Substance: ADALIMUMAB
     Indication: Colitis
     Route: 065
  159. ADALIMUMAB [Suspect]
     Active Substance: ADALIMUMAB
     Route: 065
  160. ADALIMUMAB [Suspect]
     Active Substance: ADALIMUMAB
     Route: 065
  161. ADALIMUMAB [Suspect]
     Active Substance: ADALIMUMAB
     Route: 065
  162. ADALIMUMAB [Suspect]
     Active Substance: ADALIMUMAB
     Route: 065
  163. ADALIMUMAB [Suspect]
     Active Substance: ADALIMUMAB
     Route: 065
  164. ADALIMUMAB [Suspect]
     Active Substance: ADALIMUMAB
     Route: 065
  165. ADALIMUMAB [Suspect]
     Active Substance: ADALIMUMAB
     Route: 065
  166. ADALIMUMAB [Suspect]
     Active Substance: ADALIMUMAB
     Route: 065
  167. ADALIMUMAB [Suspect]
     Active Substance: ADALIMUMAB
     Route: 065
  168. ADALIMUMAB [Suspect]
     Active Substance: ADALIMUMAB
     Route: 065
  169. ADALIMUMAB [Suspect]
     Active Substance: ADALIMUMAB
     Route: 065
  170. ADALIMUMAB [Suspect]
     Active Substance: ADALIMUMAB
     Route: 065
  171. ADALIMUMAB [Suspect]
     Active Substance: ADALIMUMAB
     Route: 065
  172. ADALIMUMAB [Suspect]
     Active Substance: ADALIMUMAB
     Route: 065
  173. ADALIMUMAB [Suspect]
     Active Substance: ADALIMUMAB
     Route: 065
  174. ADALIMUMAB [Suspect]
     Active Substance: ADALIMUMAB
     Route: 065
  175. ADALIMUMAB [Suspect]
     Active Substance: ADALIMUMAB
     Route: 065
  176. ADALIMUMAB [Suspect]
     Active Substance: ADALIMUMAB
     Route: 065
  177. ADALIMUMAB [Suspect]
     Active Substance: ADALIMUMAB
     Route: 065
  178. ADALIMUMAB [Suspect]
     Active Substance: ADALIMUMAB
     Route: 065
  179. ADALIMUMAB [Suspect]
     Active Substance: ADALIMUMAB
     Route: 065
  180. ADALIMUMAB [Suspect]
     Active Substance: ADALIMUMAB
     Route: 065
  181. ADALIMUMAB [Suspect]
     Active Substance: ADALIMUMAB
     Route: 065
  182. ADALIMUMAB [Suspect]
     Active Substance: ADALIMUMAB
     Route: 065
  183. ADALIMUMAB [Suspect]
     Active Substance: ADALIMUMAB
     Route: 065
  184. ADALIMUMAB [Suspect]
     Active Substance: ADALIMUMAB
     Route: 065
  185. ADALIMUMAB [Suspect]
     Active Substance: ADALIMUMAB
     Route: 065
  186. ADALIMUMAB [Suspect]
     Active Substance: ADALIMUMAB
     Route: 065
  187. ADALIMUMAB [Suspect]
     Active Substance: ADALIMUMAB
     Route: 065
  188. ADALIMUMAB [Suspect]
     Active Substance: ADALIMUMAB
     Route: 065
  189. ADALIMUMAB [Suspect]
     Active Substance: ADALIMUMAB
     Route: 065
  190. ADALIMUMAB [Suspect]
     Active Substance: ADALIMUMAB
     Route: 065
  191. ADALIMUMAB [Suspect]
     Active Substance: ADALIMUMAB
     Route: 065
  192. ADALIMUMAB [Suspect]
     Active Substance: ADALIMUMAB
     Route: 065
  193. ADALIMUMAB [Suspect]
     Active Substance: ADALIMUMAB
     Route: 065
  194. ADALIMUMAB [Suspect]
     Active Substance: ADALIMUMAB
     Route: 065
  195. ADALIMUMAB [Suspect]
     Active Substance: ADALIMUMAB
     Route: 065
  196. ADALIMUMAB [Suspect]
     Active Substance: ADALIMUMAB
     Route: 065
  197. ADALIMUMAB [Suspect]
     Active Substance: ADALIMUMAB
     Route: 065
  198. ADALIMUMAB [Suspect]
     Active Substance: ADALIMUMAB
     Route: 065
  199. ADALIMUMAB [Suspect]
     Active Substance: ADALIMUMAB
     Route: 065
  200. ADALIMUMAB [Suspect]
     Active Substance: ADALIMUMAB
     Route: 065
  201. ADALIMUMAB [Suspect]
     Active Substance: ADALIMUMAB
     Route: 065
  202. ADALIMUMAB [Suspect]
     Active Substance: ADALIMUMAB
     Route: 065
  203. ADALIMUMAB [Suspect]
     Active Substance: ADALIMUMAB
     Route: 065
  204. ADALIMUMAB [Suspect]
     Active Substance: ADALIMUMAB
     Route: 065
  205. ADALIMUMAB [Suspect]
     Active Substance: ADALIMUMAB
     Route: 065
  206. ADALIMUMAB [Suspect]
     Active Substance: ADALIMUMAB
     Route: 065
  207. ADALIMUMAB [Suspect]
     Active Substance: ADALIMUMAB
     Route: 065
  208. ADALIMUMAB [Suspect]
     Active Substance: ADALIMUMAB
     Indication: Colitis
     Route: 050
  209. ADALIMUMAB [Suspect]
     Active Substance: ADALIMUMAB
     Route: 050
  210. ADALIMUMAB [Suspect]
     Active Substance: ADALIMUMAB
     Route: 065
  211. ADALIMUMAB [Suspect]
     Active Substance: ADALIMUMAB
     Route: 065
  212. ADALIMUMAB [Suspect]
     Active Substance: ADALIMUMAB
     Route: 065
  213. ADALIMUMAB [Suspect]
     Active Substance: ADALIMUMAB
     Route: 065
  214. ADALIMUMAB [Suspect]
     Active Substance: ADALIMUMAB
     Route: 050
  215. ADALIMUMAB [Suspect]
     Active Substance: ADALIMUMAB
     Route: 050
  216. ADALIMUMAB [Suspect]
     Active Substance: ADALIMUMAB
     Route: 050
  217. ADALIMUMAB [Suspect]
     Active Substance: ADALIMUMAB
     Route: 050
  218. ADALIMUMAB [Suspect]
     Active Substance: ADALIMUMAB
     Route: 050
  219. ADALIMUMAB [Suspect]
     Active Substance: ADALIMUMAB
     Route: 050
  220. ADALIMUMAB [Suspect]
     Active Substance: ADALIMUMAB
     Route: 050
  221. ADALIMUMAB [Suspect]
     Active Substance: ADALIMUMAB
     Route: 050
  222. ADALIMUMAB [Suspect]
     Active Substance: ADALIMUMAB
     Route: 050
  223. ADALIMUMAB [Suspect]
     Active Substance: ADALIMUMAB
     Route: 065
  224. ADALIMUMAB [Suspect]
     Active Substance: ADALIMUMAB
     Route: 065
  225. ADALIMUMAB [Suspect]
     Active Substance: ADALIMUMAB
     Route: 065
  226. ADALIMUMAB [Suspect]
     Active Substance: ADALIMUMAB
     Route: 065
  227. ADALIMUMAB [Suspect]
     Active Substance: ADALIMUMAB
     Route: 065
  228. ADALIMUMAB [Suspect]
     Active Substance: ADALIMUMAB
     Route: 065
  229. ADALIMUMAB [Suspect]
     Active Substance: ADALIMUMAB
     Route: 065
  230. ADALIMUMAB [Suspect]
     Active Substance: ADALIMUMAB
     Route: 065
  231. ADALIMUMAB [Suspect]
     Active Substance: ADALIMUMAB
     Route: 065
  232. ADALIMUMAB [Suspect]
     Active Substance: ADALIMUMAB
     Route: 065
  233. ADALIMUMAB [Suspect]
     Active Substance: ADALIMUMAB
     Route: 065
  234. ADALIMUMAB [Suspect]
     Active Substance: ADALIMUMAB
     Route: 065
  235. ADALIMUMAB [Suspect]
     Active Substance: ADALIMUMAB
     Route: 065
  236. ADALIMUMAB [Suspect]
     Active Substance: ADALIMUMAB
     Route: 065
  237. ADALIMUMAB [Suspect]
     Active Substance: ADALIMUMAB
     Route: 065
  238. ADALIMUMAB [Suspect]
     Active Substance: ADALIMUMAB
     Route: 065
  239. ADALIMUMAB [Suspect]
     Active Substance: ADALIMUMAB
     Route: 065
  240. ADALIMUMAB [Suspect]
     Active Substance: ADALIMUMAB
     Route: 065
  241. ADALIMUMAB [Suspect]
     Active Substance: ADALIMUMAB
     Route: 065
  242. ADALIMUMAB [Suspect]
     Active Substance: ADALIMUMAB
     Route: 065
  243. ADALIMUMAB [Suspect]
     Active Substance: ADALIMUMAB
     Route: 065
  244. ADALIMUMAB [Suspect]
     Active Substance: ADALIMUMAB
     Route: 065
  245. ADALIMUMAB [Suspect]
     Active Substance: ADALIMUMAB
     Route: 065
  246. ADALIMUMAB [Suspect]
     Active Substance: ADALIMUMAB
     Route: 065
  247. ADALIMUMAB [Suspect]
     Active Substance: ADALIMUMAB
     Route: 065
  248. ADALIMUMAB [Suspect]
     Active Substance: ADALIMUMAB
     Route: 065
  249. ADALIMUMAB [Suspect]
     Active Substance: ADALIMUMAB
     Route: 065
  250. ADALIMUMAB [Suspect]
     Active Substance: ADALIMUMAB
     Route: 065
  251. ADALIMUMAB [Suspect]
     Active Substance: ADALIMUMAB
     Route: 065
  252. ADALIMUMAB [Suspect]
     Active Substance: ADALIMUMAB
     Route: 065
  253. ADALIMUMAB [Suspect]
     Active Substance: ADALIMUMAB
     Route: 065
  254. ADALIMUMAB [Suspect]
     Active Substance: ADALIMUMAB
     Route: 065
  255. ADALIMUMAB [Suspect]
     Active Substance: ADALIMUMAB
     Route: 065
  256. ADALIMUMAB [Suspect]
     Active Substance: ADALIMUMAB
     Route: 065
  257. ADALIMUMAB [Suspect]
     Active Substance: ADALIMUMAB
     Route: 065
  258. ADALIMUMAB [Suspect]
     Active Substance: ADALIMUMAB
     Indication: Colitis
     Route: 065
  259. ADALIMUMAB [Suspect]
     Active Substance: ADALIMUMAB
     Route: 065
  260. ADALIMUMAB [Suspect]
     Active Substance: ADALIMUMAB
     Route: 065
  261. ADALIMUMAB [Suspect]
     Active Substance: ADALIMUMAB
     Route: 065
  262. ADALIMUMAB [Suspect]
     Active Substance: ADALIMUMAB
     Route: 065
  263. ADALIMUMAB [Suspect]
     Active Substance: ADALIMUMAB
     Route: 065
  264. ADALIMUMAB [Suspect]
     Active Substance: ADALIMUMAB
     Route: 065
  265. ADALIMUMAB [Suspect]
     Active Substance: ADALIMUMAB
     Route: 065
  266. ADALIMUMAB [Suspect]
     Active Substance: ADALIMUMAB
     Route: 065
  267. ADALIMUMAB [Suspect]
     Active Substance: ADALIMUMAB
     Route: 065
  268. ADALIMUMAB [Suspect]
     Active Substance: ADALIMUMAB
     Route: 065
  269. ADALIMUMAB [Suspect]
     Active Substance: ADALIMUMAB
     Route: 065
  270. ADALIMUMAB [Suspect]
     Active Substance: ADALIMUMAB
     Route: 065
  271. ADALIMUMAB [Suspect]
     Active Substance: ADALIMUMAB
     Route: 065
  272. ADALIMUMAB [Suspect]
     Active Substance: ADALIMUMAB
     Route: 065
  273. ADALIMUMAB [Suspect]
     Active Substance: ADALIMUMAB
     Route: 065
  274. ADALIMUMAB [Suspect]
     Active Substance: ADALIMUMAB
     Route: 065
  275. ADALIMUMAB [Suspect]
     Active Substance: ADALIMUMAB
     Route: 065
  276. ADALIMUMAB [Suspect]
     Active Substance: ADALIMUMAB
     Route: 065
  277. ADALIMUMAB [Suspect]
     Active Substance: ADALIMUMAB
     Route: 065
  278. ADALIMUMAB [Suspect]
     Active Substance: ADALIMUMAB
     Route: 065
  279. ADALIMUMAB [Suspect]
     Active Substance: ADALIMUMAB
     Route: 065
  280. ADALIMUMAB [Suspect]
     Active Substance: ADALIMUMAB
     Route: 065
  281. ADALIMUMAB [Suspect]
     Active Substance: ADALIMUMAB
     Route: 065
  282. ADALIMUMAB [Suspect]
     Active Substance: ADALIMUMAB
     Route: 065
  283. ADALIMUMAB [Suspect]
     Active Substance: ADALIMUMAB
     Route: 065
  284. ADALIMUMAB [Suspect]
     Active Substance: ADALIMUMAB
     Route: 065
  285. ADALIMUMAB [Suspect]
     Active Substance: ADALIMUMAB
     Route: 065
  286. ADALIMUMAB [Suspect]
     Active Substance: ADALIMUMAB
     Route: 065
  287. ADALIMUMAB [Suspect]
     Active Substance: ADALIMUMAB
     Route: 065
  288. ADALIMUMAB [Suspect]
     Active Substance: ADALIMUMAB
     Route: 065
  289. ADALIMUMAB [Suspect]
     Active Substance: ADALIMUMAB
     Route: 065
  290. ADALIMUMAB [Suspect]
     Active Substance: ADALIMUMAB
     Route: 065
  291. ADALIMUMAB [Suspect]
     Active Substance: ADALIMUMAB
     Route: 065
  292. ADALIMUMAB [Suspect]
     Active Substance: ADALIMUMAB
     Route: 065
  293. ADALIMUMAB [Suspect]
     Active Substance: ADALIMUMAB
     Route: 065
  294. ADALIMUMAB [Suspect]
     Active Substance: ADALIMUMAB
     Route: 065
  295. ADALIMUMAB [Suspect]
     Active Substance: ADALIMUMAB
     Route: 065
  296. ADALIMUMAB [Suspect]
     Active Substance: ADALIMUMAB
     Route: 065
  297. ADALIMUMAB [Suspect]
     Active Substance: ADALIMUMAB
     Route: 065
  298. ADALIMUMAB [Suspect]
     Active Substance: ADALIMUMAB
     Route: 065
  299. ADALIMUMAB [Suspect]
     Active Substance: ADALIMUMAB
     Route: 065
  300. ADALIMUMAB [Suspect]
     Active Substance: ADALIMUMAB
     Route: 065
  301. ADALIMUMAB [Suspect]
     Active Substance: ADALIMUMAB
     Route: 065
  302. ADALIMUMAB [Suspect]
     Active Substance: ADALIMUMAB
     Route: 065
  303. ADALIMUMAB [Suspect]
     Active Substance: ADALIMUMAB
     Route: 065
  304. ADALIMUMAB [Suspect]
     Active Substance: ADALIMUMAB
     Route: 065
  305. ADALIMUMAB [Suspect]
     Active Substance: ADALIMUMAB
     Route: 065
  306. ADALIMUMAB [Suspect]
     Active Substance: ADALIMUMAB
     Route: 065
  307. ADALIMUMAB [Suspect]
     Active Substance: ADALIMUMAB
     Route: 065
  308. ADALIMUMAB [Suspect]
     Active Substance: ADALIMUMAB
     Indication: Colitis
     Route: 065
  309. ADALIMUMAB [Suspect]
     Active Substance: ADALIMUMAB
     Route: 065
  310. ADALIMUMAB [Suspect]
     Active Substance: ADALIMUMAB
     Route: 065
  311. ADALIMUMAB [Suspect]
     Active Substance: ADALIMUMAB
     Route: 065
  312. ADALIMUMAB [Suspect]
     Active Substance: ADALIMUMAB
     Route: 065
  313. ADALIMUMAB [Suspect]
     Active Substance: ADALIMUMAB
     Route: 065
  314. ADALIMUMAB [Suspect]
     Active Substance: ADALIMUMAB
     Route: 065
  315. ADALIMUMAB [Suspect]
     Active Substance: ADALIMUMAB
     Route: 065
  316. ADALIMUMAB [Suspect]
     Active Substance: ADALIMUMAB
     Route: 065
  317. ADALIMUMAB [Suspect]
     Active Substance: ADALIMUMAB
     Route: 065
  318. ADALIMUMAB [Suspect]
     Active Substance: ADALIMUMAB
     Route: 065
  319. ADALIMUMAB [Suspect]
     Active Substance: ADALIMUMAB
     Route: 065
  320. ADALIMUMAB [Suspect]
     Active Substance: ADALIMUMAB
     Route: 065
  321. ADALIMUMAB [Suspect]
     Active Substance: ADALIMUMAB
     Route: 065
  322. ADALIMUMAB [Suspect]
     Active Substance: ADALIMUMAB
     Route: 065
  323. ADALIMUMAB [Suspect]
     Active Substance: ADALIMUMAB
     Route: 065
  324. ADALIMUMAB [Suspect]
     Active Substance: ADALIMUMAB
     Route: 065
  325. ADALIMUMAB [Suspect]
     Active Substance: ADALIMUMAB
     Route: 065
  326. ADALIMUMAB [Suspect]
     Active Substance: ADALIMUMAB
     Route: 065
  327. ADALIMUMAB [Suspect]
     Active Substance: ADALIMUMAB
     Route: 065
  328. ADALIMUMAB [Suspect]
     Active Substance: ADALIMUMAB
     Route: 065
  329. ADALIMUMAB [Suspect]
     Active Substance: ADALIMUMAB
     Route: 065
  330. ADALIMUMAB [Suspect]
     Active Substance: ADALIMUMAB
     Route: 065
  331. ADALIMUMAB [Suspect]
     Active Substance: ADALIMUMAB
     Route: 065
  332. ADALIMUMAB [Suspect]
     Active Substance: ADALIMUMAB
     Route: 065
  333. ADALIMUMAB [Suspect]
     Active Substance: ADALIMUMAB
     Route: 065
  334. ADALIMUMAB [Suspect]
     Active Substance: ADALIMUMAB
     Route: 065
  335. ADALIMUMAB [Suspect]
     Active Substance: ADALIMUMAB
     Route: 065
  336. ADALIMUMAB [Suspect]
     Active Substance: ADALIMUMAB
     Route: 065
  337. ADALIMUMAB [Suspect]
     Active Substance: ADALIMUMAB
     Route: 065
  338. ADALIMUMAB [Suspect]
     Active Substance: ADALIMUMAB
     Route: 065
  339. ADALIMUMAB [Suspect]
     Active Substance: ADALIMUMAB
     Route: 065
  340. ADALIMUMAB [Suspect]
     Active Substance: ADALIMUMAB
     Route: 065
  341. ADALIMUMAB [Suspect]
     Active Substance: ADALIMUMAB
     Route: 065
  342. ADALIMUMAB [Suspect]
     Active Substance: ADALIMUMAB
     Route: 065
  343. ADALIMUMAB [Suspect]
     Active Substance: ADALIMUMAB
     Route: 065
  344. ADALIMUMAB [Suspect]
     Active Substance: ADALIMUMAB
     Route: 065
  345. ADALIMUMAB [Suspect]
     Active Substance: ADALIMUMAB
     Route: 065
  346. ADALIMUMAB [Suspect]
     Active Substance: ADALIMUMAB
     Route: 065
  347. ADALIMUMAB [Suspect]
     Active Substance: ADALIMUMAB
     Route: 065
  348. ADALIMUMAB [Suspect]
     Active Substance: ADALIMUMAB
     Route: 065
  349. ADALIMUMAB [Suspect]
     Active Substance: ADALIMUMAB
     Route: 065
  350. ADALIMUMAB [Suspect]
     Active Substance: ADALIMUMAB
     Route: 065
  351. ADALIMUMAB [Suspect]
     Active Substance: ADALIMUMAB
     Route: 065
  352. ADALIMUMAB [Suspect]
     Active Substance: ADALIMUMAB
     Route: 065
  353. ADALIMUMAB [Suspect]
     Active Substance: ADALIMUMAB
     Route: 065
  354. ADALIMUMAB [Suspect]
     Active Substance: ADALIMUMAB
     Route: 065
  355. ADALIMUMAB [Suspect]
     Active Substance: ADALIMUMAB
     Route: 065
  356. ADALIMUMAB [Suspect]
     Active Substance: ADALIMUMAB
     Route: 065
  357. ADALIMUMAB [Suspect]
     Active Substance: ADALIMUMAB
     Route: 065
  358. ADALIMUMAB [Suspect]
     Active Substance: ADALIMUMAB
     Indication: Colitis
     Route: 065
  359. ADALIMUMAB [Suspect]
     Active Substance: ADALIMUMAB
     Route: 065
  360. ADALIMUMAB [Suspect]
     Active Substance: ADALIMUMAB
     Route: 065
  361. ADALIMUMAB [Suspect]
     Active Substance: ADALIMUMAB
     Route: 065
  362. ADALIMUMAB [Suspect]
     Active Substance: ADALIMUMAB
     Route: 065
  363. ADALIMUMAB [Suspect]
     Active Substance: ADALIMUMAB
     Route: 065
  364. ADALIMUMAB [Suspect]
     Active Substance: ADALIMUMAB
     Route: 065
  365. ADALIMUMAB [Suspect]
     Active Substance: ADALIMUMAB
     Route: 065
  366. ADALIMUMAB [Suspect]
     Active Substance: ADALIMUMAB
     Route: 065
  367. ADALIMUMAB [Suspect]
     Active Substance: ADALIMUMAB
     Route: 065
  368. ADALIMUMAB [Suspect]
     Active Substance: ADALIMUMAB
     Route: 065
  369. ADALIMUMAB [Suspect]
     Active Substance: ADALIMUMAB
  370. ADALIMUMAB [Suspect]
     Active Substance: ADALIMUMAB
  371. ADALIMUMAB [Suspect]
     Active Substance: ADALIMUMAB
  372. ADALIMUMAB [Suspect]
     Active Substance: ADALIMUMAB
  373. ADALIMUMAB [Suspect]
     Active Substance: ADALIMUMAB
  374. ADALIMUMAB [Suspect]
     Active Substance: ADALIMUMAB
  375. ADALIMUMAB [Suspect]
     Active Substance: ADALIMUMAB
  376. ADALIMUMAB [Suspect]
     Active Substance: ADALIMUMAB
  377. ADALIMUMAB [Suspect]
     Active Substance: ADALIMUMAB
  378. ADALIMUMAB [Suspect]
     Active Substance: ADALIMUMAB
  379. ADALIMUMAB [Suspect]
     Active Substance: ADALIMUMAB
  380. ADALIMUMAB [Suspect]
     Active Substance: ADALIMUMAB
  381. ADALIMUMAB [Suspect]
     Active Substance: ADALIMUMAB
  382. ADALIMUMAB [Suspect]
     Active Substance: ADALIMUMAB
  383. ADALIMUMAB [Suspect]
     Active Substance: ADALIMUMAB
  384. ADALIMUMAB [Suspect]
     Active Substance: ADALIMUMAB
  385. ADALIMUMAB [Suspect]
     Active Substance: ADALIMUMAB
  386. ADALIMUMAB [Suspect]
     Active Substance: ADALIMUMAB
  387. ADALIMUMAB [Suspect]
     Active Substance: ADALIMUMAB
  388. ADALIMUMAB [Suspect]
     Active Substance: ADALIMUMAB
  389. ADALIMUMAB [Suspect]
     Active Substance: ADALIMUMAB
  390. ADALIMUMAB [Suspect]
     Active Substance: ADALIMUMAB
  391. ADALIMUMAB [Suspect]
     Active Substance: ADALIMUMAB
  392. ADALIMUMAB [Suspect]
     Active Substance: ADALIMUMAB
  393. ADALIMUMAB [Suspect]
     Active Substance: ADALIMUMAB
  394. ADALIMUMAB [Suspect]
     Active Substance: ADALIMUMAB
  395. ADALIMUMAB [Suspect]
     Active Substance: ADALIMUMAB
  396. ADALIMUMAB [Suspect]
     Active Substance: ADALIMUMAB
  397. ADALIMUMAB [Suspect]
     Active Substance: ADALIMUMAB
  398. ADALIMUMAB [Suspect]
     Active Substance: ADALIMUMAB
  399. ADALIMUMAB [Suspect]
     Active Substance: ADALIMUMAB
  400. ADALIMUMAB [Suspect]
     Active Substance: ADALIMUMAB
  401. ADALIMUMAB [Suspect]
     Active Substance: ADALIMUMAB
  402. ADALIMUMAB [Suspect]
     Active Substance: ADALIMUMAB
  403. ADALIMUMAB [Suspect]
     Active Substance: ADALIMUMAB
  404. ADALIMUMAB [Suspect]
     Active Substance: ADALIMUMAB
  405. ADALIMUMAB [Suspect]
     Active Substance: ADALIMUMAB
  406. ADALIMUMAB [Suspect]
     Active Substance: ADALIMUMAB
  407. ADALIMUMAB [Suspect]
     Active Substance: ADALIMUMAB
  408. ADALIMUMAB [Suspect]
     Active Substance: ADALIMUMAB
     Indication: Colitis
     Route: 058
  409. ADALIMUMAB [Suspect]
     Active Substance: ADALIMUMAB
     Route: 058
  410. ADALIMUMAB [Suspect]
     Active Substance: ADALIMUMAB
     Route: 058
  411. ADALIMUMAB [Suspect]
     Active Substance: ADALIMUMAB
     Route: 058
  412. ADALIMUMAB [Suspect]
     Active Substance: ADALIMUMAB
     Route: 058
  413. ADALIMUMAB [Suspect]
     Active Substance: ADALIMUMAB
     Route: 058
  414. ADALIMUMAB [Suspect]
     Active Substance: ADALIMUMAB
     Route: 058
  415. ADALIMUMAB [Suspect]
     Active Substance: ADALIMUMAB
  416. ADALIMUMAB [Suspect]
     Active Substance: ADALIMUMAB
  417. ADALIMUMAB [Suspect]
     Active Substance: ADALIMUMAB
  418. ADALIMUMAB [Suspect]
     Active Substance: ADALIMUMAB
  419. ADALIMUMAB [Suspect]
     Active Substance: ADALIMUMAB
  420. ADALIMUMAB [Suspect]
     Active Substance: ADALIMUMAB
  421. ADALIMUMAB [Suspect]
     Active Substance: ADALIMUMAB
  422. ADALIMUMAB [Suspect]
     Active Substance: ADALIMUMAB
  423. ADALIMUMAB [Suspect]
     Active Substance: ADALIMUMAB
  424. ADALIMUMAB [Suspect]
     Active Substance: ADALIMUMAB
  425. ADALIMUMAB [Suspect]
     Active Substance: ADALIMUMAB
  426. ADALIMUMAB [Suspect]
     Active Substance: ADALIMUMAB
  427. ADALIMUMAB [Suspect]
     Active Substance: ADALIMUMAB
  428. ADALIMUMAB [Suspect]
     Active Substance: ADALIMUMAB
  429. ADALIMUMAB [Suspect]
     Active Substance: ADALIMUMAB
  430. ADALIMUMAB [Suspect]
     Active Substance: ADALIMUMAB
  431. ADALIMUMAB [Suspect]
     Active Substance: ADALIMUMAB
  432. ADALIMUMAB [Suspect]
     Active Substance: ADALIMUMAB
  433. ADALIMUMAB [Suspect]
     Active Substance: ADALIMUMAB
  434. ADALIMUMAB [Suspect]
     Active Substance: ADALIMUMAB
  435. ADALIMUMAB [Suspect]
     Active Substance: ADALIMUMAB
  436. ADALIMUMAB [Suspect]
     Active Substance: ADALIMUMAB
  437. ADALIMUMAB [Suspect]
     Active Substance: ADALIMUMAB
  438. ADALIMUMAB [Suspect]
     Active Substance: ADALIMUMAB
  439. ADALIMUMAB [Suspect]
     Active Substance: ADALIMUMAB
  440. ADALIMUMAB [Suspect]
     Active Substance: ADALIMUMAB
  441. ADALIMUMAB [Suspect]
     Active Substance: ADALIMUMAB
  442. ADALIMUMAB [Suspect]
     Active Substance: ADALIMUMAB
  443. ADALIMUMAB [Suspect]
     Active Substance: ADALIMUMAB
  444. ADALIMUMAB [Suspect]
     Active Substance: ADALIMUMAB
  445. ADALIMUMAB [Suspect]
     Active Substance: ADALIMUMAB
  446. ADALIMUMAB [Suspect]
     Active Substance: ADALIMUMAB
  447. ADALIMUMAB [Suspect]
     Active Substance: ADALIMUMAB
  448. ADALIMUMAB [Suspect]
     Active Substance: ADALIMUMAB
  449. ADALIMUMAB [Suspect]
     Active Substance: ADALIMUMAB
  450. ADALIMUMAB [Suspect]
     Active Substance: ADALIMUMAB
  451. ADALIMUMAB [Suspect]
     Active Substance: ADALIMUMAB
  452. ADALIMUMAB [Suspect]
     Active Substance: ADALIMUMAB
  453. ADALIMUMAB [Suspect]
     Active Substance: ADALIMUMAB
  454. ADALIMUMAB [Suspect]
     Active Substance: ADALIMUMAB
  455. ADALIMUMAB [Suspect]
     Active Substance: ADALIMUMAB
  456. ADALIMUMAB [Suspect]
     Active Substance: ADALIMUMAB
  457. ADALIMUMAB [Suspect]
     Active Substance: ADALIMUMAB
  458. ADALIMUMAB [Suspect]
     Active Substance: ADALIMUMAB
     Indication: Colitis
  459. ADALIMUMAB [Suspect]
     Active Substance: ADALIMUMAB
  460. ADALIMUMAB [Suspect]
     Active Substance: ADALIMUMAB
  461. ADALIMUMAB [Suspect]
     Active Substance: ADALIMUMAB
  462. ADALIMUMAB [Suspect]
     Active Substance: ADALIMUMAB
  463. ADALIMUMAB [Suspect]
     Active Substance: ADALIMUMAB
  464. ADALIMUMAB [Suspect]
     Active Substance: ADALIMUMAB
  465. ADALIMUMAB [Suspect]
     Active Substance: ADALIMUMAB
  466. ADALIMUMAB [Suspect]
     Active Substance: ADALIMUMAB
  467. ADALIMUMAB [Suspect]
     Active Substance: ADALIMUMAB
  468. ADALIMUMAB [Suspect]
     Active Substance: ADALIMUMAB
  469. ADALIMUMAB [Suspect]
     Active Substance: ADALIMUMAB
  470. ADALIMUMAB [Suspect]
     Active Substance: ADALIMUMAB
  471. ADALIMUMAB [Suspect]
     Active Substance: ADALIMUMAB
  472. ADALIMUMAB [Suspect]
     Active Substance: ADALIMUMAB
  473. ADALIMUMAB [Suspect]
     Active Substance: ADALIMUMAB
  474. ADALIMUMAB [Suspect]
     Active Substance: ADALIMUMAB
  475. ADALIMUMAB [Suspect]
     Active Substance: ADALIMUMAB
  476. ADALIMUMAB [Suspect]
     Active Substance: ADALIMUMAB
  477. ADALIMUMAB [Suspect]
     Active Substance: ADALIMUMAB
  478. ADALIMUMAB [Suspect]
     Active Substance: ADALIMUMAB
  479. ADALIMUMAB [Suspect]
     Active Substance: ADALIMUMAB
  480. ADALIMUMAB [Suspect]
     Active Substance: ADALIMUMAB
  481. ADALIMUMAB [Suspect]
     Active Substance: ADALIMUMAB
  482. ADALIMUMAB [Suspect]
     Active Substance: ADALIMUMAB
  483. ADALIMUMAB [Suspect]
     Active Substance: ADALIMUMAB
  484. ADALIMUMAB [Suspect]
     Active Substance: ADALIMUMAB
  485. ADALIMUMAB [Suspect]
     Active Substance: ADALIMUMAB
  486. ADALIMUMAB [Suspect]
     Active Substance: ADALIMUMAB
  487. ADALIMUMAB [Suspect]
     Active Substance: ADALIMUMAB
  488. ADALIMUMAB [Suspect]
     Active Substance: ADALIMUMAB
  489. ADALIMUMAB [Suspect]
     Active Substance: ADALIMUMAB
  490. ADALIMUMAB [Suspect]
     Active Substance: ADALIMUMAB
  491. ADALIMUMAB [Suspect]
     Active Substance: ADALIMUMAB
  492. ADALIMUMAB [Suspect]
     Active Substance: ADALIMUMAB
  493. ADALIMUMAB [Suspect]
     Active Substance: ADALIMUMAB
  494. ADALIMUMAB [Suspect]
     Active Substance: ADALIMUMAB
  495. ADALIMUMAB [Suspect]
     Active Substance: ADALIMUMAB
  496. ADALIMUMAB [Suspect]
     Active Substance: ADALIMUMAB
  497. ADALIMUMAB [Suspect]
     Active Substance: ADALIMUMAB
  498. ADALIMUMAB [Suspect]
     Active Substance: ADALIMUMAB
  499. ADALIMUMAB [Suspect]
     Active Substance: ADALIMUMAB
  500. ADALIMUMAB [Suspect]
     Active Substance: ADALIMUMAB
  501. ADALIMUMAB [Suspect]
     Active Substance: ADALIMUMAB
  502. ADALIMUMAB [Suspect]
     Active Substance: ADALIMUMAB
  503. ADALIMUMAB [Suspect]
     Active Substance: ADALIMUMAB
  504. ADALIMUMAB [Suspect]
     Active Substance: ADALIMUMAB
  505. ADALIMUMAB [Suspect]
     Active Substance: ADALIMUMAB
  506. ADALIMUMAB [Suspect]
     Active Substance: ADALIMUMAB
  507. ADALIMUMAB [Suspect]
     Active Substance: ADALIMUMAB
  508. ADALIMUMAB [Suspect]
     Active Substance: ADALIMUMAB
     Indication: Colitis
  509. ADALIMUMAB [Suspect]
     Active Substance: ADALIMUMAB
  510. ADALIMUMAB [Suspect]
     Active Substance: ADALIMUMAB
  511. ADALIMUMAB [Suspect]
     Active Substance: ADALIMUMAB
  512. ADALIMUMAB [Suspect]
     Active Substance: ADALIMUMAB
  513. ADALIMUMAB [Suspect]
     Active Substance: ADALIMUMAB
  514. ADALIMUMAB [Suspect]
     Active Substance: ADALIMUMAB
  515. ADALIMUMAB [Suspect]
     Active Substance: ADALIMUMAB
  516. ADALIMUMAB [Suspect]
     Active Substance: ADALIMUMAB
  517. ADALIMUMAB [Suspect]
     Active Substance: ADALIMUMAB
  518. ADALIMUMAB [Suspect]
     Active Substance: ADALIMUMAB
  519. ADALIMUMAB [Suspect]
     Active Substance: ADALIMUMAB
  520. ADALIMUMAB [Suspect]
     Active Substance: ADALIMUMAB
  521. ADALIMUMAB [Suspect]
     Active Substance: ADALIMUMAB
  522. ADALIMUMAB [Suspect]
     Active Substance: ADALIMUMAB
  523. ADALIMUMAB [Suspect]
     Active Substance: ADALIMUMAB
  524. ADALIMUMAB [Suspect]
     Active Substance: ADALIMUMAB
  525. ADALIMUMAB [Suspect]
     Active Substance: ADALIMUMAB
  526. ADALIMUMAB [Suspect]
     Active Substance: ADALIMUMAB
  527. ADALIMUMAB [Suspect]
     Active Substance: ADALIMUMAB
  528. ADALIMUMAB [Suspect]
     Active Substance: ADALIMUMAB
  529. ADALIMUMAB [Suspect]
     Active Substance: ADALIMUMAB
  530. ADALIMUMAB [Suspect]
     Active Substance: ADALIMUMAB
  531. ADALIMUMAB [Suspect]
     Active Substance: ADALIMUMAB
  532. ADALIMUMAB [Suspect]
     Active Substance: ADALIMUMAB
  533. ADALIMUMAB [Suspect]
     Active Substance: ADALIMUMAB
  534. ADALIMUMAB [Suspect]
     Active Substance: ADALIMUMAB
  535. ADALIMUMAB [Suspect]
     Active Substance: ADALIMUMAB
  536. ADALIMUMAB [Suspect]
     Active Substance: ADALIMUMAB
  537. ADALIMUMAB [Suspect]
     Active Substance: ADALIMUMAB
  538. ADALIMUMAB [Suspect]
     Active Substance: ADALIMUMAB
  539. ADALIMUMAB [Suspect]
     Active Substance: ADALIMUMAB
  540. ADALIMUMAB [Suspect]
     Active Substance: ADALIMUMAB
  541. ADALIMUMAB [Suspect]
     Active Substance: ADALIMUMAB
  542. ADALIMUMAB [Suspect]
     Active Substance: ADALIMUMAB
  543. ADALIMUMAB [Suspect]
     Active Substance: ADALIMUMAB
  544. ADALIMUMAB [Suspect]
     Active Substance: ADALIMUMAB
  545. ADALIMUMAB [Suspect]
     Active Substance: ADALIMUMAB
  546. ADALIMUMAB [Suspect]
     Active Substance: ADALIMUMAB
  547. ADALIMUMAB [Suspect]
     Active Substance: ADALIMUMAB
  548. ADALIMUMAB [Suspect]
     Active Substance: ADALIMUMAB
  549. ADALIMUMAB [Suspect]
     Active Substance: ADALIMUMAB
  550. ADALIMUMAB [Suspect]
     Active Substance: ADALIMUMAB
  551. ADALIMUMAB [Suspect]
     Active Substance: ADALIMUMAB
  552. ADALIMUMAB [Suspect]
     Active Substance: ADALIMUMAB
  553. ADALIMUMAB [Suspect]
     Active Substance: ADALIMUMAB
  554. ADALIMUMAB [Suspect]
     Active Substance: ADALIMUMAB
  555. ADALIMUMAB [Suspect]
     Active Substance: ADALIMUMAB
  556. ADALIMUMAB [Suspect]
     Active Substance: ADALIMUMAB
  557. ADALIMUMAB [Suspect]
     Active Substance: ADALIMUMAB
  558. ADALIMUMAB [Suspect]
     Active Substance: ADALIMUMAB
     Indication: Colitis
  559. ADALIMUMAB [Suspect]
     Active Substance: ADALIMUMAB
  560. ADALIMUMAB [Suspect]
     Active Substance: ADALIMUMAB
  561. ADALIMUMAB [Suspect]
     Active Substance: ADALIMUMAB
  562. ADALIMUMAB [Suspect]
     Active Substance: ADALIMUMAB
  563. ADALIMUMAB [Suspect]
     Active Substance: ADALIMUMAB
  564. ADALIMUMAB [Suspect]
     Active Substance: ADALIMUMAB
  565. ADALIMUMAB [Suspect]
     Active Substance: ADALIMUMAB
  566. ADALIMUMAB [Suspect]
     Active Substance: ADALIMUMAB
  567. ADALIMUMAB [Suspect]
     Active Substance: ADALIMUMAB
  568. ADALIMUMAB [Suspect]
     Active Substance: ADALIMUMAB
  569. ADALIMUMAB [Suspect]
     Active Substance: ADALIMUMAB
  570. ADALIMUMAB [Suspect]
     Active Substance: ADALIMUMAB
  571. ADALIMUMAB [Suspect]
     Active Substance: ADALIMUMAB
  572. ADALIMUMAB [Suspect]
     Active Substance: ADALIMUMAB
  573. ADALIMUMAB [Suspect]
     Active Substance: ADALIMUMAB
     Indication: Colitis
     Route: 065
  574. ADALIMUMAB [Suspect]
     Active Substance: ADALIMUMAB
     Route: 065
  575. ADALIMUMAB [Suspect]
     Active Substance: ADALIMUMAB
     Route: 065
  576. ADALIMUMAB [Suspect]
     Active Substance: ADALIMUMAB
     Route: 065
  577. ADALIMUMAB [Suspect]
     Active Substance: ADALIMUMAB
     Route: 065
  578. ADALIMUMAB [Suspect]
     Active Substance: ADALIMUMAB
     Route: 065
  579. ADALIMUMAB [Suspect]
     Active Substance: ADALIMUMAB
     Route: 065
  580. ADALIMUMAB [Suspect]
     Active Substance: ADALIMUMAB
     Route: 065
  581. ADALIMUMAB [Suspect]
     Active Substance: ADALIMUMAB
     Route: 065
  582. ADALIMUMAB [Suspect]
     Active Substance: ADALIMUMAB
     Route: 065
  583. ADALIMUMAB [Suspect]
     Active Substance: ADALIMUMAB
     Route: 065
  584. ADALIMUMAB [Suspect]
     Active Substance: ADALIMUMAB
     Route: 065
  585. ADALIMUMAB [Suspect]
     Active Substance: ADALIMUMAB
     Route: 065
  586. INFLIXIMAB [Suspect]
     Active Substance: INFLIXIMAB
     Indication: Colitis
     Route: 065
  587. INFLIXIMAB [Suspect]
     Active Substance: INFLIXIMAB
     Indication: Colitis
     Route: 065
  588. INFLIXIMAB [Suspect]
     Active Substance: INFLIXIMAB
     Route: 065
  589. INFLIXIMAB [Suspect]
     Active Substance: INFLIXIMAB
     Route: 065
  590. INFLIXIMAB [Suspect]
     Active Substance: INFLIXIMAB
     Route: 065
  591. INFLIXIMAB [Suspect]
     Active Substance: INFLIXIMAB
     Route: 065
  592. INFLIXIMAB [Suspect]
     Active Substance: INFLIXIMAB
     Route: 065
  593. INFLIXIMAB [Suspect]
     Active Substance: INFLIXIMAB
     Route: 065
  594. INFLIXIMAB [Suspect]
     Active Substance: INFLIXIMAB
     Route: 065
  595. INFLIXIMAB [Suspect]
     Active Substance: INFLIXIMAB
     Route: 065
  596. INFLIXIMAB [Suspect]
     Active Substance: INFLIXIMAB
     Route: 065
  597. INFLIXIMAB [Suspect]
     Active Substance: INFLIXIMAB
     Route: 065
  598. INFLIXIMAB [Suspect]
     Active Substance: INFLIXIMAB
     Route: 065
  599. INFLIXIMAB [Suspect]
     Active Substance: INFLIXIMAB
     Route: 065
  600. INFLIXIMAB [Suspect]
     Active Substance: INFLIXIMAB
  601. INFLIXIMAB [Suspect]
     Active Substance: INFLIXIMAB
     Route: 065
  602. INFLIXIMAB [Suspect]
     Active Substance: INFLIXIMAB
     Route: 065
  603. INFLIXIMAB [Suspect]
     Active Substance: INFLIXIMAB
     Route: 065
  604. INFLIXIMAB [Suspect]
     Active Substance: INFLIXIMAB
     Route: 065
  605. INFLIXIMAB [Suspect]
     Active Substance: INFLIXIMAB
     Route: 065
  606. INFLIXIMAB [Suspect]
     Active Substance: INFLIXIMAB
     Route: 065
  607. INFLIXIMAB [Suspect]
     Active Substance: INFLIXIMAB
     Route: 065
  608. INFLIXIMAB [Suspect]
     Active Substance: INFLIXIMAB
     Route: 065
  609. INFLIXIMAB [Suspect]
     Active Substance: INFLIXIMAB
     Route: 065
  610. INFLIXIMAB [Suspect]
     Active Substance: INFLIXIMAB
     Route: 065
  611. INFLIXIMAB [Suspect]
     Active Substance: INFLIXIMAB
     Route: 065
  612. INFLIXIMAB [Suspect]
     Active Substance: INFLIXIMAB
     Route: 065
  613. INFLIXIMAB [Suspect]
     Active Substance: INFLIXIMAB
     Route: 065
  614. INFLIXIMAB [Suspect]
     Active Substance: INFLIXIMAB
     Route: 065
  615. INFLIXIMAB [Suspect]
     Active Substance: INFLIXIMAB
     Route: 065
  616. INFLIXIMAB [Suspect]
     Active Substance: INFLIXIMAB
     Route: 065
  617. INFLIXIMAB [Suspect]
     Active Substance: INFLIXIMAB
  618. INFLIXIMAB [Suspect]
     Active Substance: INFLIXIMAB
  619. INFLIXIMAB [Suspect]
     Active Substance: INFLIXIMAB
  620. INFLIXIMAB [Suspect]
     Active Substance: INFLIXIMAB
     Indication: Colitis
  621. INFLIXIMAB [Suspect]
     Active Substance: INFLIXIMAB
     Indication: Colitis
  622. INFLIXIMAB [Suspect]
     Active Substance: INFLIXIMAB
  623. INFLIXIMAB [Suspect]
     Active Substance: INFLIXIMAB
  624. INFLIXIMAB [Suspect]
     Active Substance: INFLIXIMAB
  625. METHOTREXATE [Suspect]
     Active Substance: METHOTREXATE
     Indication: Colitis
     Route: 065
  626. METHOTREXATE [Suspect]
     Active Substance: METHOTREXATE
     Indication: Colitis
     Route: 065
  627. METHOTREXATE [Suspect]
     Active Substance: METHOTREXATE
     Route: 065
  628. METHOTREXATE [Suspect]
     Active Substance: METHOTREXATE
     Route: 065
  629. METHOTREXATE [Suspect]
     Active Substance: METHOTREXATE
     Route: 065
  630. METHOTREXATE [Suspect]
     Active Substance: METHOTREXATE
     Route: 065
  631. METHOTREXATE [Suspect]
     Active Substance: METHOTREXATE
     Route: 065
  632. METHOTREXATE [Suspect]
     Active Substance: METHOTREXATE
     Route: 065
  633. METHOTREXATE [Suspect]
     Active Substance: METHOTREXATE
     Route: 065
  634. METHOTREXATE [Suspect]
     Active Substance: METHOTREXATE
     Route: 065
  635. METHOTREXATE [Suspect]
     Active Substance: METHOTREXATE
     Route: 065
  636. METHOTREXATE [Suspect]
     Active Substance: METHOTREXATE
     Route: 065
  637. METHOTREXATE [Suspect]
     Active Substance: METHOTREXATE
     Route: 065
  638. METHOTREXATE [Suspect]
     Active Substance: METHOTREXATE
     Route: 065
  639. METHOTREXATE [Suspect]
     Active Substance: METHOTREXATE
     Route: 065
  640. METHOTREXATE [Suspect]
     Active Substance: METHOTREXATE
     Route: 065
  641. METHOTREXATE [Suspect]
     Active Substance: METHOTREXATE
     Route: 065
  642. METHOTREXATE [Suspect]
     Active Substance: METHOTREXATE
     Route: 065
  643. METHOTREXATE [Suspect]
     Active Substance: METHOTREXATE
     Route: 065
  644. METHOTREXATE [Suspect]
     Active Substance: METHOTREXATE
     Route: 065
  645. METHOTREXATE [Suspect]
     Active Substance: METHOTREXATE
     Route: 065
  646. METHOTREXATE [Suspect]
     Active Substance: METHOTREXATE
     Route: 065
  647. METHOTREXATE [Suspect]
     Active Substance: METHOTREXATE
     Route: 065
  648. METHOTREXATE [Suspect]
     Active Substance: METHOTREXATE
     Route: 065
  649. METHOTREXATE [Suspect]
     Active Substance: METHOTREXATE
     Route: 065
  650. METHOTREXATE [Suspect]
     Active Substance: METHOTREXATE
     Route: 065
  651. METHOTREXATE [Suspect]
     Active Substance: METHOTREXATE
     Route: 065
  652. METHOTREXATE [Suspect]
     Active Substance: METHOTREXATE
     Route: 065
  653. METHOTREXATE [Suspect]
     Active Substance: METHOTREXATE
     Route: 065
  654. METHOTREXATE [Suspect]
     Active Substance: METHOTREXATE
     Route: 065
  655. METHOTREXATE [Suspect]
     Active Substance: METHOTREXATE
     Route: 065
  656. METHOTREXATE [Suspect]
     Active Substance: METHOTREXATE
     Route: 065
  657. METHOTREXATE [Suspect]
     Active Substance: METHOTREXATE
     Route: 065
  658. METHOTREXATE [Suspect]
     Active Substance: METHOTREXATE
     Route: 065
  659. METHOTREXATE [Suspect]
     Active Substance: METHOTREXATE
     Route: 065
  660. METHOTREXATE [Suspect]
     Active Substance: METHOTREXATE
     Route: 065
  661. METHOTREXATE [Suspect]
     Active Substance: METHOTREXATE
     Route: 065
  662. METHOTREXATE [Suspect]
     Active Substance: METHOTREXATE
     Route: 065
  663. METHOTREXATE [Suspect]
     Active Substance: METHOTREXATE
     Route: 065
  664. METHOTREXATE [Suspect]
     Active Substance: METHOTREXATE
     Route: 065
  665. METHOTREXATE [Suspect]
     Active Substance: METHOTREXATE
     Route: 065
  666. METHOTREXATE [Suspect]
     Active Substance: METHOTREXATE
     Route: 065
  667. METHOTREXATE [Suspect]
     Active Substance: METHOTREXATE
     Route: 065
  668. METHOTREXATE [Suspect]
     Active Substance: METHOTREXATE
     Route: 065
  669. METHOTREXATE [Suspect]
     Active Substance: METHOTREXATE
     Route: 065
  670. METHOTREXATE [Suspect]
     Active Substance: METHOTREXATE
     Route: 065
  671. METHOTREXATE [Suspect]
     Active Substance: METHOTREXATE
     Route: 065
  672. METHOTREXATE [Suspect]
     Active Substance: METHOTREXATE
     Route: 065
  673. METHOTREXATE [Suspect]
     Active Substance: METHOTREXATE
     Route: 065
  674. METHOTREXATE [Suspect]
     Active Substance: METHOTREXATE
     Route: 065
  675. METHOTREXATE [Suspect]
     Active Substance: METHOTREXATE
     Indication: Colitis
     Route: 065
  676. METHOTREXATE [Suspect]
     Active Substance: METHOTREXATE
     Indication: Colitis
  677. METHOTREXATE [Suspect]
     Active Substance: METHOTREXATE
  678. METHOTREXATE [Suspect]
     Active Substance: METHOTREXATE
  679. METHOTREXATE [Suspect]
     Active Substance: METHOTREXATE
  680. METHOTREXATE [Suspect]
     Active Substance: METHOTREXATE
  681. METHOTREXATE [Suspect]
     Active Substance: METHOTREXATE
  682. METHOTREXATE [Suspect]
     Active Substance: METHOTREXATE
  683. METHOTREXATE [Suspect]
     Active Substance: METHOTREXATE
  684. METHOTREXATE [Suspect]
     Active Substance: METHOTREXATE
  685. METHOTREXATE [Suspect]
     Active Substance: METHOTREXATE
  686. METHOTREXATE [Suspect]
     Active Substance: METHOTREXATE
  687. METHOTREXATE [Suspect]
     Active Substance: METHOTREXATE
  688. METHOTREXATE [Suspect]
     Active Substance: METHOTREXATE
  689. METHOTREXATE [Suspect]
     Active Substance: METHOTREXATE
  690. METHOTREXATE [Suspect]
     Active Substance: METHOTREXATE
  691. METHOTREXATE [Suspect]
     Active Substance: METHOTREXATE
  692. METHOTREXATE [Suspect]
     Active Substance: METHOTREXATE
  693. METHOTREXATE [Suspect]
     Active Substance: METHOTREXATE
  694. METHOTREXATE [Suspect]
     Active Substance: METHOTREXATE
  695. METHOTREXATE [Suspect]
     Active Substance: METHOTREXATE
  696. METHOTREXATE [Suspect]
     Active Substance: METHOTREXATE
  697. METHOTREXATE [Suspect]
     Active Substance: METHOTREXATE
  698. METHOTREXATE [Suspect]
     Active Substance: METHOTREXATE
  699. METHOTREXATE [Suspect]
     Active Substance: METHOTREXATE
  700. METHOTREXATE [Suspect]
     Active Substance: METHOTREXATE
  701. METHOTREXATE [Suspect]
     Active Substance: METHOTREXATE
  702. METHOTREXATE [Suspect]
     Active Substance: METHOTREXATE
  703. METHOTREXATE [Suspect]
     Active Substance: METHOTREXATE
  704. METHOTREXATE [Suspect]
     Active Substance: METHOTREXATE
  705. METHOTREXATE [Suspect]
     Active Substance: METHOTREXATE
  706. METHOTREXATE [Suspect]
     Active Substance: METHOTREXATE
  707. METHOTREXATE [Suspect]
     Active Substance: METHOTREXATE
  708. METHOTREXATE [Suspect]
     Active Substance: METHOTREXATE
  709. METHOTREXATE [Suspect]
     Active Substance: METHOTREXATE
  710. METHOTREXATE [Suspect]
     Active Substance: METHOTREXATE
  711. METHOTREXATE [Suspect]
     Active Substance: METHOTREXATE
  712. METHOTREXATE [Suspect]
     Active Substance: METHOTREXATE
  713. METHOTREXATE [Suspect]
     Active Substance: METHOTREXATE
  714. METHOTREXATE [Suspect]
     Active Substance: METHOTREXATE
  715. METHOTREXATE [Suspect]
     Active Substance: METHOTREXATE
  716. METHOTREXATE [Suspect]
     Active Substance: METHOTREXATE
  717. METHOTREXATE [Suspect]
     Active Substance: METHOTREXATE
  718. METHOTREXATE [Suspect]
     Active Substance: METHOTREXATE
  719. METHOTREXATE [Suspect]
     Active Substance: METHOTREXATE
     Indication: Colitis
  720. METHOTREXATE [Suspect]
     Active Substance: METHOTREXATE
     Indication: Colitis
  721. METHOTREXATE [Suspect]
     Active Substance: METHOTREXATE
  722. METHOTREXATE SODIUM [Suspect]
     Active Substance: METHOTREXATE SODIUM
     Indication: Colitis
     Route: 065
  723. METHOTREXATE SODIUM [Suspect]
     Active Substance: METHOTREXATE SODIUM
     Indication: Colitis
     Route: 065
  724. METHOTREXATE SODIUM [Suspect]
     Active Substance: METHOTREXATE SODIUM
     Route: 065
  725. METHOTREXATE SODIUM [Suspect]
     Active Substance: METHOTREXATE SODIUM
     Route: 065
  726. METHOTREXATE SODIUM [Suspect]
     Active Substance: METHOTREXATE SODIUM
     Route: 065
  727. METHOTREXATE SODIUM [Suspect]
     Active Substance: METHOTREXATE SODIUM
     Route: 065
  728. METHOTREXATE SODIUM [Suspect]
     Active Substance: METHOTREXATE SODIUM
     Route: 065
  729. METHOTREXATE SODIUM [Suspect]
     Active Substance: METHOTREXATE SODIUM
     Route: 065
  730. METHOTREXATE SODIUM [Suspect]
     Active Substance: METHOTREXATE SODIUM
     Route: 065
  731. METHOTREXATE SODIUM [Suspect]
     Active Substance: METHOTREXATE SODIUM
     Route: 065
  732. METHOTREXATE SODIUM [Suspect]
     Active Substance: METHOTREXATE SODIUM
     Route: 065
  733. METHOTREXATE SODIUM [Suspect]
     Active Substance: METHOTREXATE SODIUM
     Route: 065
  734. METHOTREXATE SODIUM [Suspect]
     Active Substance: METHOTREXATE SODIUM
     Route: 065
  735. METHOTREXATE SODIUM [Suspect]
     Active Substance: METHOTREXATE SODIUM
     Route: 065
  736. METHOTREXATE SODIUM [Suspect]
     Active Substance: METHOTREXATE SODIUM
     Route: 065
  737. METHOTREXATE SODIUM [Suspect]
     Active Substance: METHOTREXATE SODIUM
     Route: 065
  738. METHOTREXATE SODIUM [Suspect]
     Active Substance: METHOTREXATE SODIUM
     Route: 065
  739. METHOTREXATE SODIUM [Suspect]
     Active Substance: METHOTREXATE SODIUM
     Route: 065
  740. METHOTREXATE SODIUM [Suspect]
     Active Substance: METHOTREXATE SODIUM
     Indication: Colitis
     Route: 065
  741. METHOTREXATE SODIUM [Suspect]
     Active Substance: METHOTREXATE SODIUM
     Route: 065
  742. METHOTREXATE SODIUM [Suspect]
     Active Substance: METHOTREXATE SODIUM
     Route: 065
  743. METHOTREXATE SODIUM [Suspect]
     Active Substance: METHOTREXATE SODIUM
     Route: 065
  744. METHOTREXATE SODIUM [Suspect]
     Active Substance: METHOTREXATE SODIUM
     Route: 065
  745. METHOTREXATE SODIUM [Suspect]
     Active Substance: METHOTREXATE SODIUM
     Route: 065
  746. METHOTREXATE SODIUM [Suspect]
     Active Substance: METHOTREXATE SODIUM
     Route: 065
  747. METHOTREXATE SODIUM [Suspect]
     Active Substance: METHOTREXATE SODIUM
     Route: 065
  748. METHOTREXATE SODIUM [Suspect]
     Active Substance: METHOTREXATE SODIUM
     Route: 065
  749. METHOTREXATE SODIUM [Suspect]
     Active Substance: METHOTREXATE SODIUM
     Route: 065
  750. METHOTREXATE SODIUM [Suspect]
     Active Substance: METHOTREXATE SODIUM
     Route: 065
  751. METHOTREXATE SODIUM [Suspect]
     Active Substance: METHOTREXATE SODIUM
     Route: 065
  752. METHOTREXATE SODIUM [Suspect]
     Active Substance: METHOTREXATE SODIUM
     Route: 065
  753. METHOTREXATE SODIUM [Suspect]
     Active Substance: METHOTREXATE SODIUM
     Route: 065
  754. METHOTREXATE SODIUM [Suspect]
     Active Substance: METHOTREXATE SODIUM
     Route: 065
  755. METHOTREXATE SODIUM [Suspect]
     Active Substance: METHOTREXATE SODIUM
     Route: 065
  756. METHOTREXATE SODIUM [Suspect]
     Active Substance: METHOTREXATE SODIUM
     Route: 065
  757. METHOTREXATE SODIUM [Suspect]
     Active Substance: METHOTREXATE SODIUM
     Route: 065
  758. METHOTREXATE SODIUM [Suspect]
     Active Substance: METHOTREXATE SODIUM
     Route: 065
  759. METHOTREXATE SODIUM [Suspect]
     Active Substance: METHOTREXATE SODIUM
     Route: 065
  760. METHOTREXATE SODIUM [Suspect]
     Active Substance: METHOTREXATE SODIUM
     Route: 065
  761. METHOTREXATE SODIUM [Suspect]
     Active Substance: METHOTREXATE SODIUM
     Route: 065
  762. METHOTREXATE SODIUM [Suspect]
     Active Substance: METHOTREXATE SODIUM
     Route: 065
  763. METHOTREXATE SODIUM [Suspect]
     Active Substance: METHOTREXATE SODIUM
     Route: 065
  764. METHOTREXATE SODIUM [Suspect]
     Active Substance: METHOTREXATE SODIUM
     Route: 065
  765. METHOTREXATE SODIUM [Suspect]
     Active Substance: METHOTREXATE SODIUM
     Route: 065
  766. METHOTREXATE SODIUM [Suspect]
     Active Substance: METHOTREXATE SODIUM
     Route: 065
  767. METHOTREXATE SODIUM [Suspect]
     Active Substance: METHOTREXATE SODIUM
     Route: 065
  768. METHOTREXATE SODIUM [Suspect]
     Active Substance: METHOTREXATE SODIUM
     Route: 065
  769. METHOTREXATE SODIUM [Suspect]
     Active Substance: METHOTREXATE SODIUM
     Route: 065
  770. METHOTREXATE SODIUM [Suspect]
     Active Substance: METHOTREXATE SODIUM
     Route: 065
  771. METHOTREXATE SODIUM [Suspect]
     Active Substance: METHOTREXATE SODIUM
     Route: 065
  772. METHOTREXATE SODIUM [Suspect]
     Active Substance: METHOTREXATE SODIUM
     Route: 065
  773. METHOTREXATE SODIUM [Suspect]
     Active Substance: METHOTREXATE SODIUM
     Route: 065
  774. METHOTREXATE SODIUM [Suspect]
     Active Substance: METHOTREXATE SODIUM
     Route: 065
  775. METHOTREXATE SODIUM [Suspect]
     Active Substance: METHOTREXATE SODIUM
     Route: 065
  776. METHOTREXATE SODIUM [Suspect]
     Active Substance: METHOTREXATE SODIUM
     Route: 065
  777. REMICADE [Suspect]
     Active Substance: INFLIXIMAB
     Indication: Colitis
     Route: 042
  778. REMICADE [Suspect]
     Active Substance: INFLIXIMAB
     Indication: Colitis
     Route: 042
  779. REMICADE [Suspect]
     Active Substance: INFLIXIMAB
     Route: 042
  780. REMICADE [Suspect]
     Active Substance: INFLIXIMAB
     Route: 042
  781. REMICADE [Suspect]
     Active Substance: INFLIXIMAB
     Route: 041
  782. REMICADE [Suspect]
     Active Substance: INFLIXIMAB
     Route: 042
  783. REMICADE [Suspect]
     Active Substance: INFLIXIMAB
     Route: 050
  784. REMICADE [Suspect]
     Active Substance: INFLIXIMAB
     Route: 042
  785. REMICADE [Suspect]
     Active Substance: INFLIXIMAB
     Route: 042
  786. REMICADE [Suspect]
     Active Substance: INFLIXIMAB
     Route: 042
  787. REMICADE [Suspect]
     Active Substance: INFLIXIMAB
     Route: 042
  788. REMICADE [Suspect]
     Active Substance: INFLIXIMAB
     Route: 042
  789. REMICADE [Suspect]
     Active Substance: INFLIXIMAB
  790. REMICADE [Suspect]
     Active Substance: INFLIXIMAB
     Route: 042
  791. REMICADE [Suspect]
     Active Substance: INFLIXIMAB
     Route: 042
  792. REMICADE [Suspect]
     Active Substance: INFLIXIMAB
  793. REMICADE [Suspect]
     Active Substance: INFLIXIMAB
     Route: 042
  794. REMICADE [Suspect]
     Active Substance: INFLIXIMAB
     Route: 042
  795. REMICADE [Suspect]
     Active Substance: INFLIXIMAB
     Route: 042
  796. REMICADE [Suspect]
     Active Substance: INFLIXIMAB
  797. REMICADE [Suspect]
     Active Substance: INFLIXIMAB
     Route: 042
  798. REMICADE [Suspect]
     Active Substance: INFLIXIMAB
  799. REMICADE [Suspect]
     Active Substance: INFLIXIMAB
  800. REMICADE [Suspect]
     Active Substance: INFLIXIMAB
     Route: 042
  801. REMICADE [Suspect]
     Active Substance: INFLIXIMAB
     Route: 042
  802. REMICADE [Suspect]
     Active Substance: INFLIXIMAB
  803. REMICADE [Suspect]
     Active Substance: INFLIXIMAB
  804. REMICADE [Suspect]
     Active Substance: INFLIXIMAB
  805. REMICADE [Suspect]
     Active Substance: INFLIXIMAB
     Indication: Colitis
     Route: 042
  806. REMICADE [Suspect]
     Active Substance: INFLIXIMAB
     Indication: Colitis
     Route: 042
  807. REMICADE [Suspect]
     Active Substance: INFLIXIMAB
     Route: 042
  808. REMICADE [Suspect]
     Active Substance: INFLIXIMAB
     Route: 042
  809. REMICADE [Suspect]
     Active Substance: INFLIXIMAB
     Route: 042
  810. REMICADE [Suspect]
     Active Substance: INFLIXIMAB
     Route: 065
  811. REMICADE [Suspect]
     Active Substance: INFLIXIMAB
     Route: 042
  812. REMICADE [Suspect]
     Active Substance: INFLIXIMAB
     Route: 042
  813. REMICADE [Suspect]
     Active Substance: INFLIXIMAB
     Route: 065
  814. REMICADE [Suspect]
     Active Substance: INFLIXIMAB
     Route: 042
  815. REMICADE [Suspect]
     Active Substance: INFLIXIMAB
     Route: 065
  816. REMICADE [Suspect]
     Active Substance: INFLIXIMAB
     Route: 042
  817. REMICADE [Suspect]
     Active Substance: INFLIXIMAB
     Route: 042
  818. REMICADE [Suspect]
     Active Substance: INFLIXIMAB
     Route: 065
  819. REMICADE [Suspect]
     Active Substance: INFLIXIMAB
     Route: 042
  820. REMICADE [Suspect]
     Active Substance: INFLIXIMAB
     Route: 042
  821. REMICADE [Suspect]
     Active Substance: INFLIXIMAB
     Route: 042
  822. REMICADE [Suspect]
     Active Substance: INFLIXIMAB
     Route: 065
  823. REMICADE [Suspect]
     Active Substance: INFLIXIMAB
     Route: 042
  824. REMICADE [Suspect]
     Active Substance: INFLIXIMAB
     Route: 042
  825. REMICADE [Suspect]
     Active Substance: INFLIXIMAB
     Route: 042
  826. REMICADE [Suspect]
     Active Substance: INFLIXIMAB
     Route: 042
  827. REMICADE [Suspect]
     Active Substance: INFLIXIMAB
     Route: 042
  828. REMICADE [Suspect]
     Active Substance: INFLIXIMAB
     Route: 042
  829. REMICADE [Suspect]
     Active Substance: INFLIXIMAB
     Route: 042
  830. REMICADE [Suspect]
     Active Substance: INFLIXIMAB
     Route: 065
  831. REMICADE [Suspect]
     Active Substance: INFLIXIMAB
     Route: 042
  832. REMICADE [Suspect]
     Active Substance: INFLIXIMAB
     Route: 050
  833. REMICADE [Suspect]
     Active Substance: INFLIXIMAB
     Route: 042
  834. REMICADE [Suspect]
     Active Substance: INFLIXIMAB
     Route: 042
  835. REMICADE [Suspect]
     Active Substance: INFLIXIMAB
     Route: 065
  836. REMICADE [Suspect]
     Active Substance: INFLIXIMAB
     Route: 042
  837. REMICADE [Suspect]
     Active Substance: INFLIXIMAB
     Route: 042
  838. REMICADE [Suspect]
     Active Substance: INFLIXIMAB
     Route: 042
  839. REMICADE [Suspect]
     Active Substance: INFLIXIMAB
     Route: 042
  840. REMICADE [Suspect]
     Active Substance: INFLIXIMAB
     Route: 042
  841. REMICADE [Suspect]
     Active Substance: INFLIXIMAB
     Route: 042
  842. REMICADE [Suspect]
     Active Substance: INFLIXIMAB
     Route: 042
  843. REMICADE [Suspect]
     Active Substance: INFLIXIMAB
     Route: 042
  844. REMICADE [Suspect]
     Active Substance: INFLIXIMAB
     Route: 065
  845. REMICADE [Suspect]
     Active Substance: INFLIXIMAB
     Route: 042
  846. REMICADE [Suspect]
     Active Substance: INFLIXIMAB
     Route: 042
  847. REMICADE [Suspect]
     Active Substance: INFLIXIMAB
     Route: 050
  848. REMICADE [Suspect]
     Active Substance: INFLIXIMAB
     Route: 042
  849. REMICADE [Suspect]
     Active Substance: INFLIXIMAB
     Route: 042
  850. REMICADE [Suspect]
     Active Substance: INFLIXIMAB
     Route: 042
  851. REMICADE [Suspect]
     Active Substance: INFLIXIMAB
     Route: 065
  852. REMICADE [Suspect]
     Active Substance: INFLIXIMAB
     Route: 042
  853. REMICADE [Suspect]
     Active Substance: INFLIXIMAB
     Route: 042
  854. REMICADE [Suspect]
     Active Substance: INFLIXIMAB
     Route: 042
  855. REMICADE [Suspect]
     Active Substance: INFLIXIMAB
     Indication: Colitis
     Route: 042
  856. REMICADE [Suspect]
     Active Substance: INFLIXIMAB
     Indication: Colitis
     Route: 042
  857. REMICADE [Suspect]
     Active Substance: INFLIXIMAB
     Route: 042
  858. REMICADE [Suspect]
     Active Substance: INFLIXIMAB
     Route: 042
  859. REMICADE [Suspect]
     Active Substance: INFLIXIMAB
     Route: 042
  860. REMICADE [Suspect]
     Active Substance: INFLIXIMAB
     Route: 042
  861. REMICADE [Suspect]
     Active Substance: INFLIXIMAB
     Route: 042
  862. REMICADE [Suspect]
     Active Substance: INFLIXIMAB
     Route: 042
  863. REMICADE [Suspect]
     Active Substance: INFLIXIMAB
     Route: 042
  864. REMICADE [Suspect]
     Active Substance: INFLIXIMAB
     Route: 042
  865. REMICADE [Suspect]
     Active Substance: INFLIXIMAB
     Route: 065
  866. REMICADE [Suspect]
     Active Substance: INFLIXIMAB
     Route: 065
  867. REMICADE [Suspect]
     Active Substance: INFLIXIMAB
     Route: 050
  868. REMICADE [Suspect]
     Active Substance: INFLIXIMAB
     Route: 065
  869. REMICADE [Suspect]
     Active Substance: INFLIXIMAB
     Route: 065
  870. REMICADE [Suspect]
     Active Substance: INFLIXIMAB
     Route: 065
  871. REMICADE [Suspect]
     Active Substance: INFLIXIMAB
     Route: 042
  872. REMICADE [Suspect]
     Active Substance: INFLIXIMAB
     Route: 042
  873. REMICADE [Suspect]
     Active Substance: INFLIXIMAB
     Route: 042
  874. REMICADE [Suspect]
     Active Substance: INFLIXIMAB
     Route: 042
  875. REMICADE [Suspect]
     Active Substance: INFLIXIMAB
     Route: 042
  876. REMICADE [Suspect]
     Active Substance: INFLIXIMAB
     Route: 042
  877. REMICADE [Suspect]
     Active Substance: INFLIXIMAB
     Route: 042
  878. REMICADE [Suspect]
     Active Substance: INFLIXIMAB
     Route: 042
  879. REMICADE [Suspect]
     Active Substance: INFLIXIMAB
     Route: 042
  880. REMICADE [Suspect]
     Active Substance: INFLIXIMAB
     Route: 042
  881. REMICADE [Suspect]
     Active Substance: INFLIXIMAB
     Route: 065
  882. REMICADE [Suspect]
     Active Substance: INFLIXIMAB
     Route: 042
  883. REMICADE [Suspect]
     Active Substance: INFLIXIMAB
     Route: 042
  884. REMICADE [Suspect]
     Active Substance: INFLIXIMAB
     Route: 042
  885. REMICADE [Suspect]
     Active Substance: INFLIXIMAB
     Route: 042
  886. REMICADE [Suspect]
     Active Substance: INFLIXIMAB
     Route: 042
  887. REMICADE [Suspect]
     Active Substance: INFLIXIMAB
     Route: 042
  888. REMICADE [Suspect]
     Active Substance: INFLIXIMAB
     Route: 042
  889. REMICADE [Suspect]
     Active Substance: INFLIXIMAB
     Route: 065
  890. REMICADE [Suspect]
     Active Substance: INFLIXIMAB
     Route: 042
  891. REMICADE [Suspect]
     Active Substance: INFLIXIMAB
     Route: 042
  892. REMICADE [Suspect]
     Active Substance: INFLIXIMAB
     Route: 042
  893. REMICADE [Suspect]
     Active Substance: INFLIXIMAB
     Route: 065
  894. REMICADE [Suspect]
     Active Substance: INFLIXIMAB
     Route: 042
  895. REMICADE [Suspect]
     Active Substance: INFLIXIMAB
     Route: 042
  896. REMICADE [Suspect]
     Active Substance: INFLIXIMAB
     Route: 042
  897. REMICADE [Suspect]
     Active Substance: INFLIXIMAB
     Route: 042
     Dates: start: 20200407, end: 20230501
  898. REMICADE [Suspect]
     Active Substance: INFLIXIMAB
     Route: 042
     Dates: start: 20200407, end: 20230501
  899. REMICADE [Suspect]
     Active Substance: INFLIXIMAB
     Route: 042
  900. REMICADE [Suspect]
     Active Substance: INFLIXIMAB
     Route: 042
  901. REMICADE [Suspect]
     Active Substance: INFLIXIMAB
     Route: 042
  902. REMICADE [Suspect]
     Active Substance: INFLIXIMAB
     Route: 042
  903. REMICADE [Suspect]
     Active Substance: INFLIXIMAB
     Route: 042
  904. REMICADE [Suspect]
     Active Substance: INFLIXIMAB
     Route: 042
  905. REMICADE [Suspect]
     Active Substance: INFLIXIMAB
     Indication: Colitis
     Route: 065
  906. REMICADE [Suspect]
     Active Substance: INFLIXIMAB
     Indication: Colitis
     Route: 065
  907. REMICADE [Suspect]
     Active Substance: INFLIXIMAB
     Route: 065
  908. REMICADE [Suspect]
     Active Substance: INFLIXIMAB
     Route: 065
  909. REMICADE [Suspect]
     Active Substance: INFLIXIMAB
     Route: 065
  910. REMICADE [Suspect]
     Active Substance: INFLIXIMAB
     Route: 065
  911. REMICADE [Suspect]
     Active Substance: INFLIXIMAB
     Route: 065
  912. REMICADE [Suspect]
     Active Substance: INFLIXIMAB
     Route: 065
  913. REMICADE [Suspect]
     Active Substance: INFLIXIMAB
     Route: 065
  914. REMICADE [Suspect]
     Active Substance: INFLIXIMAB
     Route: 065
  915. REMICADE [Suspect]
     Active Substance: INFLIXIMAB
     Route: 065
  916. REMICADE [Suspect]
     Active Substance: INFLIXIMAB
     Route: 065
  917. REMICADE [Suspect]
     Active Substance: INFLIXIMAB
     Route: 065
  918. REMICADE [Suspect]
     Active Substance: INFLIXIMAB
     Route: 065
  919. REMICADE [Suspect]
     Active Substance: INFLIXIMAB
     Route: 065
  920. REMICADE [Suspect]
     Active Substance: INFLIXIMAB
     Route: 065
  921. REMICADE [Suspect]
     Active Substance: INFLIXIMAB
     Route: 065
  922. REMICADE [Suspect]
     Active Substance: INFLIXIMAB
     Route: 065
  923. REMICADE [Suspect]
     Active Substance: INFLIXIMAB
     Route: 065
  924. REMICADE [Suspect]
     Active Substance: INFLIXIMAB
     Route: 065
  925. REMICADE [Suspect]
     Active Substance: INFLIXIMAB
     Route: 065
  926. REMICADE [Suspect]
     Active Substance: INFLIXIMAB
     Route: 050
  927. REMICADE [Suspect]
     Active Substance: INFLIXIMAB
     Route: 050
  928. REMICADE [Suspect]
     Active Substance: INFLIXIMAB
     Route: 050
  929. REMICADE [Suspect]
     Active Substance: INFLIXIMAB
     Route: 050
  930. REMICADE [Suspect]
     Active Substance: INFLIXIMAB
     Route: 050
  931. REMICADE [Suspect]
     Active Substance: INFLIXIMAB
     Route: 050
  932. REMICADE [Suspect]
     Active Substance: INFLIXIMAB
     Route: 050
  933. REMICADE [Suspect]
     Active Substance: INFLIXIMAB
     Route: 050
  934. REMICADE [Suspect]
     Active Substance: INFLIXIMAB
     Route: 042
  935. REMICADE [Suspect]
     Active Substance: INFLIXIMAB
     Route: 042
  936. REMICADE [Suspect]
     Active Substance: INFLIXIMAB
     Route: 042
  937. REMICADE [Suspect]
     Active Substance: INFLIXIMAB
     Route: 042
  938. REMICADE [Suspect]
     Active Substance: INFLIXIMAB
     Route: 042
  939. REMICADE [Suspect]
     Active Substance: INFLIXIMAB
     Route: 042
  940. REMICADE [Suspect]
     Active Substance: INFLIXIMAB
     Route: 042
  941. REMICADE [Suspect]
     Active Substance: INFLIXIMAB
     Route: 042
  942. REMICADE [Suspect]
     Active Substance: INFLIXIMAB
     Route: 042
  943. REMICADE [Suspect]
     Active Substance: INFLIXIMAB
     Route: 042
  944. REMICADE [Suspect]
     Active Substance: INFLIXIMAB
     Route: 042
  945. REMICADE [Suspect]
     Active Substance: INFLIXIMAB
     Route: 042
  946. REMICADE [Suspect]
     Active Substance: INFLIXIMAB
     Route: 042
  947. REMICADE [Suspect]
     Active Substance: INFLIXIMAB
     Route: 065
  948. REMICADE [Suspect]
     Active Substance: INFLIXIMAB
     Route: 050
  949. REMICADE [Suspect]
     Active Substance: INFLIXIMAB
     Route: 050
  950. REMICADE [Suspect]
     Active Substance: INFLIXIMAB
     Route: 050
  951. REMICADE [Suspect]
     Active Substance: INFLIXIMAB
     Route: 065
  952. REMICADE [Suspect]
     Active Substance: INFLIXIMAB
     Route: 065
  953. REMICADE [Suspect]
     Active Substance: INFLIXIMAB
     Route: 065
  954. REMICADE [Suspect]
     Active Substance: INFLIXIMAB
     Route: 065
  955. REMICADE [Suspect]
     Active Substance: INFLIXIMAB
     Indication: Colitis
     Route: 042
  956. REMICADE [Suspect]
     Active Substance: INFLIXIMAB
     Indication: Colitis
     Route: 042
  957. REMICADE [Suspect]
     Active Substance: INFLIXIMAB
     Route: 042
  958. REMICADE [Suspect]
     Active Substance: INFLIXIMAB
     Route: 042
  959. REMICADE [Suspect]
     Active Substance: INFLIXIMAB
     Route: 042
  960. REMICADE [Suspect]
     Active Substance: INFLIXIMAB
     Route: 042
  961. REMICADE [Suspect]
     Active Substance: INFLIXIMAB
     Route: 042
  962. REMICADE [Suspect]
     Active Substance: INFLIXIMAB
     Route: 042
  963. REMICADE [Suspect]
     Active Substance: INFLIXIMAB
     Route: 042
  964. REMICADE [Suspect]
     Active Substance: INFLIXIMAB
     Route: 042
  965. REMICADE [Suspect]
     Active Substance: INFLIXIMAB
     Route: 042
  966. REMICADE [Suspect]
     Active Substance: INFLIXIMAB
     Route: 042
  967. REMICADE [Suspect]
     Active Substance: INFLIXIMAB
     Route: 042
  968. REMICADE [Suspect]
     Active Substance: INFLIXIMAB
     Route: 042
  969. REMICADE [Suspect]
     Active Substance: INFLIXIMAB
     Route: 042
  970. REMICADE [Suspect]
     Active Substance: INFLIXIMAB
     Route: 042
  971. REMICADE [Suspect]
     Active Substance: INFLIXIMAB
     Route: 042
  972. REMICADE [Suspect]
     Active Substance: INFLIXIMAB
     Route: 042
  973. REMICADE [Suspect]
     Active Substance: INFLIXIMAB
     Route: 042
  974. REMICADE [Suspect]
     Active Substance: INFLIXIMAB
     Route: 042
  975. REMICADE [Suspect]
     Active Substance: INFLIXIMAB
     Route: 042
  976. REMICADE [Suspect]
     Active Substance: INFLIXIMAB
     Route: 042
  977. REMICADE [Suspect]
     Active Substance: INFLIXIMAB
     Route: 042
  978. REMICADE [Suspect]
     Active Substance: INFLIXIMAB
     Route: 042
  979. REMICADE [Suspect]
     Active Substance: INFLIXIMAB
     Route: 042
  980. REMICADE [Suspect]
     Active Substance: INFLIXIMAB
     Route: 042
  981. REMICADE [Suspect]
     Active Substance: INFLIXIMAB
     Indication: Colitis
     Route: 042
  982. REMICADE [Suspect]
     Active Substance: INFLIXIMAB
     Indication: Colitis
     Route: 042
  983. REMICADE [Suspect]
     Active Substance: INFLIXIMAB
     Route: 042
  984. REMICADE [Suspect]
     Active Substance: INFLIXIMAB
     Route: 042
  985. REMICADE [Suspect]
     Active Substance: INFLIXIMAB
     Route: 042
  986. REMICADE [Suspect]
     Active Substance: INFLIXIMAB
     Route: 042
  987. REMICADE [Suspect]
     Active Substance: INFLIXIMAB
     Route: 042
  988. REMICADE [Suspect]
     Active Substance: INFLIXIMAB
     Route: 042
     Dates: start: 20200407, end: 20230501
  989. REMICADE [Suspect]
     Active Substance: INFLIXIMAB
     Route: 042
  990. REMICADE [Suspect]
     Active Substance: INFLIXIMAB
     Route: 042
  991. REMICADE [Suspect]
     Active Substance: INFLIXIMAB
     Route: 042
  992. REMICADE [Suspect]
     Active Substance: INFLIXIMAB
     Route: 042
  993. REMICADE [Suspect]
     Active Substance: INFLIXIMAB
     Route: 042
  994. REMICADE [Suspect]
     Active Substance: INFLIXIMAB
     Route: 042
     Dates: start: 20200407, end: 20230501
  995. REMICADE [Suspect]
     Active Substance: INFLIXIMAB
     Dosage: 7 MILLIGRAM/KILOGRAM, QWK
     Dates: start: 20200407, end: 20230501
  996. REMICADE [Suspect]
     Active Substance: INFLIXIMAB
     Indication: Colitis
     Route: 065
  997. REMICADE [Suspect]
     Active Substance: INFLIXIMAB
     Indication: Colitis
     Route: 065
  998. REMICADE [Suspect]
     Active Substance: INFLIXIMAB
     Route: 065
  999. REMICADE [Suspect]
     Active Substance: INFLIXIMAB
     Route: 065
  1000. REMICADE [Suspect]
     Active Substance: INFLIXIMAB
     Route: 065
  1001. REMICADE [Suspect]
     Active Substance: INFLIXIMAB
     Route: 065
  1002. REMICADE [Suspect]
     Active Substance: INFLIXIMAB
     Route: 065
  1003. REMICADE [Suspect]
     Active Substance: INFLIXIMAB
     Route: 065
  1004. REMICADE [Suspect]
     Active Substance: INFLIXIMAB
     Route: 065
  1005. REMICADE [Suspect]
     Active Substance: INFLIXIMAB
     Route: 065
  1006. REMICADE [Suspect]
     Active Substance: INFLIXIMAB
     Route: 065
  1007. REMICADE [Suspect]
     Active Substance: INFLIXIMAB
     Route: 065
  1008. REMICADE [Suspect]
     Active Substance: INFLIXIMAB
     Route: 065
  1009. REMICADE [Suspect]
     Active Substance: INFLIXIMAB
     Route: 065
  1010. REMICADE [Suspect]
     Active Substance: INFLIXIMAB
     Route: 065
  1011. REMICADE [Suspect]
     Active Substance: INFLIXIMAB
     Route: 065
  1012. REMICADE [Suspect]
     Active Substance: INFLIXIMAB
     Route: 065
  1013. REMICADE [Suspect]
     Active Substance: INFLIXIMAB
     Route: 065
  1014. REMICADE [Suspect]
     Active Substance: INFLIXIMAB
     Route: 065
  1015. REMICADE [Suspect]
     Active Substance: INFLIXIMAB
     Route: 065
  1016. REMICADE [Suspect]
     Active Substance: INFLIXIMAB
     Route: 065
  1017. REMICADE [Suspect]
     Active Substance: INFLIXIMAB
     Route: 065
  1018. REMICADE [Suspect]
     Active Substance: INFLIXIMAB
     Route: 065
  1019. REMICADE [Suspect]
     Active Substance: INFLIXIMAB
     Route: 065
  1020. REMICADE [Suspect]
     Active Substance: INFLIXIMAB
     Route: 065
  1021. REMICADE [Suspect]
     Active Substance: INFLIXIMAB
     Route: 065
  1022. REMICADE [Suspect]
     Active Substance: INFLIXIMAB
     Route: 065
  1023. REMICADE [Suspect]
     Active Substance: INFLIXIMAB
     Route: 065
  1024. REMICADE [Suspect]
     Active Substance: INFLIXIMAB
     Route: 065
  1025. REMICADE [Suspect]
     Active Substance: INFLIXIMAB
     Route: 065
  1026. REMICADE [Suspect]
     Active Substance: INFLIXIMAB
     Route: 065
  1027. REMICADE [Suspect]
     Active Substance: INFLIXIMAB
     Route: 065
  1028. REMICADE [Suspect]
     Active Substance: INFLIXIMAB
     Route: 065
  1029. REMICADE [Suspect]
     Active Substance: INFLIXIMAB
     Route: 065
  1030. REMICADE [Suspect]
     Active Substance: INFLIXIMAB
     Route: 065
  1031. REMICADE [Suspect]
     Active Substance: INFLIXIMAB
     Route: 065
  1032. REMICADE [Suspect]
     Active Substance: INFLIXIMAB
     Route: 065
  1033. REMICADE [Suspect]
     Active Substance: INFLIXIMAB
     Route: 065
  1034. REMICADE [Suspect]
     Active Substance: INFLIXIMAB
     Route: 065
  1035. REMICADE [Suspect]
     Active Substance: INFLIXIMAB
     Route: 065
  1036. REMICADE [Suspect]
     Active Substance: INFLIXIMAB
     Route: 065
  1037. REMICADE [Suspect]
     Active Substance: INFLIXIMAB
     Route: 065
  1038. REMICADE [Suspect]
     Active Substance: INFLIXIMAB
     Route: 065
  1039. REMICADE [Suspect]
     Active Substance: INFLIXIMAB
     Route: 065
  1040. REMICADE [Suspect]
     Active Substance: INFLIXIMAB
     Route: 065
  1041. REMICADE [Suspect]
     Active Substance: INFLIXIMAB
     Route: 065
  1042. REMICADE [Suspect]
     Active Substance: INFLIXIMAB
     Route: 065
  1043. REMICADE [Suspect]
     Active Substance: INFLIXIMAB
     Route: 065
  1044. REMICADE [Suspect]
     Active Substance: INFLIXIMAB
     Route: 065
  1045. REMICADE [Suspect]
     Active Substance: INFLIXIMAB
     Route: 065
  1046. REMICADE [Suspect]
     Active Substance: INFLIXIMAB
     Indication: Colitis
     Route: 065
  1047. REMICADE [Suspect]
     Active Substance: INFLIXIMAB
     Indication: Colitis
     Route: 065
  1048. REMICADE [Suspect]
     Active Substance: INFLIXIMAB
     Route: 065
  1049. REMICADE [Suspect]
     Active Substance: INFLIXIMAB
     Route: 065
  1050. REMICADE [Suspect]
     Active Substance: INFLIXIMAB
     Route: 065
  1051. REMICADE [Suspect]
     Active Substance: INFLIXIMAB
     Route: 065
  1052. REMICADE [Suspect]
     Active Substance: INFLIXIMAB
     Route: 065
  1053. REMICADE [Suspect]
     Active Substance: INFLIXIMAB
     Route: 065
  1054. REMICADE [Suspect]
     Active Substance: INFLIXIMAB
     Route: 065
  1055. REMICADE [Suspect]
     Active Substance: INFLIXIMAB
     Route: 065
  1056. REMICADE [Suspect]
     Active Substance: INFLIXIMAB
     Route: 065
  1057. REMICADE [Suspect]
     Active Substance: INFLIXIMAB
     Route: 065
  1058. REMICADE [Suspect]
     Active Substance: INFLIXIMAB
     Route: 065
  1059. REMICADE [Suspect]
     Active Substance: INFLIXIMAB
     Route: 065
  1060. REMICADE [Suspect]
     Active Substance: INFLIXIMAB
     Route: 065
  1061. REMICADE [Suspect]
     Active Substance: INFLIXIMAB
     Route: 065
  1062. REMICADE [Suspect]
     Active Substance: INFLIXIMAB
     Route: 065
  1063. REMICADE [Suspect]
     Active Substance: INFLIXIMAB
     Route: 065
  1064. REMICADE [Suspect]
     Active Substance: INFLIXIMAB
     Route: 041
  1065. REMICADE [Suspect]
     Active Substance: INFLIXIMAB
     Route: 041
  1066. REMICADE [Suspect]
     Active Substance: INFLIXIMAB
     Route: 041
  1067. REMICADE [Suspect]
     Active Substance: INFLIXIMAB
     Route: 041
  1068. REMICADE [Suspect]
     Active Substance: INFLIXIMAB
     Route: 041
  1069. REMICADE [Suspect]
     Active Substance: INFLIXIMAB
     Route: 041
  1070. REMICADE [Suspect]
     Active Substance: INFLIXIMAB
     Route: 041
  1071. REMICADE [Suspect]
     Active Substance: INFLIXIMAB
     Route: 041
  1072. REMICADE [Suspect]
     Active Substance: INFLIXIMAB
     Route: 041
  1073. REMICADE [Suspect]
     Active Substance: INFLIXIMAB
     Route: 041
  1074. REMICADE [Suspect]
     Active Substance: INFLIXIMAB
     Route: 041
  1075. REMICADE [Suspect]
     Active Substance: INFLIXIMAB
     Route: 041
  1076. REMICADE [Suspect]
     Active Substance: INFLIXIMAB
     Route: 041
  1077. REMICADE [Suspect]
     Active Substance: INFLIXIMAB
     Route: 041
  1078. REMICADE [Suspect]
     Active Substance: INFLIXIMAB
     Route: 041
  1079. REMICADE [Suspect]
     Active Substance: INFLIXIMAB
     Route: 041
  1080. REMICADE [Suspect]
     Active Substance: INFLIXIMAB
     Route: 040
  1081. REMICADE [Suspect]
     Active Substance: INFLIXIMAB
     Route: 040
  1082. REMICADE [Suspect]
     Active Substance: INFLIXIMAB
     Route: 040
  1083. REMICADE [Suspect]
     Active Substance: INFLIXIMAB
     Route: 040
  1084. REMICADE [Suspect]
     Active Substance: INFLIXIMAB
     Route: 040
  1085. REMICADE [Suspect]
     Active Substance: INFLIXIMAB
     Route: 040
  1086. REMICADE [Suspect]
     Active Substance: INFLIXIMAB
     Route: 040
  1087. REMICADE [Suspect]
     Active Substance: INFLIXIMAB
     Route: 040
  1088. REMICADE [Suspect]
     Active Substance: INFLIXIMAB
     Route: 040
  1089. REMICADE [Suspect]
     Active Substance: INFLIXIMAB
     Route: 040
  1090. REMICADE [Suspect]
     Active Substance: INFLIXIMAB
     Route: 040
  1091. REMICADE [Suspect]
     Active Substance: INFLIXIMAB
     Route: 040
  1092. REMICADE [Suspect]
     Active Substance: INFLIXIMAB
     Route: 040
  1093. REMICADE [Suspect]
     Active Substance: INFLIXIMAB
     Route: 040
  1094. REMICADE [Suspect]
     Active Substance: INFLIXIMAB
     Route: 040
  1095. REMICADE [Suspect]
     Active Substance: INFLIXIMAB
     Route: 040
  1096. REMICADE [Suspect]
     Active Substance: INFLIXIMAB
     Indication: Colitis
     Route: 040
  1097. REMICADE [Suspect]
     Active Substance: INFLIXIMAB
     Indication: Colitis
     Route: 040
  1098. REMICADE [Suspect]
     Active Substance: INFLIXIMAB
     Route: 040
  1099. REMICADE [Suspect]
     Active Substance: INFLIXIMAB
     Route: 040
  1100. REMICADE [Suspect]
     Active Substance: INFLIXIMAB
     Route: 040
  1101. REMICADE [Suspect]
     Active Substance: INFLIXIMAB
     Route: 040
  1102. REMICADE [Suspect]
     Active Substance: INFLIXIMAB
     Route: 040
  1103. REMICADE [Suspect]
     Active Substance: INFLIXIMAB
     Route: 040
  1104. REMICADE [Suspect]
     Active Substance: INFLIXIMAB
     Route: 040
  1105. REMICADE [Suspect]
     Active Substance: INFLIXIMAB
     Route: 040
  1106. REMICADE [Suspect]
     Active Substance: INFLIXIMAB
     Route: 050
  1107. REMICADE [Suspect]
     Active Substance: INFLIXIMAB
     Route: 050
  1108. REMICADE [Suspect]
     Active Substance: INFLIXIMAB
     Route: 050
  1109. REMICADE [Suspect]
     Active Substance: INFLIXIMAB
     Route: 050
  1110. REMICADE [Suspect]
     Active Substance: INFLIXIMAB
     Route: 050
  1111. REMICADE [Suspect]
     Active Substance: INFLIXIMAB
     Route: 050
  1112. REMICADE [Suspect]
     Active Substance: INFLIXIMAB
     Route: 050
  1113. REMICADE [Suspect]
     Active Substance: INFLIXIMAB
     Route: 050
  1114. REMICADE [Suspect]
     Active Substance: INFLIXIMAB
     Route: 050
  1115. REMICADE [Suspect]
     Active Substance: INFLIXIMAB
     Route: 050
  1116. REMICADE [Suspect]
     Active Substance: INFLIXIMAB
     Route: 050
  1117. REMICADE [Suspect]
     Active Substance: INFLIXIMAB
     Route: 050
  1118. REMICADE [Suspect]
     Active Substance: INFLIXIMAB
     Route: 050
  1119. REMICADE [Suspect]
     Active Substance: INFLIXIMAB
     Route: 042
  1120. REMICADE [Suspect]
     Active Substance: INFLIXIMAB
     Route: 042
  1121. REMICADE [Suspect]
     Active Substance: INFLIXIMAB
     Route: 042
  1122. REMICADE [Suspect]
     Active Substance: INFLIXIMAB
     Route: 042
  1123. REMICADE [Suspect]
     Active Substance: INFLIXIMAB
     Route: 042
  1124. REMICADE [Suspect]
     Active Substance: INFLIXIMAB
     Route: 042
  1125. REMICADE [Suspect]
     Active Substance: INFLIXIMAB
     Route: 042
  1126. REMICADE [Suspect]
     Active Substance: INFLIXIMAB
     Route: 042
  1127. REMICADE [Suspect]
     Active Substance: INFLIXIMAB
     Route: 042
  1128. REMICADE [Suspect]
     Active Substance: INFLIXIMAB
     Route: 042
  1129. REMICADE [Suspect]
     Active Substance: INFLIXIMAB
     Route: 042
  1130. REMICADE [Suspect]
     Active Substance: INFLIXIMAB
     Route: 042
  1131. REMICADE [Suspect]
     Active Substance: INFLIXIMAB
     Route: 042
  1132. REMICADE [Suspect]
     Active Substance: INFLIXIMAB
     Route: 042
  1133. REMICADE [Suspect]
     Active Substance: INFLIXIMAB
     Route: 042
  1134. REMICADE [Suspect]
     Active Substance: INFLIXIMAB
     Route: 042
  1135. REMICADE [Suspect]
     Active Substance: INFLIXIMAB
     Route: 042
  1136. REMICADE [Suspect]
     Active Substance: INFLIXIMAB
     Route: 042
  1137. REMICADE [Suspect]
     Active Substance: INFLIXIMAB
     Route: 042
  1138. REMICADE [Suspect]
     Active Substance: INFLIXIMAB
     Route: 042
  1139. REMICADE [Suspect]
     Active Substance: INFLIXIMAB
     Route: 042
  1140. REMICADE [Suspect]
     Active Substance: INFLIXIMAB
     Route: 042
  1141. REMICADE [Suspect]
     Active Substance: INFLIXIMAB
     Route: 042
  1142. REMICADE [Suspect]
     Active Substance: INFLIXIMAB
     Route: 042
  1143. REMICADE [Suspect]
     Active Substance: INFLIXIMAB
     Route: 042
  1144. REMICADE [Suspect]
     Active Substance: INFLIXIMAB
     Route: 042
  1145. REMICADE [Suspect]
     Active Substance: INFLIXIMAB
     Route: 042
  1146. REMICADE [Suspect]
     Active Substance: INFLIXIMAB
     Indication: Colitis
     Route: 042
  1147. REMICADE [Suspect]
     Active Substance: INFLIXIMAB
     Indication: Colitis
     Route: 042
  1148. REMICADE [Suspect]
     Active Substance: INFLIXIMAB
     Route: 042
  1149. REMICADE [Suspect]
     Active Substance: INFLIXIMAB
     Route: 042
  1150. REMICADE [Suspect]
     Active Substance: INFLIXIMAB
     Route: 042
  1151. REMICADE [Suspect]
     Active Substance: INFLIXIMAB
     Route: 042
  1152. REMICADE [Suspect]
     Active Substance: INFLIXIMAB
     Route: 042
  1153. REMICADE [Suspect]
     Active Substance: INFLIXIMAB
     Route: 042
  1154. REMICADE [Suspect]
     Active Substance: INFLIXIMAB
     Route: 042
  1155. REMICADE [Suspect]
     Active Substance: INFLIXIMAB
     Route: 042
  1156. REMICADE [Suspect]
     Active Substance: INFLIXIMAB
     Route: 042
  1157. REMICADE [Suspect]
     Active Substance: INFLIXIMAB
     Route: 042
  1158. REMICADE [Suspect]
     Active Substance: INFLIXIMAB
     Route: 042
  1159. REMICADE [Suspect]
     Active Substance: INFLIXIMAB
     Route: 042
  1160. REMICADE [Suspect]
     Active Substance: INFLIXIMAB
     Route: 042
  1161. REMICADE [Suspect]
     Active Substance: INFLIXIMAB
     Route: 042
  1162. REMICADE [Suspect]
     Active Substance: INFLIXIMAB
     Route: 042
  1163. REMICADE [Suspect]
     Active Substance: INFLIXIMAB
     Route: 042
  1164. REMICADE [Suspect]
     Active Substance: INFLIXIMAB
     Route: 042
  1165. REMICADE [Suspect]
     Active Substance: INFLIXIMAB
     Route: 042
  1166. REMICADE [Suspect]
     Active Substance: INFLIXIMAB
     Route: 042
  1167. REMICADE [Suspect]
     Active Substance: INFLIXIMAB
     Route: 042
  1168. REMICADE [Suspect]
     Active Substance: INFLIXIMAB
     Route: 042
  1169. REMICADE [Suspect]
     Active Substance: INFLIXIMAB
     Route: 042
  1170. REMICADE [Suspect]
     Active Substance: INFLIXIMAB
     Route: 042
  1171. REMICADE [Suspect]
     Active Substance: INFLIXIMAB
     Route: 042
  1172. REMICADE [Suspect]
     Active Substance: INFLIXIMAB
     Route: 042
  1173. REMICADE [Suspect]
     Active Substance: INFLIXIMAB
     Route: 042
  1174. REMICADE [Suspect]
     Active Substance: INFLIXIMAB
     Route: 042
  1175. REMICADE [Suspect]
     Active Substance: INFLIXIMAB
     Route: 042
  1176. REMICADE [Suspect]
     Active Substance: INFLIXIMAB
     Route: 042
  1177. REMICADE [Suspect]
     Active Substance: INFLIXIMAB
     Route: 042
  1178. REMICADE [Suspect]
     Active Substance: INFLIXIMAB
     Route: 042
  1179. REMICADE [Suspect]
     Active Substance: INFLIXIMAB
     Route: 042
  1180. REMICADE [Suspect]
     Active Substance: INFLIXIMAB
     Route: 042
  1181. REMICADE [Suspect]
     Active Substance: INFLIXIMAB
     Route: 042
  1182. REMICADE [Suspect]
     Active Substance: INFLIXIMAB
     Route: 042
  1183. REMICADE [Suspect]
     Active Substance: INFLIXIMAB
     Route: 042
  1184. REMICADE [Suspect]
     Active Substance: INFLIXIMAB
     Route: 042
  1185. REMICADE [Suspect]
     Active Substance: INFLIXIMAB
     Route: 042
  1186. REMICADE [Suspect]
     Active Substance: INFLIXIMAB
     Route: 042
  1187. REMICADE [Suspect]
     Active Substance: INFLIXIMAB
     Route: 042
  1188. REMICADE [Suspect]
     Active Substance: INFLIXIMAB
     Route: 042
  1189. REMICADE [Suspect]
     Active Substance: INFLIXIMAB
     Route: 042
  1190. REMICADE [Suspect]
     Active Substance: INFLIXIMAB
     Route: 042
  1191. REMICADE [Suspect]
     Active Substance: INFLIXIMAB
     Route: 042
  1192. REMICADE [Suspect]
     Active Substance: INFLIXIMAB
     Route: 042
  1193. REMICADE [Suspect]
     Active Substance: INFLIXIMAB
     Route: 042
  1194. REMICADE [Suspect]
     Active Substance: INFLIXIMAB
     Route: 042
  1195. REMICADE [Suspect]
     Active Substance: INFLIXIMAB
     Route: 042
  1196. REMICADE [Suspect]
     Active Substance: INFLIXIMAB
     Indication: Colitis
     Route: 042
  1197. REMICADE [Suspect]
     Active Substance: INFLIXIMAB
     Indication: Colitis
     Route: 042
  1198. REMICADE [Suspect]
     Active Substance: INFLIXIMAB
     Route: 042
  1199. REMICADE [Suspect]
     Active Substance: INFLIXIMAB
     Route: 042
  1200. REMICADE [Suspect]
     Active Substance: INFLIXIMAB
     Route: 042
  1201. REMICADE [Suspect]
     Active Substance: INFLIXIMAB
     Route: 042
  1202. REMICADE [Suspect]
     Active Substance: INFLIXIMAB
     Route: 042
  1203. REMICADE [Suspect]
     Active Substance: INFLIXIMAB
     Route: 042
  1204. REMICADE [Suspect]
     Active Substance: INFLIXIMAB
     Route: 042
  1205. REMICADE [Suspect]
     Active Substance: INFLIXIMAB
     Route: 042
  1206. REMICADE [Suspect]
     Active Substance: INFLIXIMAB
     Route: 042
  1207. REMICADE [Suspect]
     Active Substance: INFLIXIMAB
     Route: 042
  1208. REMICADE [Suspect]
     Active Substance: INFLIXIMAB
     Route: 042
  1209. REMICADE [Suspect]
     Active Substance: INFLIXIMAB
     Route: 042
  1210. REMICADE [Suspect]
     Active Substance: INFLIXIMAB
     Route: 042
  1211. REMICADE [Suspect]
     Active Substance: INFLIXIMAB
     Route: 042
  1212. REMICADE [Suspect]
     Active Substance: INFLIXIMAB
     Route: 042
  1213. REMICADE [Suspect]
     Active Substance: INFLIXIMAB
     Route: 042
  1214. REMICADE [Suspect]
     Active Substance: INFLIXIMAB
     Route: 042
  1215. REMICADE [Suspect]
     Active Substance: INFLIXIMAB
     Route: 042
  1216. REMICADE [Suspect]
     Active Substance: INFLIXIMAB
     Route: 042
  1217. REMICADE [Suspect]
     Active Substance: INFLIXIMAB
     Route: 042
  1218. REMICADE [Suspect]
     Active Substance: INFLIXIMAB
     Route: 042
  1219. REMICADE [Suspect]
     Active Substance: INFLIXIMAB
     Route: 042
  1220. REMICADE [Suspect]
     Active Substance: INFLIXIMAB
     Route: 042
  1221. REMICADE [Suspect]
     Active Substance: INFLIXIMAB
     Route: 042
  1222. REMICADE [Suspect]
     Active Substance: INFLIXIMAB
     Route: 042
  1223. REMICADE [Suspect]
     Active Substance: INFLIXIMAB
     Route: 042
  1224. REMICADE [Suspect]
     Active Substance: INFLIXIMAB
     Route: 042
  1225. REMICADE [Suspect]
     Active Substance: INFLIXIMAB
     Route: 042
  1226. REMICADE [Suspect]
     Active Substance: INFLIXIMAB
     Route: 042
  1227. REMICADE [Suspect]
     Active Substance: INFLIXIMAB
     Route: 042
  1228. REMICADE [Suspect]
     Active Substance: INFLIXIMAB
     Route: 042
  1229. REMICADE [Suspect]
     Active Substance: INFLIXIMAB
     Route: 042
  1230. REMICADE [Suspect]
     Active Substance: INFLIXIMAB
     Route: 042
  1231. REMICADE [Suspect]
     Active Substance: INFLIXIMAB
     Route: 042
  1232. REMICADE [Suspect]
     Active Substance: INFLIXIMAB
     Route: 042
  1233. REMICADE [Suspect]
     Active Substance: INFLIXIMAB
     Route: 042
  1234. REMICADE [Suspect]
     Active Substance: INFLIXIMAB
     Route: 042
  1235. REMICADE [Suspect]
     Active Substance: INFLIXIMAB
     Route: 042
  1236. REMICADE [Suspect]
     Active Substance: INFLIXIMAB
     Route: 042
  1237. REMICADE [Suspect]
     Active Substance: INFLIXIMAB
     Route: 042
  1238. REMICADE [Suspect]
     Active Substance: INFLIXIMAB
     Route: 042
  1239. REMICADE [Suspect]
     Active Substance: INFLIXIMAB
     Route: 042
  1240. REMICADE [Suspect]
     Active Substance: INFLIXIMAB
     Route: 042
  1241. REMICADE [Suspect]
     Active Substance: INFLIXIMAB
     Route: 042
  1242. REMICADE [Suspect]
     Active Substance: INFLIXIMAB
     Route: 042
  1243. REMICADE [Suspect]
     Active Substance: INFLIXIMAB
     Route: 042
  1244. REMICADE [Suspect]
     Active Substance: INFLIXIMAB
     Route: 042
  1245. REMICADE [Suspect]
     Active Substance: INFLIXIMAB
     Route: 042
  1246. REMICADE [Suspect]
     Active Substance: INFLIXIMAB
     Indication: Colitis
     Route: 042
  1247. REMICADE [Suspect]
     Active Substance: INFLIXIMAB
     Indication: Colitis
     Route: 042
  1248. REMICADE [Suspect]
     Active Substance: INFLIXIMAB
     Route: 042
  1249. REMICADE [Suspect]
     Active Substance: INFLIXIMAB
     Route: 042
  1250. REMICADE [Suspect]
     Active Substance: INFLIXIMAB
     Route: 042
  1251. REMICADE [Suspect]
     Active Substance: INFLIXIMAB
     Route: 042
  1252. REMICADE [Suspect]
     Active Substance: INFLIXIMAB
     Route: 042
  1253. REMICADE [Suspect]
     Active Substance: INFLIXIMAB
     Route: 042
  1254. REMICADE [Suspect]
     Active Substance: INFLIXIMAB
     Route: 042
  1255. REMICADE [Suspect]
     Active Substance: INFLIXIMAB
     Route: 042
  1256. REMICADE [Suspect]
     Active Substance: INFLIXIMAB
     Route: 042
  1257. REMICADE [Suspect]
     Active Substance: INFLIXIMAB
     Route: 042
  1258. REMICADE [Suspect]
     Active Substance: INFLIXIMAB
     Route: 042
  1259. REMICADE [Suspect]
     Active Substance: INFLIXIMAB
     Route: 042
  1260. REMICADE [Suspect]
     Active Substance: INFLIXIMAB
     Route: 042
  1261. REMICADE [Suspect]
     Active Substance: INFLIXIMAB
     Route: 042
  1262. REMICADE [Suspect]
     Active Substance: INFLIXIMAB
     Route: 042
  1263. REMICADE [Suspect]
     Active Substance: INFLIXIMAB
     Route: 042
  1264. REMICADE [Suspect]
     Active Substance: INFLIXIMAB
     Route: 042
  1265. REMICADE [Suspect]
     Active Substance: INFLIXIMAB
     Route: 042
  1266. REMICADE [Suspect]
     Active Substance: INFLIXIMAB
     Route: 042
  1267. REMICADE [Suspect]
     Active Substance: INFLIXIMAB
     Route: 042
  1268. REMICADE [Suspect]
     Active Substance: INFLIXIMAB
     Route: 042
  1269. REMICADE [Suspect]
     Active Substance: INFLIXIMAB
     Route: 042
  1270. REMICADE [Suspect]
     Active Substance: INFLIXIMAB
     Route: 042
  1271. REMICADE [Suspect]
     Active Substance: INFLIXIMAB
     Route: 042
  1272. REMICADE [Suspect]
     Active Substance: INFLIXIMAB
     Route: 042
  1273. REMICADE [Suspect]
     Active Substance: INFLIXIMAB
     Route: 042
  1274. REMICADE [Suspect]
     Active Substance: INFLIXIMAB
     Route: 042
  1275. REMICADE [Suspect]
     Active Substance: INFLIXIMAB
     Route: 042
  1276. REMICADE [Suspect]
     Active Substance: INFLIXIMAB
     Route: 042
  1277. REMICADE [Suspect]
     Active Substance: INFLIXIMAB
     Route: 042
  1278. REMICADE [Suspect]
     Active Substance: INFLIXIMAB
     Route: 042
  1279. REMICADE [Suspect]
     Active Substance: INFLIXIMAB
     Route: 042
  1280. REMICADE [Suspect]
     Active Substance: INFLIXIMAB
     Route: 042
  1281. REMICADE [Suspect]
     Active Substance: INFLIXIMAB
     Route: 042
  1282. REMICADE [Suspect]
     Active Substance: INFLIXIMAB
     Route: 042
  1283. REMICADE [Suspect]
     Active Substance: INFLIXIMAB
     Route: 042
  1284. REMICADE [Suspect]
     Active Substance: INFLIXIMAB
     Route: 042
  1285. REMICADE [Suspect]
     Active Substance: INFLIXIMAB
     Route: 042
  1286. REMICADE [Suspect]
     Active Substance: INFLIXIMAB
     Route: 042
  1287. REMICADE [Suspect]
     Active Substance: INFLIXIMAB
     Route: 042
  1288. REMICADE [Suspect]
     Active Substance: INFLIXIMAB
     Route: 042
  1289. REMICADE [Suspect]
     Active Substance: INFLIXIMAB
     Route: 042
  1290. REMICADE [Suspect]
     Active Substance: INFLIXIMAB
     Route: 042
  1291. REMICADE [Suspect]
     Active Substance: INFLIXIMAB
     Route: 042
  1292. REMICADE [Suspect]
     Active Substance: INFLIXIMAB
     Route: 042
  1293. REMICADE [Suspect]
     Active Substance: INFLIXIMAB
     Route: 042
  1294. REMICADE [Suspect]
     Active Substance: INFLIXIMAB
     Route: 042
  1295. REMICADE [Suspect]
     Active Substance: INFLIXIMAB
     Route: 042
  1296. REMICADE [Suspect]
     Active Substance: INFLIXIMAB
     Indication: Colitis
     Route: 042
  1297. REMICADE [Suspect]
     Active Substance: INFLIXIMAB
     Indication: Colitis
     Route: 042
  1298. REMICADE [Suspect]
     Active Substance: INFLIXIMAB
     Route: 042
  1299. REMICADE [Suspect]
     Active Substance: INFLIXIMAB
     Route: 042
  1300. REMICADE [Suspect]
     Active Substance: INFLIXIMAB
     Route: 042
  1301. REMICADE [Suspect]
     Active Substance: INFLIXIMAB
     Route: 042
  1302. REMICADE [Suspect]
     Active Substance: INFLIXIMAB
     Route: 042
  1303. REMICADE [Suspect]
     Active Substance: INFLIXIMAB
     Route: 042
  1304. REMICADE [Suspect]
     Active Substance: INFLIXIMAB
     Route: 042
  1305. REMICADE [Suspect]
     Active Substance: INFLIXIMAB
     Route: 042
  1306. REMICADE [Suspect]
     Active Substance: INFLIXIMAB
     Route: 042
  1307. REMICADE [Suspect]
     Active Substance: INFLIXIMAB
     Route: 042
  1308. REMICADE [Suspect]
     Active Substance: INFLIXIMAB
     Route: 042
  1309. REMICADE [Suspect]
     Active Substance: INFLIXIMAB
     Route: 042
  1310. REMICADE [Suspect]
     Active Substance: INFLIXIMAB
     Route: 042
  1311. REMICADE [Suspect]
     Active Substance: INFLIXIMAB
     Route: 042
  1312. REMICADE [Suspect]
     Active Substance: INFLIXIMAB
     Route: 042
  1313. REMICADE [Suspect]
     Active Substance: INFLIXIMAB
     Route: 042
  1314. REMICADE [Suspect]
     Active Substance: INFLIXIMAB
     Route: 042
  1315. REMICADE [Suspect]
     Active Substance: INFLIXIMAB
     Route: 042
  1316. REMICADE [Suspect]
     Active Substance: INFLIXIMAB
     Route: 042
  1317. REMICADE [Suspect]
     Active Substance: INFLIXIMAB
     Route: 042
  1318. REMICADE [Suspect]
     Active Substance: INFLIXIMAB
     Route: 042
  1319. REMICADE [Suspect]
     Active Substance: INFLIXIMAB
     Route: 042
  1320. REMICADE [Suspect]
     Active Substance: INFLIXIMAB
     Route: 042
  1321. REMICADE [Suspect]
     Active Substance: INFLIXIMAB
     Route: 042
  1322. REMICADE [Suspect]
     Active Substance: INFLIXIMAB
     Route: 042
  1323. REMICADE [Suspect]
     Active Substance: INFLIXIMAB
     Route: 042
  1324. REMICADE [Suspect]
     Active Substance: INFLIXIMAB
     Route: 042
  1325. REMICADE [Suspect]
     Active Substance: INFLIXIMAB
     Route: 042
  1326. REMICADE [Suspect]
     Active Substance: INFLIXIMAB
     Route: 042
  1327. REMICADE [Suspect]
     Active Substance: INFLIXIMAB
     Route: 042
  1328. REMICADE [Suspect]
     Active Substance: INFLIXIMAB
     Route: 042
  1329. REMICADE [Suspect]
     Active Substance: INFLIXIMAB
     Route: 042
  1330. REMICADE [Suspect]
     Active Substance: INFLIXIMAB
     Route: 042
  1331. REMICADE [Suspect]
     Active Substance: INFLIXIMAB
     Route: 042
  1332. REMICADE [Suspect]
     Active Substance: INFLIXIMAB
     Route: 042
  1333. REMICADE [Suspect]
     Active Substance: INFLIXIMAB
     Route: 042
  1334. REMICADE [Suspect]
     Active Substance: INFLIXIMAB
     Route: 042
  1335. REMICADE [Suspect]
     Active Substance: INFLIXIMAB
     Route: 042
  1336. REMICADE [Suspect]
     Active Substance: INFLIXIMAB
     Route: 042
  1337. REMICADE [Suspect]
     Active Substance: INFLIXIMAB
     Route: 042
  1338. REMICADE [Suspect]
     Active Substance: INFLIXIMAB
     Route: 042
  1339. REMICADE [Suspect]
     Active Substance: INFLIXIMAB
     Route: 042
  1340. REMICADE [Suspect]
     Active Substance: INFLIXIMAB
     Route: 042
  1341. REMICADE [Suspect]
     Active Substance: INFLIXIMAB
     Route: 042
  1342. REMICADE [Suspect]
     Active Substance: INFLIXIMAB
     Route: 042
  1343. REMICADE [Suspect]
     Active Substance: INFLIXIMAB
     Route: 042
  1344. REMICADE [Suspect]
     Active Substance: INFLIXIMAB
     Route: 042
  1345. REMICADE [Suspect]
     Active Substance: INFLIXIMAB
     Route: 042
  1346. REMICADE [Suspect]
     Active Substance: INFLIXIMAB
     Indication: Colitis
     Route: 042
  1347. REMICADE [Suspect]
     Active Substance: INFLIXIMAB
     Indication: Colitis
     Route: 042
  1348. REMICADE [Suspect]
     Active Substance: INFLIXIMAB
     Route: 042
  1349. REMICADE [Suspect]
     Active Substance: INFLIXIMAB
     Route: 042
  1350. REMICADE [Suspect]
     Active Substance: INFLIXIMAB
     Route: 042
  1351. REMICADE [Suspect]
     Active Substance: INFLIXIMAB
     Route: 042
  1352. REMICADE [Suspect]
     Active Substance: INFLIXIMAB
     Route: 042
  1353. REMICADE [Suspect]
     Active Substance: INFLIXIMAB
     Route: 042
  1354. REMICADE [Suspect]
     Active Substance: INFLIXIMAB
     Route: 042
  1355. REMICADE [Suspect]
     Active Substance: INFLIXIMAB
     Route: 042
  1356. REMICADE [Suspect]
     Active Substance: INFLIXIMAB
     Route: 042
  1357. REMICADE [Suspect]
     Active Substance: INFLIXIMAB
     Route: 042
  1358. REMICADE [Suspect]
     Active Substance: INFLIXIMAB
     Route: 042
  1359. REMICADE [Suspect]
     Active Substance: INFLIXIMAB
     Route: 042
  1360. REMICADE [Suspect]
     Active Substance: INFLIXIMAB
     Route: 042
  1361. REMICADE [Suspect]
     Active Substance: INFLIXIMAB
     Route: 042
  1362. REMICADE [Suspect]
     Active Substance: INFLIXIMAB
     Route: 042
  1363. REMICADE [Suspect]
     Active Substance: INFLIXIMAB
     Route: 042
  1364. REMICADE [Suspect]
     Active Substance: INFLIXIMAB
     Route: 042
  1365. REMICADE [Suspect]
     Active Substance: INFLIXIMAB
     Route: 042
  1366. REMICADE [Suspect]
     Active Substance: INFLIXIMAB
     Route: 042
  1367. REMICADE [Suspect]
     Active Substance: INFLIXIMAB
     Route: 042
  1368. REMICADE [Suspect]
     Active Substance: INFLIXIMAB
     Route: 042
  1369. REMICADE [Suspect]
     Active Substance: INFLIXIMAB
     Route: 042
  1370. REMICADE [Suspect]
     Active Substance: INFLIXIMAB
     Route: 042
  1371. REMICADE [Suspect]
     Active Substance: INFLIXIMAB
     Route: 042
  1372. REMICADE [Suspect]
     Active Substance: INFLIXIMAB
     Route: 042
  1373. REMICADE [Suspect]
     Active Substance: INFLIXIMAB
     Route: 042
  1374. REMICADE [Suspect]
     Active Substance: INFLIXIMAB
     Route: 042
  1375. REMICADE [Suspect]
     Active Substance: INFLIXIMAB
     Route: 042
  1376. REMICADE [Suspect]
     Active Substance: INFLIXIMAB
     Route: 042
  1377. REMICADE [Suspect]
     Active Substance: INFLIXIMAB
     Route: 042
  1378. REMICADE [Suspect]
     Active Substance: INFLIXIMAB
     Route: 042
  1379. REMICADE [Suspect]
     Active Substance: INFLIXIMAB
     Route: 042
  1380. REMICADE [Suspect]
     Active Substance: INFLIXIMAB
     Route: 042
  1381. REMICADE [Suspect]
     Active Substance: INFLIXIMAB
     Route: 042
  1382. REMICADE [Suspect]
     Active Substance: INFLIXIMAB
     Route: 042
  1383. REMICADE [Suspect]
     Active Substance: INFLIXIMAB
     Route: 042
  1384. REMICADE [Suspect]
     Active Substance: INFLIXIMAB
     Route: 042
  1385. REMICADE [Suspect]
     Active Substance: INFLIXIMAB
     Route: 042
  1386. REMICADE [Suspect]
     Active Substance: INFLIXIMAB
     Route: 042
  1387. REMICADE [Suspect]
     Active Substance: INFLIXIMAB
     Route: 042
  1388. REMICADE [Suspect]
     Active Substance: INFLIXIMAB
     Route: 042
  1389. REMICADE [Suspect]
     Active Substance: INFLIXIMAB
     Route: 042
  1390. REMICADE [Suspect]
     Active Substance: INFLIXIMAB
     Route: 042
  1391. REMICADE [Suspect]
     Active Substance: INFLIXIMAB
     Route: 042
  1392. REMICADE [Suspect]
     Active Substance: INFLIXIMAB
     Route: 042
  1393. REMICADE [Suspect]
     Active Substance: INFLIXIMAB
     Route: 042
  1394. REMICADE [Suspect]
     Active Substance: INFLIXIMAB
     Route: 042
  1395. REMICADE [Suspect]
     Active Substance: INFLIXIMAB
     Route: 042
  1396. REMICADE [Suspect]
     Active Substance: INFLIXIMAB
     Indication: Colitis
     Dosage: 7 MILLIGRAM/KILOGRAM, QWK; EVERY 1 WEEK
     Route: 042
     Dates: start: 20200407, end: 20230501
  1397. REMICADE [Suspect]
     Active Substance: INFLIXIMAB
     Indication: Colitis
     Route: 042
  1398. REMICADE [Suspect]
     Active Substance: INFLIXIMAB
     Route: 042
     Dates: start: 20200407, end: 20230501
  1399. REMICADE [Suspect]
     Active Substance: INFLIXIMAB
     Route: 042
  1400. REMICADE [Suspect]
     Active Substance: INFLIXIMAB
     Route: 042
  1401. REMICADE [Suspect]
     Active Substance: INFLIXIMAB
     Route: 042
  1402. REMICADE [Suspect]
     Active Substance: INFLIXIMAB
     Route: 042
  1403. REMICADE [Suspect]
     Active Substance: INFLIXIMAB
     Route: 042
  1404. REMICADE [Suspect]
     Active Substance: INFLIXIMAB
     Route: 042
  1405. REMICADE [Suspect]
     Active Substance: INFLIXIMAB
     Route: 042
  1406. REMICADE [Suspect]
     Active Substance: INFLIXIMAB
     Route: 042
  1407. REMICADE [Suspect]
     Active Substance: INFLIXIMAB
     Route: 042
  1408. REMICADE [Suspect]
     Active Substance: INFLIXIMAB
     Route: 042
  1409. REMICADE [Suspect]
     Active Substance: INFLIXIMAB
     Route: 042
  1410. REMICADE [Suspect]
     Active Substance: INFLIXIMAB
     Route: 042
  1411. REMICADE [Suspect]
     Active Substance: INFLIXIMAB
     Route: 042
  1412. REMICADE [Suspect]
     Active Substance: INFLIXIMAB
     Route: 042
  1413. REMICADE [Suspect]
     Active Substance: INFLIXIMAB
     Route: 042
  1414. REMICADE [Suspect]
     Active Substance: INFLIXIMAB
     Route: 042
  1415. REMICADE [Suspect]
     Active Substance: INFLIXIMAB
     Route: 042
  1416. REMICADE [Suspect]
     Active Substance: INFLIXIMAB
     Route: 042
  1417. REMICADE [Suspect]
     Active Substance: INFLIXIMAB
     Route: 042
  1418. REMICADE [Suspect]
     Active Substance: INFLIXIMAB
     Route: 042
  1419. REMICADE [Suspect]
     Active Substance: INFLIXIMAB
     Route: 042
  1420. REMICADE [Suspect]
     Active Substance: INFLIXIMAB
     Route: 042
  1421. REMICADE [Suspect]
     Active Substance: INFLIXIMAB
     Route: 042
  1422. REMICADE [Suspect]
     Active Substance: INFLIXIMAB
     Route: 042
  1423. REMICADE [Suspect]
     Active Substance: INFLIXIMAB
     Route: 042
  1424. REMICADE [Suspect]
     Active Substance: INFLIXIMAB
     Route: 042
  1425. REMICADE [Suspect]
     Active Substance: INFLIXIMAB
     Route: 042
  1426. REMICADE [Suspect]
     Active Substance: INFLIXIMAB
     Route: 042
  1427. REMICADE [Suspect]
     Active Substance: INFLIXIMAB
     Route: 042
  1428. REMICADE [Suspect]
     Active Substance: INFLIXIMAB
     Route: 042
  1429. REMICADE [Suspect]
     Active Substance: INFLIXIMAB
     Route: 042
  1430. REMICADE [Suspect]
     Active Substance: INFLIXIMAB
     Route: 042
  1431. REMICADE [Suspect]
     Active Substance: INFLIXIMAB
     Route: 042
  1432. REMICADE [Suspect]
     Active Substance: INFLIXIMAB
     Route: 042
  1433. REMICADE [Suspect]
     Active Substance: INFLIXIMAB
     Route: 042
  1434. REMICADE [Suspect]
     Active Substance: INFLIXIMAB
     Route: 042
  1435. REMICADE [Suspect]
     Active Substance: INFLIXIMAB
     Route: 042
  1436. REMICADE [Suspect]
     Active Substance: INFLIXIMAB
     Route: 042
  1437. REMICADE [Suspect]
     Active Substance: INFLIXIMAB
     Route: 042
  1438. REMICADE [Suspect]
     Active Substance: INFLIXIMAB
     Route: 042
  1439. REMICADE [Suspect]
     Active Substance: INFLIXIMAB
     Route: 042
  1440. REMICADE [Suspect]
     Active Substance: INFLIXIMAB
     Route: 042
  1441. REMICADE [Suspect]
     Active Substance: INFLIXIMAB
     Route: 042
  1442. REMICADE [Suspect]
     Active Substance: INFLIXIMAB
     Route: 042
  1443. REMICADE [Suspect]
     Active Substance: INFLIXIMAB
     Route: 042
  1444. REMICADE [Suspect]
     Active Substance: INFLIXIMAB
     Route: 042
  1445. REMICADE [Suspect]
     Active Substance: INFLIXIMAB
     Route: 042
  1446. REMICADE [Suspect]
     Active Substance: INFLIXIMAB
     Indication: Colitis
     Route: 042
  1447. REMICADE [Suspect]
     Active Substance: INFLIXIMAB
     Indication: Colitis
     Route: 042
  1448. REMICADE [Suspect]
     Active Substance: INFLIXIMAB
     Route: 042
  1449. REMICADE [Suspect]
     Active Substance: INFLIXIMAB
     Route: 042
  1450. REMICADE [Suspect]
     Active Substance: INFLIXIMAB
     Route: 042
  1451. REMICADE [Suspect]
     Active Substance: INFLIXIMAB
     Route: 042
  1452. REMICADE [Suspect]
     Active Substance: INFLIXIMAB
     Route: 042
  1453. REMICADE [Suspect]
     Active Substance: INFLIXIMAB
     Route: 042
  1454. REMICADE [Suspect]
     Active Substance: INFLIXIMAB
     Route: 042
  1455. REMICADE [Suspect]
     Active Substance: INFLIXIMAB
     Route: 042
  1456. REMICADE [Suspect]
     Active Substance: INFLIXIMAB
     Route: 042
  1457. REMICADE [Suspect]
     Active Substance: INFLIXIMAB
     Route: 042
  1458. REMICADE [Suspect]
     Active Substance: INFLIXIMAB
     Route: 042
  1459. REMICADE [Suspect]
     Active Substance: INFLIXIMAB
     Route: 042
  1460. REMICADE [Suspect]
     Active Substance: INFLIXIMAB
     Route: 042
  1461. REMICADE [Suspect]
     Active Substance: INFLIXIMAB
     Route: 042
  1462. REMICADE [Suspect]
     Active Substance: INFLIXIMAB
     Route: 042
  1463. REMICADE [Suspect]
     Active Substance: INFLIXIMAB
     Route: 042
  1464. REMICADE [Suspect]
     Active Substance: INFLIXIMAB
     Route: 042
  1465. REMICADE [Suspect]
     Active Substance: INFLIXIMAB
     Route: 042
  1466. REMICADE [Suspect]
     Active Substance: INFLIXIMAB
     Route: 042
  1467. REMICADE [Suspect]
     Active Substance: INFLIXIMAB
     Route: 042
  1468. REMICADE [Suspect]
     Active Substance: INFLIXIMAB
     Route: 042
  1469. REMICADE [Suspect]
     Active Substance: INFLIXIMAB
     Route: 042
  1470. REMICADE [Suspect]
     Active Substance: INFLIXIMAB
     Route: 042
  1471. REMICADE [Suspect]
     Active Substance: INFLIXIMAB
     Route: 042
  1472. REMICADE [Suspect]
     Active Substance: INFLIXIMAB
     Route: 042
  1473. REMICADE [Suspect]
     Active Substance: INFLIXIMAB
     Route: 042
  1474. REMICADE [Suspect]
     Active Substance: INFLIXIMAB
     Route: 042
  1475. REMICADE [Suspect]
     Active Substance: INFLIXIMAB
     Route: 042
  1476. REMICADE [Suspect]
     Active Substance: INFLIXIMAB
     Route: 042
  1477. REMICADE [Suspect]
     Active Substance: INFLIXIMAB
     Route: 042
  1478. REMICADE [Suspect]
     Active Substance: INFLIXIMAB
     Route: 042
  1479. REMICADE [Suspect]
     Active Substance: INFLIXIMAB
     Route: 042
  1480. REMICADE [Suspect]
     Active Substance: INFLIXIMAB
     Route: 042
  1481. REMICADE [Suspect]
     Active Substance: INFLIXIMAB
     Route: 042
  1482. REMICADE [Suspect]
     Active Substance: INFLIXIMAB
     Route: 042
  1483. REMICADE [Suspect]
     Active Substance: INFLIXIMAB
     Route: 042
  1484. REMICADE [Suspect]
     Active Substance: INFLIXIMAB
     Route: 042
  1485. REMICADE [Suspect]
     Active Substance: INFLIXIMAB
     Route: 042
  1486. REMICADE [Suspect]
     Active Substance: INFLIXIMAB
     Route: 042
  1487. REMICADE [Suspect]
     Active Substance: INFLIXIMAB
     Route: 042
  1488. REMICADE [Suspect]
     Active Substance: INFLIXIMAB
     Route: 042
  1489. REMICADE [Suspect]
     Active Substance: INFLIXIMAB
     Route: 042
  1490. REMICADE [Suspect]
     Active Substance: INFLIXIMAB
     Route: 042
  1491. REMICADE [Suspect]
     Active Substance: INFLIXIMAB
     Route: 042
  1492. REMICADE [Suspect]
     Active Substance: INFLIXIMAB
     Route: 042
  1493. REMICADE [Suspect]
     Active Substance: INFLIXIMAB
     Route: 042
  1494. REMICADE [Suspect]
     Active Substance: INFLIXIMAB
     Route: 042
  1495. REMICADE [Suspect]
     Active Substance: INFLIXIMAB
     Route: 042
  1496. REMICADE [Suspect]
     Active Substance: INFLIXIMAB
     Indication: Colitis
     Route: 042
  1497. REMICADE [Suspect]
     Active Substance: INFLIXIMAB
     Indication: Colitis
     Route: 042
  1498. REMICADE [Suspect]
     Active Substance: INFLIXIMAB
     Route: 042
  1499. REMICADE [Suspect]
     Active Substance: INFLIXIMAB
     Route: 042
  1500. REMICADE [Suspect]
     Active Substance: INFLIXIMAB
     Route: 042
  1501. REMICADE [Suspect]
     Active Substance: INFLIXIMAB
     Route: 042
  1502. REMICADE [Suspect]
     Active Substance: INFLIXIMAB
     Route: 042
  1503. REMICADE [Suspect]
     Active Substance: INFLIXIMAB
     Route: 042
  1504. REMICADE [Suspect]
     Active Substance: INFLIXIMAB
     Route: 042
  1505. REMICADE [Suspect]
     Active Substance: INFLIXIMAB
     Route: 042
  1506. REMICADE [Suspect]
     Active Substance: INFLIXIMAB
     Route: 042
  1507. REMICADE [Suspect]
     Active Substance: INFLIXIMAB
     Route: 042
  1508. REMICADE [Suspect]
     Active Substance: INFLIXIMAB
     Route: 042
  1509. REMICADE [Suspect]
     Active Substance: INFLIXIMAB
     Route: 042
  1510. REMICADE [Suspect]
     Active Substance: INFLIXIMAB
     Route: 042
  1511. REMICADE [Suspect]
     Active Substance: INFLIXIMAB
     Route: 042
  1512. REMICADE [Suspect]
     Active Substance: INFLIXIMAB
     Route: 042
  1513. REMICADE [Suspect]
     Active Substance: INFLIXIMAB
     Route: 042
  1514. REMICADE [Suspect]
     Active Substance: INFLIXIMAB
     Route: 042
  1515. REMICADE [Suspect]
     Active Substance: INFLIXIMAB
     Route: 042
  1516. REMICADE [Suspect]
     Active Substance: INFLIXIMAB
     Route: 042
  1517. REMICADE [Suspect]
     Active Substance: INFLIXIMAB
     Route: 042
  1518. REMICADE [Suspect]
     Active Substance: INFLIXIMAB
     Route: 042
  1519. REMICADE [Suspect]
     Active Substance: INFLIXIMAB
     Route: 042
  1520. REMICADE [Suspect]
     Active Substance: INFLIXIMAB
     Route: 042
  1521. REMICADE [Suspect]
     Active Substance: INFLIXIMAB
     Route: 042
  1522. REMICADE [Suspect]
     Active Substance: INFLIXIMAB
     Route: 042
  1523. REMICADE [Suspect]
     Active Substance: INFLIXIMAB
     Route: 042
  1524. REMICADE [Suspect]
     Active Substance: INFLIXIMAB
     Route: 042
  1525. REMICADE [Suspect]
     Active Substance: INFLIXIMAB
     Route: 042
  1526. REMICADE [Suspect]
     Active Substance: INFLIXIMAB
     Route: 042
  1527. REMICADE [Suspect]
     Active Substance: INFLIXIMAB
     Route: 042
  1528. REMICADE [Suspect]
     Active Substance: INFLIXIMAB
     Route: 042
  1529. REMICADE [Suspect]
     Active Substance: INFLIXIMAB
     Route: 042
  1530. REMICADE [Suspect]
     Active Substance: INFLIXIMAB
     Route: 042
  1531. REMICADE [Suspect]
     Active Substance: INFLIXIMAB
     Route: 042
  1532. REMICADE [Suspect]
     Active Substance: INFLIXIMAB
     Route: 042
  1533. REMICADE [Suspect]
     Active Substance: INFLIXIMAB
     Route: 042
  1534. REMICADE [Suspect]
     Active Substance: INFLIXIMAB
     Route: 042
  1535. REMICADE [Suspect]
     Active Substance: INFLIXIMAB
     Route: 042
  1536. REMICADE [Suspect]
     Active Substance: INFLIXIMAB
     Route: 042
  1537. REMICADE [Suspect]
     Active Substance: INFLIXIMAB
     Route: 042
  1538. REMICADE [Suspect]
     Active Substance: INFLIXIMAB
     Route: 042
  1539. REMICADE [Suspect]
     Active Substance: INFLIXIMAB
     Route: 042
  1540. REMICADE [Suspect]
     Active Substance: INFLIXIMAB
     Route: 042
  1541. REMICADE [Suspect]
     Active Substance: INFLIXIMAB
     Route: 042
  1542. REMICADE [Suspect]
     Active Substance: INFLIXIMAB
     Route: 042
  1543. REMICADE [Suspect]
     Active Substance: INFLIXIMAB
     Route: 042
  1544. REMICADE [Suspect]
     Active Substance: INFLIXIMAB
     Route: 042
  1545. REMICADE [Suspect]
     Active Substance: INFLIXIMAB
     Route: 042
  1546. REMICADE [Suspect]
     Active Substance: INFLIXIMAB
     Indication: Colitis
     Route: 042
  1547. REMICADE [Suspect]
     Active Substance: INFLIXIMAB
     Indication: Colitis
     Route: 042
  1548. REMICADE [Suspect]
     Active Substance: INFLIXIMAB
     Route: 042
  1549. REMICADE [Suspect]
     Active Substance: INFLIXIMAB
     Route: 042
  1550. REMICADE [Suspect]
     Active Substance: INFLIXIMAB
     Route: 042
  1551. REMICADE [Suspect]
     Active Substance: INFLIXIMAB
     Route: 042
  1552. REMICADE [Suspect]
     Active Substance: INFLIXIMAB
     Route: 042
  1553. REMICADE [Suspect]
     Active Substance: INFLIXIMAB
     Route: 042
  1554. REMICADE [Suspect]
     Active Substance: INFLIXIMAB
     Route: 042
  1555. REMICADE [Suspect]
     Active Substance: INFLIXIMAB
     Route: 042
  1556. REMICADE [Suspect]
     Active Substance: INFLIXIMAB
     Route: 042
  1557. REMICADE [Suspect]
     Active Substance: INFLIXIMAB
     Route: 042
  1558. REMICADE [Suspect]
     Active Substance: INFLIXIMAB
     Route: 042
  1559. REMICADE [Suspect]
     Active Substance: INFLIXIMAB
     Route: 042
  1560. REMICADE [Suspect]
     Active Substance: INFLIXIMAB
     Route: 042
  1561. REMICADE [Suspect]
     Active Substance: INFLIXIMAB
     Route: 042
  1562. REMICADE [Suspect]
     Active Substance: INFLIXIMAB
     Indication: Product used for unknown indication
     Route: 042
  1563. REMICADE [Suspect]
     Active Substance: INFLIXIMAB
     Route: 042
  1564. INFLIXIMAB [Suspect]
     Active Substance: INFLIXIMAB
     Indication: Colitis
     Route: 065
     Dates: start: 20200407, end: 20230501
  1565. INFLIXIMAB [Suspect]
     Active Substance: INFLIXIMAB
     Indication: Colitis
     Route: 065
  1566. INFLIXIMAB [Suspect]
     Active Substance: INFLIXIMAB
     Route: 065
     Dates: start: 20200407, end: 20230501
  1567. INFLIXIMAB [Suspect]
     Active Substance: INFLIXIMAB
     Dosage: 7 MG/KG, QW (10 MILLIGRAM/KILOGRAM, Q8WK) (CUMULATIVE DOSE: 1119MG/KG)/7 MILLIGRAM/KILOGRAM, QWK (10
     Route: 065
     Dates: start: 20200407, end: 20230501
  1568. INFLIXIMAB [Suspect]
     Active Substance: INFLIXIMAB
     Route: 065
     Dates: start: 20200407, end: 20230501
  1569. INFLIXIMAB [Suspect]
     Active Substance: INFLIXIMAB
     Route: 065
     Dates: start: 20200407, end: 20230501
  1570. INFLIXIMAB [Suspect]
     Active Substance: INFLIXIMAB
     Route: 065
  1571. INFLIXIMAB [Suspect]
     Active Substance: INFLIXIMAB
     Dosage: 10 MG/KG, Q8W (10 MILLIGRAM/KILOGRAM, Q8WK)/ CUMULATIVE DOSE 1119 MG/KG
     Route: 065
     Dates: start: 20200407, end: 20230501
  1572. INFLIXIMAB [Suspect]
     Active Substance: INFLIXIMAB
     Route: 065
  1573. INFLIXIMAB [Suspect]
     Active Substance: INFLIXIMAB
     Route: 065
  1574. INFLIXIMAB [Suspect]
     Active Substance: INFLIXIMAB
     Route: 065
  1575. INFLIXIMAB [Suspect]
     Active Substance: INFLIXIMAB
     Dosage: 7 MILLIGRAM/KILOGRAM, QW (CUMULATIVE DOSE TO FIRST REACTION: 199.821 MG/KG)
     Route: 065
     Dates: start: 20200407, end: 20230501
  1576. INFLIXIMAB [Suspect]
     Active Substance: INFLIXIMAB
     Dosage: 10 MG/KG, Q8W (10 MILLIGRAM/KILOGRAM, Q8WK)
     Route: 065
     Dates: start: 20200407, end: 20230501
  1577. INFLIXIMAB [Suspect]
     Active Substance: INFLIXIMAB
     Route: 065
  1578. INFLIXIMAB [Suspect]
     Active Substance: INFLIXIMAB
     Route: 065
  1579. INFLIXIMAB [Suspect]
     Active Substance: INFLIXIMAB
     Route: 065
  1580. INFLIXIMAB [Suspect]
     Active Substance: INFLIXIMAB
     Route: 065
  1581. INFLIXIMAB [Suspect]
     Active Substance: INFLIXIMAB
     Indication: Colitis
     Route: 065
  1582. INFLIXIMAB [Suspect]
     Active Substance: INFLIXIMAB
     Indication: Colitis
     Route: 065
  1583. INFLIXIMAB [Suspect]
     Active Substance: INFLIXIMAB
     Indication: Colitis ulcerative
     Route: 065
  1584. INFLIXIMAB [Suspect]
     Active Substance: INFLIXIMAB
     Route: 065
     Dates: start: 20200407, end: 20230501
  1585. INFLIXIMAB [Suspect]
     Active Substance: INFLIXIMAB
     Route: 065
  1586. INFLIXIMAB [Suspect]
     Active Substance: INFLIXIMAB
     Route: 065
  1587. INFLIXIMAB [Suspect]
     Active Substance: INFLIXIMAB
     Route: 065
  1588. INFLIXIMAB [Suspect]
     Active Substance: INFLIXIMAB
     Route: 065
  1589. INFLIXIMAB [Suspect]
     Active Substance: INFLIXIMAB
     Dosage: 7 MG/KG, QW (10 MILLIGRAM/KILOGRAM, Q8WK) (CUMULATIVE DOSE: 1119MG/KG)
     Route: 065
     Dates: start: 20200407, end: 20230501
  1590. INFLIXIMAB [Suspect]
     Active Substance: INFLIXIMAB
     Route: 065
  1591. INFLIXIMAB [Suspect]
     Active Substance: INFLIXIMAB
     Route: 065
  1592. INFLIXIMAB [Suspect]
     Active Substance: INFLIXIMAB
     Route: 065
  1593. INFLIXIMAB [Suspect]
     Active Substance: INFLIXIMAB
     Route: 065
  1594. INFLIXIMAB [Suspect]
     Active Substance: INFLIXIMAB
     Route: 065
  1595. INFLIXIMAB [Suspect]
     Active Substance: INFLIXIMAB
     Route: 065
  1596. INFLIXIMAB [Suspect]
     Active Substance: INFLIXIMAB
     Route: 065
  1597. INFLIXIMAB [Suspect]
     Active Substance: INFLIXIMAB
     Route: 065
  1598. INFLIXIMAB [Suspect]
     Active Substance: INFLIXIMAB
     Route: 065
  1599. INFLIXIMAB [Suspect]
     Active Substance: INFLIXIMAB
     Route: 065
  1600. INFLIXIMAB [Suspect]
     Active Substance: INFLIXIMAB
     Route: 065
  1601. INFLIXIMAB [Suspect]
     Active Substance: INFLIXIMAB
     Route: 065
  1602. INFLIXIMAB [Suspect]
     Active Substance: INFLIXIMAB
     Route: 065
  1603. INFLIXIMAB [Suspect]
     Active Substance: INFLIXIMAB
     Route: 065
  1604. INFLIXIMAB [Suspect]
     Active Substance: INFLIXIMAB
     Route: 065
  1605. INFLIXIMAB [Suspect]
     Active Substance: INFLIXIMAB
     Route: 065
  1606. INFLIXIMAB [Suspect]
     Active Substance: INFLIXIMAB
     Route: 065
  1607. INFLIXIMAB [Suspect]
     Active Substance: INFLIXIMAB
     Route: 065
  1608. INFLIXIMAB [Suspect]
     Active Substance: INFLIXIMAB
     Route: 065
  1609. INFLIXIMAB [Suspect]
     Active Substance: INFLIXIMAB
     Route: 065
  1610. INFLIXIMAB [Suspect]
     Active Substance: INFLIXIMAB
     Route: 065
  1611. INFLIXIMAB [Suspect]
     Active Substance: INFLIXIMAB
     Route: 065
  1612. INFLIXIMAB [Suspect]
     Active Substance: INFLIXIMAB
     Route: 065
  1613. INFLIXIMAB [Suspect]
     Active Substance: INFLIXIMAB
     Route: 065
  1614. INFLIXIMAB [Suspect]
     Active Substance: INFLIXIMAB
     Route: 065
  1615. INFLIXIMAB [Suspect]
     Active Substance: INFLIXIMAB
     Route: 065
  1616. INFLIXIMAB [Suspect]
     Active Substance: INFLIXIMAB
     Route: 065
  1617. INFLIXIMAB [Suspect]
     Active Substance: INFLIXIMAB
     Route: 065
  1618. INFLIXIMAB [Suspect]
     Active Substance: INFLIXIMAB
     Route: 065
  1619. INFLIXIMAB [Suspect]
     Active Substance: INFLIXIMAB
     Route: 065
  1620. INFLIXIMAB [Suspect]
     Active Substance: INFLIXIMAB
     Route: 065
  1621. INFLIXIMAB [Suspect]
     Active Substance: INFLIXIMAB
     Route: 065
  1622. INFLIXIMAB [Suspect]
     Active Substance: INFLIXIMAB
     Route: 065
  1623. INFLIXIMAB [Suspect]
     Active Substance: INFLIXIMAB
     Route: 065
     Dates: start: 20200407, end: 20230501
  1624. INFLIXIMAB [Suspect]
     Active Substance: INFLIXIMAB
     Route: 065
  1625. INFLIXIMAB [Suspect]
     Active Substance: INFLIXIMAB
     Dosage: 7 MG/KG, 1/WEEK (CUMULATIVE DOSE TO FIRST REACTION: 199.821 MG/KG, DRUG CUMULATIVE DOSAGE NUMBER: 11
     Route: 065
     Dates: start: 20200407, end: 20230501
  1626. INFLIXIMAB [Suspect]
     Active Substance: INFLIXIMAB
     Route: 065
  1627. INFLIXIMAB [Suspect]
     Active Substance: INFLIXIMAB
     Route: 065
  1628. INFLIXIMAB [Suspect]
     Active Substance: INFLIXIMAB
     Route: 065
  1629. INFLIXIMAB [Suspect]
     Active Substance: INFLIXIMAB
     Route: 065
  1630. INFLIXIMAB [Suspect]
     Active Substance: INFLIXIMAB
     Route: 065
  1631. INFLIXIMAB [Suspect]
     Active Substance: INFLIXIMAB
     Indication: Colitis
     Route: 065
  1632. INFLIXIMAB [Suspect]
     Active Substance: INFLIXIMAB
     Indication: Colitis
     Route: 065
  1633. INFLIXIMAB [Suspect]
     Active Substance: INFLIXIMAB
     Indication: Colitis ulcerative
     Route: 065
  1634. INFLIXIMAB [Suspect]
     Active Substance: INFLIXIMAB
     Route: 065
  1635. INFLIXIMAB [Suspect]
     Active Substance: INFLIXIMAB
     Route: 065
  1636. INFLIXIMAB [Suspect]
     Active Substance: INFLIXIMAB
     Route: 065
  1637. INFLIXIMAB [Suspect]
     Active Substance: INFLIXIMAB
     Route: 065
  1638. INFLIXIMAB [Suspect]
     Active Substance: INFLIXIMAB
     Route: 065
  1639. INFLIXIMAB [Suspect]
     Active Substance: INFLIXIMAB
     Route: 065
  1640. INFLIXIMAB [Suspect]
     Active Substance: INFLIXIMAB
     Route: 065
  1641. INFLIXIMAB [Suspect]
     Active Substance: INFLIXIMAB
     Route: 065
  1642. INFLIXIMAB [Suspect]
     Active Substance: INFLIXIMAB
     Route: 065
  1643. INFLIXIMAB [Suspect]
     Active Substance: INFLIXIMAB
     Route: 065
  1644. INFLIXIMAB [Suspect]
     Active Substance: INFLIXIMAB
     Dates: start: 20200407, end: 20230501
  1645. INFLIXIMAB [Suspect]
     Active Substance: INFLIXIMAB
     Dates: start: 20200407, end: 20230501
  1646. INFLIXIMAB [Suspect]
     Active Substance: INFLIXIMAB
     Dates: start: 20200407, end: 20230501
  1647. INFLIXIMAB [Suspect]
     Active Substance: INFLIXIMAB
     Route: 065
  1648. INFLIXIMAB [Suspect]
     Active Substance: INFLIXIMAB
     Route: 065
  1649. INFLIXIMAB [Suspect]
     Active Substance: INFLIXIMAB
     Route: 065
  1650. INFLIXIMAB [Suspect]
     Active Substance: INFLIXIMAB
     Route: 065
  1651. INFLIXIMAB [Suspect]
     Active Substance: INFLIXIMAB
     Route: 065
  1652. INFLIXIMAB [Suspect]
     Active Substance: INFLIXIMAB
     Route: 065
  1653. INFLIXIMAB [Suspect]
     Active Substance: INFLIXIMAB
     Route: 065
  1654. INFLIXIMAB [Suspect]
     Active Substance: INFLIXIMAB
     Route: 065
  1655. INFLIXIMAB [Suspect]
     Active Substance: INFLIXIMAB
     Route: 065
  1656. INFLIXIMAB [Suspect]
     Active Substance: INFLIXIMAB
     Route: 065
  1657. INFLIXIMAB [Suspect]
     Active Substance: INFLIXIMAB
     Route: 065
  1658. INFLIXIMAB [Suspect]
     Active Substance: INFLIXIMAB
     Route: 065
  1659. INFLIXIMAB [Suspect]
     Active Substance: INFLIXIMAB
     Route: 065
  1660. INFLIXIMAB [Suspect]
     Active Substance: INFLIXIMAB
     Route: 065
  1661. INFLIXIMAB [Suspect]
     Active Substance: INFLIXIMAB
     Route: 065
  1662. INFLIXIMAB [Suspect]
     Active Substance: INFLIXIMAB
     Route: 065
  1663. INFLIXIMAB [Suspect]
     Active Substance: INFLIXIMAB
     Dosage: 7 MG/KG; 7 MILLIGRAM/KILOGRAM (CUMULATIVE DOSE TO FIRST REACTION: 199.821 MG/KG)
     Route: 065
     Dates: start: 20200407, end: 20230501
  1664. INFLIXIMAB [Suspect]
     Active Substance: INFLIXIMAB
     Route: 065
     Dates: start: 20200407, end: 20230501
  1665. INFLIXIMAB [Suspect]
     Active Substance: INFLIXIMAB
     Route: 065
  1666. INFLIXIMAB [Suspect]
     Active Substance: INFLIXIMAB
     Indication: Colitis
     Route: 065
  1667. INFLIXIMAB [Suspect]
     Active Substance: INFLIXIMAB
     Indication: Colitis
     Route: 065
  1668. INFLIXIMAB [Suspect]
     Active Substance: INFLIXIMAB
     Indication: Colitis ulcerative
     Route: 065
  1669. INFLIXIMAB [Suspect]
     Active Substance: INFLIXIMAB
     Route: 065
  1670. INFLIXIMAB [Suspect]
     Active Substance: INFLIXIMAB
     Route: 065
  1671. INFLIXIMAB [Suspect]
     Active Substance: INFLIXIMAB
     Route: 065
  1672. INFLIXIMAB [Suspect]
     Active Substance: INFLIXIMAB
     Route: 065
  1673. INFLIXIMAB [Suspect]
     Active Substance: INFLIXIMAB
     Route: 065
  1674. INFLIXIMAB [Suspect]
     Active Substance: INFLIXIMAB
     Route: 065
  1675. INFLIXIMAB [Suspect]
     Active Substance: INFLIXIMAB
     Route: 065
  1676. INFLIXIMAB [Suspect]
     Active Substance: INFLIXIMAB
     Route: 065
  1677. INFLIXIMAB [Suspect]
     Active Substance: INFLIXIMAB
     Route: 065
     Dates: start: 20200407, end: 20230501
  1678. INFLIXIMAB [Suspect]
     Active Substance: INFLIXIMAB
     Route: 065
  1679. INFLIXIMAB [Suspect]
     Active Substance: INFLIXIMAB
     Route: 065
  1680. INFLIXIMAB [Suspect]
     Active Substance: INFLIXIMAB
     Route: 065
  1681. INFLIXIMAB [Suspect]
     Active Substance: INFLIXIMAB
     Route: 065
  1682. INFLIXIMAB [Suspect]
     Active Substance: INFLIXIMAB
     Route: 065
  1683. INFLIXIMAB [Suspect]
     Active Substance: INFLIXIMAB
     Route: 065
  1684. INFLIXIMAB [Suspect]
     Active Substance: INFLIXIMAB
     Route: 065
  1685. INFLIXIMAB [Suspect]
     Active Substance: INFLIXIMAB
     Route: 065
  1686. INFLIXIMAB [Suspect]
     Active Substance: INFLIXIMAB
     Route: 065
  1687. INFLIXIMAB [Suspect]
     Active Substance: INFLIXIMAB
     Route: 065
  1688. INFLIXIMAB [Suspect]
     Active Substance: INFLIXIMAB
     Route: 065
  1689. INFLIXIMAB [Suspect]
     Active Substance: INFLIXIMAB
     Route: 065
  1690. INFLIXIMAB [Suspect]
     Active Substance: INFLIXIMAB
     Route: 065
  1691. INFLIXIMAB [Suspect]
     Active Substance: INFLIXIMAB
     Route: 065
  1692. INFLIXIMAB [Suspect]
     Active Substance: INFLIXIMAB
     Route: 065
  1693. INFLIXIMAB [Suspect]
     Active Substance: INFLIXIMAB
     Route: 065
  1694. INFLIXIMAB [Suspect]
     Active Substance: INFLIXIMAB
     Route: 065
  1695. INFLIXIMAB [Suspect]
     Active Substance: INFLIXIMAB
     Route: 065
  1696. INFLIXIMAB [Suspect]
     Active Substance: INFLIXIMAB
     Route: 065
  1697. INFLIXIMAB [Suspect]
     Active Substance: INFLIXIMAB
     Route: 065
  1698. INFLIXIMAB [Suspect]
     Active Substance: INFLIXIMAB
     Route: 065
  1699. INFLIXIMAB [Suspect]
     Active Substance: INFLIXIMAB
     Route: 065
  1700. INFLIXIMAB [Suspect]
     Active Substance: INFLIXIMAB
     Route: 065
  1701. INFLIXIMAB [Suspect]
     Active Substance: INFLIXIMAB
     Route: 065
  1702. INFLIXIMAB [Suspect]
     Active Substance: INFLIXIMAB
     Route: 065
  1703. INFLIXIMAB [Suspect]
     Active Substance: INFLIXIMAB
     Route: 065
  1704. INFLIXIMAB [Suspect]
     Active Substance: INFLIXIMAB
     Route: 065
  1705. INFLIXIMAB [Suspect]
     Active Substance: INFLIXIMAB
     Route: 065
  1706. INFLIXIMAB [Suspect]
     Active Substance: INFLIXIMAB
     Route: 065
     Dates: start: 20200407, end: 20230501
  1707. INFLIXIMAB [Suspect]
     Active Substance: INFLIXIMAB
     Route: 065
     Dates: start: 20200407
  1708. INFLIXIMAB [Suspect]
     Active Substance: INFLIXIMAB
     Route: 065
     Dates: start: 20200407
  1709. INFLIXIMAB [Suspect]
     Active Substance: INFLIXIMAB
     Route: 065
  1710. INFLIXIMAB [Suspect]
     Active Substance: INFLIXIMAB
     Route: 065
     Dates: start: 20200707, end: 20230501
  1711. INFLIXIMAB [Suspect]
     Active Substance: INFLIXIMAB
     Route: 065
  1712. INFLIXIMAB [Suspect]
     Active Substance: INFLIXIMAB
     Route: 065
  1713. INFLIXIMAB [Suspect]
     Active Substance: INFLIXIMAB
     Route: 065
  1714. INFLIXIMAB [Suspect]
     Active Substance: INFLIXIMAB
     Route: 065
  1715. INFLIXIMAB [Suspect]
     Active Substance: INFLIXIMAB
     Route: 065
  1716. INFLIXIMAB [Suspect]
     Active Substance: INFLIXIMAB
     Indication: Colitis
     Route: 065
  1717. INFLIXIMAB [Suspect]
     Active Substance: INFLIXIMAB
     Indication: Colitis
     Route: 065
  1718. INFLIXIMAB [Suspect]
     Active Substance: INFLIXIMAB
     Route: 065
  1719. INFLIXIMAB [Suspect]
     Active Substance: INFLIXIMAB
     Route: 065
  1720. INFLIXIMAB [Suspect]
     Active Substance: INFLIXIMAB
     Route: 065
  1721. INFLIXIMAB [Suspect]
     Active Substance: INFLIXIMAB
     Route: 065
  1722. INFLIXIMAB [Suspect]
     Active Substance: INFLIXIMAB
     Route: 065
  1723. INFLIXIMAB [Suspect]
     Active Substance: INFLIXIMAB
     Route: 065
  1724. INFLIXIMAB [Suspect]
     Active Substance: INFLIXIMAB
     Route: 065
  1725. INFLIXIMAB [Suspect]
     Active Substance: INFLIXIMAB
     Route: 065
  1726. INFLIXIMAB [Suspect]
     Active Substance: INFLIXIMAB
     Route: 065
  1727. INFLIXIMAB [Suspect]
     Active Substance: INFLIXIMAB
     Route: 065
  1728. INFLIXIMAB [Suspect]
     Active Substance: INFLIXIMAB
     Dosage: 10 MG/KG, Q8W (10 MILLIGRAM/KILOGRAM, Q8WK)
     Route: 065
     Dates: start: 20200407, end: 20230501
  1729. INFLIXIMAB [Suspect]
     Active Substance: INFLIXIMAB
     Dosage: 10 MG/KG, Q8W (10 MILLIGRAM/KILOGRAM, Q8WK)
     Route: 065
     Dates: start: 20200407, end: 20230501
  1730. INFLIXIMAB [Suspect]
     Active Substance: INFLIXIMAB
     Dosage: 10 MG/KG, Q8W (10 MILLIGRAM/KILOGRAM, Q8WK)
     Route: 065
     Dates: start: 20200407, end: 20230501
  1731. INFLIXIMAB [Suspect]
     Active Substance: INFLIXIMAB
     Dosage: 10 MG/KG, Q8W (10 MILLIGRAM/KILOGRAM, Q8WK)
     Route: 065
     Dates: start: 20200407, end: 20230501
  1732. INFLIXIMAB [Suspect]
     Active Substance: INFLIXIMAB
     Dosage: 10 MG/KG, Q8W (10 MILLIGRAM/KILOGRAM, Q8WK)
     Route: 065
     Dates: start: 20200407, end: 20230501
  1733. INFLIXIMAB [Suspect]
     Active Substance: INFLIXIMAB
     Dosage: 10 MG/KG, Q8W (10 MILLIGRAM/KILOGRAM, Q8WK)
     Route: 065
     Dates: start: 20200407, end: 20230501
  1734. INFLIXIMAB [Suspect]
     Active Substance: INFLIXIMAB
     Route: 065
  1735. INFLIXIMAB [Suspect]
     Active Substance: INFLIXIMAB
     Route: 065
  1736. INFLIXIMAB [Suspect]
     Active Substance: INFLIXIMAB
     Route: 065
  1737. INFLIXIMAB [Suspect]
     Active Substance: INFLIXIMAB
     Route: 065
  1738. INFLIXIMAB [Suspect]
     Active Substance: INFLIXIMAB
     Route: 065
  1739. INFLIXIMAB [Suspect]
     Active Substance: INFLIXIMAB
     Route: 065
  1740. INFLIXIMAB [Suspect]
     Active Substance: INFLIXIMAB
     Route: 065
  1741. INFLIXIMAB [Suspect]
     Active Substance: INFLIXIMAB
     Route: 065
  1742. INFLIXIMAB [Suspect]
     Active Substance: INFLIXIMAB
     Route: 065
  1743. INFLIXIMAB [Suspect]
     Active Substance: INFLIXIMAB
     Route: 065
  1744. INFLIXIMAB [Suspect]
     Active Substance: INFLIXIMAB
     Route: 065
  1745. INFLIXIMAB [Suspect]
     Active Substance: INFLIXIMAB
     Route: 065
  1746. INFLIXIMAB [Suspect]
     Active Substance: INFLIXIMAB
     Route: 065
  1747. INFLIXIMAB [Suspect]
     Active Substance: INFLIXIMAB
     Route: 065
  1748. INFLIXIMAB [Suspect]
     Active Substance: INFLIXIMAB
     Route: 065
  1749. INFLIXIMAB [Suspect]
     Active Substance: INFLIXIMAB
     Route: 065
  1750. INFLIXIMAB [Suspect]
     Active Substance: INFLIXIMAB
     Route: 065
  1751. INFLIXIMAB [Suspect]
     Active Substance: INFLIXIMAB
     Route: 065
  1752. INFLIXIMAB [Suspect]
     Active Substance: INFLIXIMAB
     Route: 065
  1753. INFLIXIMAB [Suspect]
     Active Substance: INFLIXIMAB
     Route: 065
  1754. INFLIXIMAB [Suspect]
     Active Substance: INFLIXIMAB
     Route: 065
  1755. INFLIXIMAB [Suspect]
     Active Substance: INFLIXIMAB
     Route: 065
  1756. INFLIXIMAB [Suspect]
     Active Substance: INFLIXIMAB
     Route: 065
  1757. INFLIXIMAB [Suspect]
     Active Substance: INFLIXIMAB
     Route: 065
  1758. INFLIXIMAB [Suspect]
     Active Substance: INFLIXIMAB
     Route: 065
  1759. INFLIXIMAB [Suspect]
     Active Substance: INFLIXIMAB
     Route: 065
  1760. INFLIXIMAB [Suspect]
     Active Substance: INFLIXIMAB
     Route: 065
  1761. INFLIXIMAB [Suspect]
     Active Substance: INFLIXIMAB
     Route: 065
  1762. INFLIXIMAB [Suspect]
     Active Substance: INFLIXIMAB
     Route: 065
  1763. INFLIXIMAB [Suspect]
     Active Substance: INFLIXIMAB
     Route: 065
  1764. INFLIXIMAB [Suspect]
     Active Substance: INFLIXIMAB
     Route: 065
  1765. INFLIXIMAB [Suspect]
     Active Substance: INFLIXIMAB
     Route: 065
  1766. INFLIXIMAB [Suspect]
     Active Substance: INFLIXIMAB
     Indication: Colitis
     Route: 065
  1767. INFLIXIMAB [Suspect]
     Active Substance: INFLIXIMAB
     Indication: Colitis
     Route: 065
  1768. INFLIXIMAB [Suspect]
     Active Substance: INFLIXIMAB
     Route: 065
  1769. INFLIXIMAB [Suspect]
     Active Substance: INFLIXIMAB
     Route: 065
  1770. INFLIXIMAB [Suspect]
     Active Substance: INFLIXIMAB
     Route: 065
  1771. INFLIXIMAB [Suspect]
     Active Substance: INFLIXIMAB
     Route: 065
  1772. INFLIXIMAB [Suspect]
     Active Substance: INFLIXIMAB
     Route: 065
  1773. INFLIXIMAB [Suspect]
     Active Substance: INFLIXIMAB
     Route: 065
  1774. INFLIXIMAB [Suspect]
     Active Substance: INFLIXIMAB
     Route: 065
  1775. INFLIXIMAB [Suspect]
     Active Substance: INFLIXIMAB
     Route: 065
  1776. INFLIXIMAB [Suspect]
     Active Substance: INFLIXIMAB
     Route: 065
  1777. INFLIXIMAB [Suspect]
     Active Substance: INFLIXIMAB
     Route: 065
  1778. INFLIXIMAB [Suspect]
     Active Substance: INFLIXIMAB
     Route: 065
  1779. INFLIXIMAB [Suspect]
     Active Substance: INFLIXIMAB
     Route: 065
  1780. INFLIXIMAB [Suspect]
     Active Substance: INFLIXIMAB
     Route: 065
  1781. INFLIXIMAB [Suspect]
     Active Substance: INFLIXIMAB
     Route: 065
  1782. INFLIXIMAB [Suspect]
     Active Substance: INFLIXIMAB
     Route: 065
  1783. INFLIXIMAB [Suspect]
     Active Substance: INFLIXIMAB
     Route: 065
  1784. INFLIXIMAB [Suspect]
     Active Substance: INFLIXIMAB
     Route: 065
  1785. INFLIXIMAB [Suspect]
     Active Substance: INFLIXIMAB
     Route: 065
  1786. INFLIXIMAB [Suspect]
     Active Substance: INFLIXIMAB
     Route: 065
  1787. INFLIXIMAB [Suspect]
     Active Substance: INFLIXIMAB
     Route: 065
  1788. INFLIXIMAB [Suspect]
     Active Substance: INFLIXIMAB
     Route: 065
  1789. INFLIXIMAB [Suspect]
     Active Substance: INFLIXIMAB
     Route: 065
  1790. INFLIXIMAB [Suspect]
     Active Substance: INFLIXIMAB
     Route: 065
  1791. INFLIXIMAB [Suspect]
     Active Substance: INFLIXIMAB
     Route: 065
  1792. INFLIXIMAB [Suspect]
     Active Substance: INFLIXIMAB
     Route: 065
  1793. INFLIXIMAB [Suspect]
     Active Substance: INFLIXIMAB
     Route: 065
  1794. INFLIXIMAB [Suspect]
     Active Substance: INFLIXIMAB
     Route: 065
  1795. INFLIXIMAB [Suspect]
     Active Substance: INFLIXIMAB
     Route: 065
  1796. INFLIXIMAB [Suspect]
     Active Substance: INFLIXIMAB
     Route: 065
  1797. INFLIXIMAB [Suspect]
     Active Substance: INFLIXIMAB
     Route: 065
  1798. INFLIXIMAB [Suspect]
     Active Substance: INFLIXIMAB
     Route: 065
  1799. INFLIXIMAB [Suspect]
     Active Substance: INFLIXIMAB
     Route: 065
  1800. INFLIXIMAB [Suspect]
     Active Substance: INFLIXIMAB
     Route: 065
  1801. INFLIXIMAB [Suspect]
     Active Substance: INFLIXIMAB
     Route: 065
  1802. INFLIXIMAB [Suspect]
     Active Substance: INFLIXIMAB
     Route: 065
  1803. INFLIXIMAB [Suspect]
     Active Substance: INFLIXIMAB
     Route: 065
  1804. INFLIXIMAB [Suspect]
     Active Substance: INFLIXIMAB
     Route: 065
  1805. INFLIXIMAB [Suspect]
     Active Substance: INFLIXIMAB
     Route: 065
  1806. INFLIXIMAB [Suspect]
     Active Substance: INFLIXIMAB
     Route: 065
  1807. INFLIXIMAB [Suspect]
     Active Substance: INFLIXIMAB
     Route: 065
  1808. INFLIXIMAB [Suspect]
     Active Substance: INFLIXIMAB
     Route: 065
  1809. INFLIXIMAB [Suspect]
     Active Substance: INFLIXIMAB
     Route: 065
  1810. INFLIXIMAB [Suspect]
     Active Substance: INFLIXIMAB
     Route: 065
  1811. INFLIXIMAB [Suspect]
     Active Substance: INFLIXIMAB
     Route: 065
  1812. INFLIXIMAB [Suspect]
     Active Substance: INFLIXIMAB
     Route: 065
  1813. INFLIXIMAB [Suspect]
     Active Substance: INFLIXIMAB
     Route: 065
  1814. INFLIXIMAB [Suspect]
     Active Substance: INFLIXIMAB
     Route: 065
  1815. INFLIXIMAB [Suspect]
     Active Substance: INFLIXIMAB
     Route: 065
  1816. INFLIXIMAB [Suspect]
     Active Substance: INFLIXIMAB
     Indication: Colitis
     Route: 065
  1817. INFLIXIMAB [Suspect]
     Active Substance: INFLIXIMAB
     Indication: Colitis
     Route: 065
  1818. INFLIXIMAB [Suspect]
     Active Substance: INFLIXIMAB
     Indication: Colitis ulcerative
     Route: 065
  1819. INFLIXIMAB [Suspect]
     Active Substance: INFLIXIMAB
     Route: 065
  1820. INFLIXIMAB [Suspect]
     Active Substance: INFLIXIMAB
     Route: 065
  1821. INFLIXIMAB [Suspect]
     Active Substance: INFLIXIMAB
     Route: 065
  1822. INFLIXIMAB [Suspect]
     Active Substance: INFLIXIMAB
     Route: 065
  1823. INFLIXIMAB [Suspect]
     Active Substance: INFLIXIMAB
     Route: 065
  1824. INFLIXIMAB [Suspect]
     Active Substance: INFLIXIMAB
     Route: 065
  1825. INFLIXIMAB [Suspect]
     Active Substance: INFLIXIMAB
     Route: 065
  1826. INFLIXIMAB [Suspect]
     Active Substance: INFLIXIMAB
     Route: 065
  1827. INFLIXIMAB [Suspect]
     Active Substance: INFLIXIMAB
     Dosage: 7 MG/KG, QW (10 MILLIGRAM/KILOGRAM, Q8WK) (CUMULATIVE DOSE: 1119MG/KG)
     Route: 065
     Dates: start: 20200407, end: 20230501
  1828. INFLIXIMAB [Suspect]
     Active Substance: INFLIXIMAB
     Route: 065
  1829. INFLIXIMAB [Suspect]
     Active Substance: INFLIXIMAB
     Route: 065
  1830. INFLIXIMAB [Suspect]
     Active Substance: INFLIXIMAB
     Route: 065
  1831. INFLIXIMAB [Suspect]
     Active Substance: INFLIXIMAB
     Route: 065
  1832. INFLIXIMAB [Suspect]
     Active Substance: INFLIXIMAB
     Route: 065
  1833. INFLIXIMAB [Suspect]
     Active Substance: INFLIXIMAB
     Route: 065
  1834. INFLIXIMAB [Suspect]
     Active Substance: INFLIXIMAB
     Route: 065
     Dates: start: 20200407, end: 20230501
  1835. INFLIXIMAB [Suspect]
     Active Substance: INFLIXIMAB
     Route: 065
  1836. INFLIXIMAB [Suspect]
     Active Substance: INFLIXIMAB
     Route: 065
  1837. INFLIXIMAB [Suspect]
     Active Substance: INFLIXIMAB
     Route: 065
  1838. INFLIXIMAB [Suspect]
     Active Substance: INFLIXIMAB
     Route: 065
  1839. INFLIXIMAB [Suspect]
     Active Substance: INFLIXIMAB
     Route: 065
  1840. INFLIXIMAB [Suspect]
     Active Substance: INFLIXIMAB
     Route: 065
  1841. INFLIXIMAB [Suspect]
     Active Substance: INFLIXIMAB
     Route: 065
  1842. INFLIXIMAB [Suspect]
     Active Substance: INFLIXIMAB
     Route: 065
  1843. INFLIXIMAB [Suspect]
     Active Substance: INFLIXIMAB
     Route: 065
  1844. INFLIXIMAB [Suspect]
     Active Substance: INFLIXIMAB
     Route: 065
  1845. INFLIXIMAB [Suspect]
     Active Substance: INFLIXIMAB
     Route: 065
  1846. INFLIXIMAB [Suspect]
     Active Substance: INFLIXIMAB
     Route: 065
  1847. INFLIXIMAB [Suspect]
     Active Substance: INFLIXIMAB
     Route: 065
  1848. INFLIXIMAB [Suspect]
     Active Substance: INFLIXIMAB
     Route: 065
  1849. INFLIXIMAB [Suspect]
     Active Substance: INFLIXIMAB
     Route: 065
  1850. INFLIXIMAB [Suspect]
     Active Substance: INFLIXIMAB
     Route: 065
  1851. INFLIXIMAB [Suspect]
     Active Substance: INFLIXIMAB
     Route: 065
  1852. INFLIXIMAB [Suspect]
     Active Substance: INFLIXIMAB
     Route: 065
  1853. INFLIXIMAB [Suspect]
     Active Substance: INFLIXIMAB
     Route: 065
  1854. INFLIXIMAB [Suspect]
     Active Substance: INFLIXIMAB
     Route: 065
  1855. INFLIXIMAB [Suspect]
     Active Substance: INFLIXIMAB
     Route: 065
     Dates: start: 20200407, end: 20230501
  1856. INFLIXIMAB [Suspect]
     Active Substance: INFLIXIMAB
     Route: 065
     Dates: start: 20200407, end: 20230501
  1857. INFLIXIMAB [Suspect]
     Active Substance: INFLIXIMAB
     Route: 065
  1858. INFLIXIMAB [Suspect]
     Active Substance: INFLIXIMAB
     Route: 065
  1859. INFLIXIMAB [Suspect]
     Active Substance: INFLIXIMAB
     Route: 065
  1860. INFLIXIMAB [Suspect]
     Active Substance: INFLIXIMAB
     Route: 065
  1861. INFLIXIMAB [Suspect]
     Active Substance: INFLIXIMAB
     Route: 065
  1862. INFLIXIMAB [Suspect]
     Active Substance: INFLIXIMAB
     Route: 065
  1863. INFLIXIMAB [Suspect]
     Active Substance: INFLIXIMAB
     Route: 065
  1864. INFLIXIMAB [Suspect]
     Active Substance: INFLIXIMAB
     Route: 065
  1865. INFLIXIMAB [Suspect]
     Active Substance: INFLIXIMAB
     Route: 065
  1866. INFLIXIMAB [Suspect]
     Active Substance: INFLIXIMAB
     Indication: Colitis
     Route: 065
  1867. INFLIXIMAB [Suspect]
     Active Substance: INFLIXIMAB
     Indication: Colitis
     Route: 065
  1868. INFLIXIMAB [Suspect]
     Active Substance: INFLIXIMAB
     Indication: Colitis ulcerative
     Route: 065
  1869. INFLIXIMAB [Suspect]
     Active Substance: INFLIXIMAB
     Route: 065
  1870. INFLIXIMAB [Suspect]
     Active Substance: INFLIXIMAB
     Route: 065
  1871. INFLIXIMAB [Suspect]
     Active Substance: INFLIXIMAB
     Route: 065
  1872. INFLIXIMAB [Suspect]
     Active Substance: INFLIXIMAB
     Route: 065
  1873. INFLIXIMAB [Suspect]
     Active Substance: INFLIXIMAB
     Route: 065
  1874. INFLIXIMAB [Suspect]
     Active Substance: INFLIXIMAB
     Route: 065
  1875. INFLIXIMAB [Suspect]
     Active Substance: INFLIXIMAB
     Route: 065
  1876. INFLIXIMAB [Suspect]
     Active Substance: INFLIXIMAB
     Route: 065
  1877. INFLIXIMAB [Suspect]
     Active Substance: INFLIXIMAB
     Route: 065
  1878. INFLIXIMAB [Suspect]
     Active Substance: INFLIXIMAB
     Route: 065
  1879. INFLIXIMAB [Suspect]
     Active Substance: INFLIXIMAB
     Route: 065
  1880. INFLIXIMAB [Suspect]
     Active Substance: INFLIXIMAB
     Route: 065
  1881. INFLIXIMAB [Suspect]
     Active Substance: INFLIXIMAB
     Route: 065
  1882. INFLIXIMAB [Suspect]
     Active Substance: INFLIXIMAB
     Route: 065
  1883. INFLIXIMAB [Suspect]
     Active Substance: INFLIXIMAB
     Route: 065
  1884. INFLIXIMAB [Suspect]
     Active Substance: INFLIXIMAB
     Route: 065
  1885. INFLIXIMAB [Suspect]
     Active Substance: INFLIXIMAB
     Route: 065
  1886. INFLIXIMAB [Suspect]
     Active Substance: INFLIXIMAB
     Route: 065
  1887. INFLIXIMAB [Suspect]
     Active Substance: INFLIXIMAB
     Route: 065
  1888. INFLIXIMAB [Suspect]
     Active Substance: INFLIXIMAB
     Route: 065
  1889. INFLIXIMAB [Suspect]
     Active Substance: INFLIXIMAB
     Route: 065
  1890. INFLIXIMAB [Suspect]
     Active Substance: INFLIXIMAB
     Route: 065
  1891. INFLIXIMAB [Suspect]
     Active Substance: INFLIXIMAB
     Route: 065
  1892. INFLIXIMAB [Suspect]
     Active Substance: INFLIXIMAB
     Route: 065
  1893. INFLIXIMAB [Suspect]
     Active Substance: INFLIXIMAB
     Route: 065
  1894. INFLIXIMAB [Suspect]
     Active Substance: INFLIXIMAB
     Route: 065
  1895. INFLIXIMAB [Suspect]
     Active Substance: INFLIXIMAB
     Route: 065
  1896. INFLIXIMAB [Suspect]
     Active Substance: INFLIXIMAB
     Route: 065
  1897. INFLIXIMAB [Suspect]
     Active Substance: INFLIXIMAB
     Route: 065
  1898. INFLIXIMAB [Suspect]
     Active Substance: INFLIXIMAB
     Route: 065
  1899. INFLIXIMAB [Suspect]
     Active Substance: INFLIXIMAB
     Route: 065
  1900. INFLIXIMAB [Suspect]
     Active Substance: INFLIXIMAB
     Route: 065
  1901. INFLIXIMAB [Suspect]
     Active Substance: INFLIXIMAB
     Route: 065
  1902. INFLIXIMAB [Suspect]
     Active Substance: INFLIXIMAB
     Route: 065
  1903. INFLIXIMAB [Suspect]
     Active Substance: INFLIXIMAB
     Route: 065
  1904. INFLIXIMAB [Suspect]
     Active Substance: INFLIXIMAB
     Route: 065
  1905. INFLIXIMAB [Suspect]
     Active Substance: INFLIXIMAB
     Route: 065
  1906. INFLIXIMAB [Suspect]
     Active Substance: INFLIXIMAB
     Route: 065
  1907. INFLIXIMAB [Suspect]
     Active Substance: INFLIXIMAB
     Route: 065
  1908. INFLIXIMAB [Suspect]
     Active Substance: INFLIXIMAB
     Route: 065
  1909. INFLIXIMAB [Suspect]
     Active Substance: INFLIXIMAB
     Route: 065
  1910. INFLIXIMAB [Suspect]
     Active Substance: INFLIXIMAB
     Route: 065
  1911. INFLIXIMAB [Suspect]
     Active Substance: INFLIXIMAB
     Route: 065
  1912. INFLIXIMAB [Suspect]
     Active Substance: INFLIXIMAB
     Route: 065
  1913. INFLIXIMAB [Suspect]
     Active Substance: INFLIXIMAB
     Route: 065
  1914. INFLIXIMAB [Suspect]
     Active Substance: INFLIXIMAB
     Route: 065
  1915. INFLIXIMAB [Suspect]
     Active Substance: INFLIXIMAB
     Route: 065
  1916. INFLIXIMAB [Suspect]
     Active Substance: INFLIXIMAB
     Indication: Colitis
     Dosage: 7 MG/KG, QW (10 MILLIGRAM/KILOGRAM, Q8WK)
     Route: 065
     Dates: start: 20200407, end: 20230501
  1917. INFLIXIMAB [Suspect]
     Active Substance: INFLIXIMAB
     Indication: Colitis
  1918. INFLIXIMAB [Suspect]
     Active Substance: INFLIXIMAB
     Indication: Colitis
     Route: 065
  1919. INFLIXIMAB [Suspect]
     Active Substance: INFLIXIMAB
     Indication: Colitis
     Route: 065
  1920. INFLIXIMAB [Suspect]
     Active Substance: INFLIXIMAB
     Indication: Colitis ulcerative
     Route: 065
  1921. INFLIXIMAB [Suspect]
     Active Substance: INFLIXIMAB
     Route: 065
  1922. INFLIXIMAB [Suspect]
     Active Substance: INFLIXIMAB
     Route: 065
  1923. INFLIXIMAB [Suspect]
     Active Substance: INFLIXIMAB
     Route: 065
  1924. INFLIXIMAB [Suspect]
     Active Substance: INFLIXIMAB
     Route: 065
  1925. INFLIXIMAB [Suspect]
     Active Substance: INFLIXIMAB
     Route: 065
  1926. INFLIXIMAB [Suspect]
     Active Substance: INFLIXIMAB
     Route: 065
  1927. INFLIXIMAB [Suspect]
     Active Substance: INFLIXIMAB
     Route: 065
  1928. INFLIXIMAB [Suspect]
     Active Substance: INFLIXIMAB
     Route: 065
  1929. INFLIXIMAB [Suspect]
     Active Substance: INFLIXIMAB
     Route: 065
  1930. INFLIXIMAB [Suspect]
     Active Substance: INFLIXIMAB
     Route: 065
  1931. INFLIXIMAB [Suspect]
     Active Substance: INFLIXIMAB
     Route: 065
  1932. INFLIXIMAB [Suspect]
     Active Substance: INFLIXIMAB
     Route: 065
  1933. INFLIXIMAB [Suspect]
     Active Substance: INFLIXIMAB
     Dosage: 7 MG/KG, QW (10 MILLIGRAM/KILOGRAM, Q8WK)
     Route: 065
     Dates: start: 20200407, end: 20230501
  1934. INFLIXIMAB [Suspect]
     Active Substance: INFLIXIMAB
     Route: 065
     Dates: start: 20200407, end: 20230501
  1935. INFLIXIMAB [Suspect]
     Active Substance: INFLIXIMAB
     Route: 065
  1936. INFLIXIMAB [Suspect]
     Active Substance: INFLIXIMAB
     Route: 065
  1937. INFLIXIMAB [Suspect]
     Active Substance: INFLIXIMAB
     Route: 065
  1938. INFLIXIMAB [Suspect]
     Active Substance: INFLIXIMAB
     Route: 065
  1939. INFLIXIMAB [Suspect]
     Active Substance: INFLIXIMAB
     Route: 065
  1940. INFLIXIMAB [Suspect]
     Active Substance: INFLIXIMAB
     Route: 065
  1941. INFLIXIMAB [Suspect]
     Active Substance: INFLIXIMAB
     Route: 065
  1942. INFLIXIMAB [Suspect]
     Active Substance: INFLIXIMAB
     Route: 065
  1943. INFLIXIMAB [Suspect]
     Active Substance: INFLIXIMAB
     Route: 065
  1944. INFLIXIMAB [Suspect]
     Active Substance: INFLIXIMAB
     Route: 065
  1945. INFLIXIMAB [Suspect]
     Active Substance: INFLIXIMAB
     Dates: start: 20200407, end: 20230501
  1946. INFLIXIMAB [Suspect]
     Active Substance: INFLIXIMAB
     Dates: start: 20200407, end: 20230501
  1947. INFLIXIMAB [Suspect]
     Active Substance: INFLIXIMAB
     Dates: start: 20200407, end: 20230501
  1948. INFLIXIMAB [Suspect]
     Active Substance: INFLIXIMAB
     Dates: start: 20200407, end: 20230501
  1949. INFLIXIMAB [Suspect]
     Active Substance: INFLIXIMAB
  1950. INFLIXIMAB [Suspect]
     Active Substance: INFLIXIMAB
     Dates: start: 20200407, end: 20230501
  1951. INFLIXIMAB [Suspect]
     Active Substance: INFLIXIMAB
     Dosage: 7 MG/KG EVERY WEEK (DRUG CUMULATIVE DOSAGE NUMBER: 1119 MG/KG)
     Dates: start: 20200407, end: 20230501
  1952. INFLIXIMAB [Suspect]
     Active Substance: INFLIXIMAB
     Dates: start: 20200407, end: 20230501
  1953. INFLIXIMAB [Suspect]
     Active Substance: INFLIXIMAB
     Dates: start: 20200407, end: 20230501
  1954. INFLIXIMAB [Suspect]
     Active Substance: INFLIXIMAB
     Dosage: 7 MG/KG EVERY WEEK (DRUG CUMULATIVE DOSAGE NUMBER: 1119 MG/KG)
     Dates: start: 20200407, end: 20230501
  1955. INFLIXIMAB [Suspect]
     Active Substance: INFLIXIMAB
     Dates: start: 20200407, end: 20230501
  1956. INFLIXIMAB [Suspect]
     Active Substance: INFLIXIMAB
     Dates: start: 20200407, end: 20230501
  1957. INFLIXIMAB [Suspect]
     Active Substance: INFLIXIMAB
     Dates: start: 20200407, end: 20230501
  1958. INFLIXIMAB [Suspect]
     Active Substance: INFLIXIMAB
  1959. INFLIXIMAB [Suspect]
     Active Substance: INFLIXIMAB
  1960. INFLIXIMAB [Suspect]
     Active Substance: INFLIXIMAB
     Dates: start: 20200407, end: 20230501
  1961. INFLIXIMAB [Suspect]
     Active Substance: INFLIXIMAB
  1962. INFLIXIMAB [Suspect]
     Active Substance: INFLIXIMAB
  1963. INFLIXIMAB [Suspect]
     Active Substance: INFLIXIMAB
     Dates: start: 20200407, end: 20230501
  1964. INFLIXIMAB [Suspect]
     Active Substance: INFLIXIMAB
     Dates: start: 20200407
  1965. INFLIXIMAB [Suspect]
     Active Substance: INFLIXIMAB
  1966. INFLIXIMAB [Suspect]
     Active Substance: INFLIXIMAB
  1967. INFLIXIMAB [Suspect]
     Active Substance: INFLIXIMAB
  1968. INFLIXIMAB [Suspect]
     Active Substance: INFLIXIMAB
     Indication: Colitis
  1969. INFLIXIMAB [Suspect]
     Active Substance: INFLIXIMAB
     Indication: Colitis
     Dates: start: 20200407, end: 20230501
  1970. INFLIXIMAB [Suspect]
     Active Substance: INFLIXIMAB
     Indication: Colitis ulcerative
  1971. INFLIXIMAB [Suspect]
     Active Substance: INFLIXIMAB
  1972. INFLIXIMAB [Suspect]
     Active Substance: INFLIXIMAB
  1973. INFLIXIMAB [Suspect]
     Active Substance: INFLIXIMAB
  1974. INFLIXIMAB [Suspect]
     Active Substance: INFLIXIMAB
  1975. INFLIXIMAB [Suspect]
     Active Substance: INFLIXIMAB
  1976. INFLIXIMAB [Suspect]
     Active Substance: INFLIXIMAB
  1977. INFLIXIMAB [Suspect]
     Active Substance: INFLIXIMAB
     Indication: Colitis
     Dosage: 10 MG/KG, Q8W (10 MILLIGRAM/KILOGRAM, Q8WK); EVERY 1 WEEK
     Dates: start: 20200407, end: 20230501
  1978. INFLIXIMAB [Suspect]
     Active Substance: INFLIXIMAB
     Indication: Colitis
  1979. INFLIXIMAB [Suspect]
     Active Substance: INFLIXIMAB
     Indication: Colitis ulcerative
  1980. INFLIXIMAB [Suspect]
     Active Substance: INFLIXIMAB
  1981. INFLIXIMAB [Suspect]
     Active Substance: INFLIXIMAB
     Dosage: 7 MG/KG, QW (10 MILLIGRAM/KILOGRAM, Q8WK); EVERY 1 WEEK
     Dates: start: 20200407, end: 20230501
  1982. INFLIXIMAB [Suspect]
     Active Substance: INFLIXIMAB
  1983. INFLIXIMAB [Suspect]
     Active Substance: INFLIXIMAB
  1984. INFLIXIMAB [Suspect]
     Active Substance: INFLIXIMAB
  1985. INFLIXIMAB [Suspect]
     Active Substance: INFLIXIMAB
  1986. INFLIXIMAB [Suspect]
     Active Substance: INFLIXIMAB
  1987. INFLIXIMAB [Suspect]
     Active Substance: INFLIXIMAB
  1988. INFLIXIMAB [Suspect]
     Active Substance: INFLIXIMAB
  1989. INFLIXIMAB [Suspect]
     Active Substance: INFLIXIMAB
  1990. INFLIXIMAB [Suspect]
     Active Substance: INFLIXIMAB
  1991. INFLIXIMAB [Suspect]
     Active Substance: INFLIXIMAB
  1992. INFLIXIMAB [Suspect]
     Active Substance: INFLIXIMAB
  1993. INFLIXIMAB [Suspect]
     Active Substance: INFLIXIMAB
  1994. INFLIXIMAB [Suspect]
     Active Substance: INFLIXIMAB
  1995. INFLIXIMAB [Suspect]
     Active Substance: INFLIXIMAB
  1996. INFLIXIMAB [Suspect]
     Active Substance: INFLIXIMAB
  1997. INFLIXIMAB [Suspect]
     Active Substance: INFLIXIMAB
  1998. INFLIXIMAB [Suspect]
     Active Substance: INFLIXIMAB
  1999. INFLIXIMAB [Suspect]
     Active Substance: INFLIXIMAB
  2000. INFLIXIMAB [Suspect]
     Active Substance: INFLIXIMAB
  2001. INFLIXIMAB [Suspect]
     Active Substance: INFLIXIMAB
  2002. INFLIXIMAB [Suspect]
     Active Substance: INFLIXIMAB
  2003. INFLIXIMAB [Suspect]
     Active Substance: INFLIXIMAB
  2004. INFLIXIMAB [Suspect]
     Active Substance: INFLIXIMAB
  2005. INFLIXIMAB [Suspect]
     Active Substance: INFLIXIMAB
  2006. INFLIXIMAB [Suspect]
     Active Substance: INFLIXIMAB
  2007. INFLIXIMAB [Suspect]
     Active Substance: INFLIXIMAB
  2008. INFLIXIMAB [Suspect]
     Active Substance: INFLIXIMAB
  2009. INFLIXIMAB [Suspect]
     Active Substance: INFLIXIMAB
  2010. INFLIXIMAB [Suspect]
     Active Substance: INFLIXIMAB
  2011. INFLIXIMAB [Suspect]
     Active Substance: INFLIXIMAB
  2012. INFLIXIMAB [Suspect]
     Active Substance: INFLIXIMAB
  2013. INFLIXIMAB [Suspect]
     Active Substance: INFLIXIMAB
  2014. INFLIXIMAB [Suspect]
     Active Substance: INFLIXIMAB
  2015. INFLIXIMAB [Suspect]
     Active Substance: INFLIXIMAB
  2016. INFLIXIMAB [Suspect]
     Active Substance: INFLIXIMAB
  2017. INFLIXIMAB [Suspect]
     Active Substance: INFLIXIMAB
  2018. INFLIXIMAB [Suspect]
     Active Substance: INFLIXIMAB
  2019. INFLIXIMAB [Suspect]
     Active Substance: INFLIXIMAB
  2020. INFLIXIMAB [Suspect]
     Active Substance: INFLIXIMAB
  2021. INFLIXIMAB [Suspect]
     Active Substance: INFLIXIMAB
  2022. INFLIXIMAB [Suspect]
     Active Substance: INFLIXIMAB
  2023. INFLIXIMAB [Suspect]
     Active Substance: INFLIXIMAB
  2024. INFLIXIMAB [Suspect]
     Active Substance: INFLIXIMAB
  2025. INFLIXIMAB [Suspect]
     Active Substance: INFLIXIMAB
  2026. INFLIXIMAB [Suspect]
     Active Substance: INFLIXIMAB
  2027. INFLIXIMAB [Suspect]
     Active Substance: INFLIXIMAB
     Indication: Colitis
  2028. INFLIXIMAB [Suspect]
     Active Substance: INFLIXIMAB
     Indication: Colitis
  2029. INFLIXIMAB [Suspect]
     Active Substance: INFLIXIMAB
     Indication: Colitis ulcerative
  2030. INFLIXIMAB [Suspect]
     Active Substance: INFLIXIMAB
  2031. INFLIXIMAB [Suspect]
     Active Substance: INFLIXIMAB
  2032. INFLIXIMAB [Suspect]
     Active Substance: INFLIXIMAB
  2033. INFLIXIMAB [Suspect]
     Active Substance: INFLIXIMAB
  2034. INFLIXIMAB [Suspect]
     Active Substance: INFLIXIMAB
  2035. INFLIXIMAB [Suspect]
     Active Substance: INFLIXIMAB
  2036. INFLIXIMAB [Suspect]
     Active Substance: INFLIXIMAB
  2037. INFLIXIMAB [Suspect]
     Active Substance: INFLIXIMAB
  2038. INFLIXIMAB [Suspect]
     Active Substance: INFLIXIMAB
  2039. INFLIXIMAB [Suspect]
     Active Substance: INFLIXIMAB
  2040. INFLIXIMAB [Suspect]
     Active Substance: INFLIXIMAB
  2041. INFLIXIMAB [Suspect]
     Active Substance: INFLIXIMAB
  2042. INFLIXIMAB [Suspect]
     Active Substance: INFLIXIMAB
  2043. INFLIXIMAB [Suspect]
     Active Substance: INFLIXIMAB
  2044. INFLIXIMAB [Suspect]
     Active Substance: INFLIXIMAB
     Dates: end: 20230501
  2045. INFLIXIMAB [Suspect]
     Active Substance: INFLIXIMAB
     Dosage: 10 MG/KG, Q8W (10 MILLIGRAM/KILOGRAM, Q8WK)/ CUMULATIVE DOSE 1119 MG/KG; EVERY 1 WEEK
     Dates: end: 20230501
  2046. INFLIXIMAB [Suspect]
     Active Substance: INFLIXIMAB
  2047. INFLIXIMAB [Suspect]
     Active Substance: INFLIXIMAB
  2048. INFLIXIMAB [Suspect]
     Active Substance: INFLIXIMAB
  2049. INFLIXIMAB [Suspect]
     Active Substance: INFLIXIMAB
  2050. INFLIXIMAB [Suspect]
     Active Substance: INFLIXIMAB
  2051. INFLIXIMAB [Suspect]
     Active Substance: INFLIXIMAB
     Dosage: 7 MG/KG, QW (10 MILLIGRAM/KILOGRAM, Q8WK); EVERY 1 WEEK
     Dates: start: 20200407, end: 20230501
  2052. INFLIXIMAB [Suspect]
     Active Substance: INFLIXIMAB
  2053. INFLIXIMAB [Suspect]
     Active Substance: INFLIXIMAB
  2054. INFLIXIMAB [Suspect]
     Active Substance: INFLIXIMAB
  2055. INFLIXIMAB [Suspect]
     Active Substance: INFLIXIMAB
  2056. INFLIXIMAB [Suspect]
     Active Substance: INFLIXIMAB
  2057. INFLIXIMAB [Suspect]
     Active Substance: INFLIXIMAB
  2058. INFLIXIMAB [Suspect]
     Active Substance: INFLIXIMAB
  2059. INFLIXIMAB [Suspect]
     Active Substance: INFLIXIMAB
  2060. INFLIXIMAB [Suspect]
     Active Substance: INFLIXIMAB
  2061. INFLIXIMAB [Suspect]
     Active Substance: INFLIXIMAB
  2062. INFLIXIMAB [Suspect]
     Active Substance: INFLIXIMAB
  2063. INFLIXIMAB [Suspect]
     Active Substance: INFLIXIMAB
  2064. INFLIXIMAB [Suspect]
     Active Substance: INFLIXIMAB
  2065. INFLIXIMAB [Suspect]
     Active Substance: INFLIXIMAB
  2066. INFLIXIMAB [Suspect]
     Active Substance: INFLIXIMAB
  2067. INFLIXIMAB [Suspect]
     Active Substance: INFLIXIMAB
  2068. INFLIXIMAB [Suspect]
     Active Substance: INFLIXIMAB
  2069. INFLIXIMAB [Suspect]
     Active Substance: INFLIXIMAB
  2070. INFLIXIMAB [Suspect]
     Active Substance: INFLIXIMAB
  2071. INFLIXIMAB [Suspect]
     Active Substance: INFLIXIMAB
  2072. INFLIXIMAB [Suspect]
     Active Substance: INFLIXIMAB
  2073. INFLIXIMAB [Suspect]
     Active Substance: INFLIXIMAB
  2074. INFLIXIMAB [Suspect]
     Active Substance: INFLIXIMAB
  2075. INFLIXIMAB [Suspect]
     Active Substance: INFLIXIMAB
  2076. INFLIXIMAB [Suspect]
     Active Substance: INFLIXIMAB
  2077. INFLIXIMAB [Suspect]
     Active Substance: INFLIXIMAB
     Indication: Colitis
  2078. INFLIXIMAB [Suspect]
     Active Substance: INFLIXIMAB
     Indication: Colitis
  2079. INFLIXIMAB [Suspect]
     Active Substance: INFLIXIMAB
     Indication: Colitis ulcerative
  2080. INFLIXIMAB [Suspect]
     Active Substance: INFLIXIMAB
  2081. INFLIXIMAB [Suspect]
     Active Substance: INFLIXIMAB
  2082. INFLIXIMAB [Suspect]
     Active Substance: INFLIXIMAB
  2083. INFLIXIMAB [Suspect]
     Active Substance: INFLIXIMAB
  2084. INFLIXIMAB [Suspect]
     Active Substance: INFLIXIMAB
  2085. INFLIXIMAB [Suspect]
     Active Substance: INFLIXIMAB
  2086. INFLIXIMAB [Suspect]
     Active Substance: INFLIXIMAB
  2087. INFLIXIMAB [Suspect]
     Active Substance: INFLIXIMAB
  2088. INFLIXIMAB [Suspect]
     Active Substance: INFLIXIMAB
  2089. INFLIXIMAB [Suspect]
     Active Substance: INFLIXIMAB
  2090. INFLIXIMAB [Suspect]
     Active Substance: INFLIXIMAB
  2091. INFLIXIMAB [Suspect]
     Active Substance: INFLIXIMAB
  2092. INFLIXIMAB [Suspect]
     Active Substance: INFLIXIMAB
  2093. INFLIXIMAB [Suspect]
     Active Substance: INFLIXIMAB
  2094. INFLIXIMAB [Suspect]
     Active Substance: INFLIXIMAB
  2095. INFLIXIMAB [Suspect]
     Active Substance: INFLIXIMAB
  2096. INFLIXIMAB [Suspect]
     Active Substance: INFLIXIMAB
  2097. INFLIXIMAB [Suspect]
     Active Substance: INFLIXIMAB
  2098. INFLIXIMAB [Suspect]
     Active Substance: INFLIXIMAB
  2099. INFLIXIMAB [Suspect]
     Active Substance: INFLIXIMAB
  2100. INFLIXIMAB [Suspect]
     Active Substance: INFLIXIMAB
  2101. INFLIXIMAB [Suspect]
     Active Substance: INFLIXIMAB
  2102. INFLIXIMAB [Suspect]
     Active Substance: INFLIXIMAB
  2103. INFLIXIMAB [Suspect]
     Active Substance: INFLIXIMAB
  2104. INFLIXIMAB [Suspect]
     Active Substance: INFLIXIMAB
  2105. INFLIXIMAB [Suspect]
     Active Substance: INFLIXIMAB
  2106. INFLIXIMAB [Suspect]
     Active Substance: INFLIXIMAB
  2107. INFLIXIMAB [Suspect]
     Active Substance: INFLIXIMAB
  2108. INFLIXIMAB [Suspect]
     Active Substance: INFLIXIMAB
  2109. INFLIXIMAB [Suspect]
     Active Substance: INFLIXIMAB
  2110. INFLIXIMAB [Suspect]
     Active Substance: INFLIXIMAB
  2111. INFLIXIMAB [Suspect]
     Active Substance: INFLIXIMAB
  2112. INFLIXIMAB [Suspect]
     Active Substance: INFLIXIMAB
  2113. INFLIXIMAB [Suspect]
     Active Substance: INFLIXIMAB
  2114. INFLIXIMAB [Suspect]
     Active Substance: INFLIXIMAB
  2115. INFLIXIMAB [Suspect]
     Active Substance: INFLIXIMAB
  2116. INFLIXIMAB [Suspect]
     Active Substance: INFLIXIMAB
  2117. INFLIXIMAB [Suspect]
     Active Substance: INFLIXIMAB
  2118. INFLIXIMAB [Suspect]
     Active Substance: INFLIXIMAB
  2119. INFLIXIMAB [Suspect]
     Active Substance: INFLIXIMAB
  2120. INFLIXIMAB [Suspect]
     Active Substance: INFLIXIMAB
  2121. INFLIXIMAB [Suspect]
     Active Substance: INFLIXIMAB
  2122. INFLIXIMAB [Suspect]
     Active Substance: INFLIXIMAB
  2123. INFLIXIMAB [Suspect]
     Active Substance: INFLIXIMAB
  2124. INFLIXIMAB [Suspect]
     Active Substance: INFLIXIMAB
  2125. INFLIXIMAB [Suspect]
     Active Substance: INFLIXIMAB
  2126. INFLIXIMAB [Suspect]
     Active Substance: INFLIXIMAB
  2127. INFLIXIMAB [Suspect]
     Active Substance: INFLIXIMAB
     Indication: Colitis
  2128. INFLIXIMAB [Suspect]
     Active Substance: INFLIXIMAB
     Indication: Colitis
  2129. INFLIXIMAB [Suspect]
     Active Substance: INFLIXIMAB
     Indication: Colitis ulcerative
  2130. INFLIXIMAB [Suspect]
     Active Substance: INFLIXIMAB
  2131. INFLIXIMAB [Suspect]
     Active Substance: INFLIXIMAB
  2132. INFLIXIMAB [Suspect]
     Active Substance: INFLIXIMAB
  2133. INFLIXIMAB [Suspect]
     Active Substance: INFLIXIMAB
  2134. INFLIXIMAB [Suspect]
     Active Substance: INFLIXIMAB
  2135. INFLIXIMAB [Suspect]
     Active Substance: INFLIXIMAB
  2136. INFLIXIMAB [Suspect]
     Active Substance: INFLIXIMAB
  2137. INFLIXIMAB [Suspect]
     Active Substance: INFLIXIMAB
  2138. INFLIXIMAB [Suspect]
     Active Substance: INFLIXIMAB
  2139. INFLIXIMAB [Suspect]
     Active Substance: INFLIXIMAB
  2140. INFLIXIMAB [Suspect]
     Active Substance: INFLIXIMAB
  2141. INFLIXIMAB [Suspect]
     Active Substance: INFLIXIMAB
  2142. INFLIXIMAB [Suspect]
     Active Substance: INFLIXIMAB
  2143. INFLIXIMAB [Suspect]
     Active Substance: INFLIXIMAB
     Dosage: 7 MG/KG EVERY 1 WEEK (CUMULATIVE DOSE TO FIRST REACTION: 199.821 MG/KG, DRUG CUMULATIVE DOSAGE NUMBE
     Dates: start: 20200407, end: 20230501
  2144. INFLIXIMAB [Suspect]
     Active Substance: INFLIXIMAB
     Dates: start: 20200407, end: 20230501
  2145. INFLIXIMAB [Suspect]
     Active Substance: INFLIXIMAB
  2146. INFLIXIMAB [Suspect]
     Active Substance: INFLIXIMAB
  2147. INFLIXIMAB [Suspect]
     Active Substance: INFLIXIMAB
     Dates: start: 20200407, end: 20230501
  2148. INFLIXIMAB [Suspect]
     Active Substance: INFLIXIMAB
  2149. INFLIXIMAB [Suspect]
     Active Substance: INFLIXIMAB
  2150. INFLIXIMAB [Suspect]
     Active Substance: INFLIXIMAB
  2151. INFLIXIMAB [Suspect]
     Active Substance: INFLIXIMAB
  2152. INFLIXIMAB [Suspect]
     Active Substance: INFLIXIMAB
  2153. INFLIXIMAB [Suspect]
     Active Substance: INFLIXIMAB
  2154. INFLIXIMAB [Suspect]
     Active Substance: INFLIXIMAB
  2155. INFLIXIMAB [Suspect]
     Active Substance: INFLIXIMAB
  2156. INFLIXIMAB [Suspect]
     Active Substance: INFLIXIMAB
  2157. INFLIXIMAB [Suspect]
     Active Substance: INFLIXIMAB
  2158. INFLIXIMAB [Suspect]
     Active Substance: INFLIXIMAB
  2159. INFLIXIMAB [Suspect]
     Active Substance: INFLIXIMAB
  2160. INFLIXIMAB [Suspect]
     Active Substance: INFLIXIMAB
  2161. INFLIXIMAB [Suspect]
     Active Substance: INFLIXIMAB
  2162. INFLIXIMAB [Suspect]
     Active Substance: INFLIXIMAB
  2163. INFLIXIMAB [Suspect]
     Active Substance: INFLIXIMAB
  2164. INFLIXIMAB [Suspect]
     Active Substance: INFLIXIMAB
  2165. INFLIXIMAB [Suspect]
     Active Substance: INFLIXIMAB
  2166. INFLIXIMAB [Suspect]
     Active Substance: INFLIXIMAB
  2167. INFLIXIMAB [Suspect]
     Active Substance: INFLIXIMAB
  2168. INFLIXIMAB [Suspect]
     Active Substance: INFLIXIMAB
  2169. INFLIXIMAB [Suspect]
     Active Substance: INFLIXIMAB
  2170. INFLIXIMAB [Suspect]
     Active Substance: INFLIXIMAB
  2171. INFLIXIMAB [Suspect]
     Active Substance: INFLIXIMAB
  2172. INFLIXIMAB [Suspect]
     Active Substance: INFLIXIMAB
  2173. INFLIXIMAB [Suspect]
     Active Substance: INFLIXIMAB
  2174. INFLIXIMAB [Suspect]
     Active Substance: INFLIXIMAB
  2175. INFLIXIMAB [Suspect]
     Active Substance: INFLIXIMAB
  2176. INFLIXIMAB [Suspect]
     Active Substance: INFLIXIMAB
  2177. INFLIXIMAB [Suspect]
     Active Substance: INFLIXIMAB
     Indication: Colitis
  2178. INFLIXIMAB [Suspect]
     Active Substance: INFLIXIMAB
     Indication: Colitis
  2179. INFLIXIMAB [Suspect]
     Active Substance: INFLIXIMAB
     Indication: Colitis ulcerative
  2180. INFLIXIMAB [Suspect]
     Active Substance: INFLIXIMAB
  2181. INFLIXIMAB [Suspect]
     Active Substance: INFLIXIMAB
  2182. INFLIXIMAB [Suspect]
     Active Substance: INFLIXIMAB
  2183. INFLIXIMAB [Suspect]
     Active Substance: INFLIXIMAB
  2184. INFLIXIMAB [Suspect]
     Active Substance: INFLIXIMAB
  2185. INFLIXIMAB [Suspect]
     Active Substance: INFLIXIMAB
  2186. INFLIXIMAB [Suspect]
     Active Substance: INFLIXIMAB
  2187. INFLIXIMAB [Suspect]
     Active Substance: INFLIXIMAB
  2188. INFLIXIMAB [Suspect]
     Active Substance: INFLIXIMAB
  2189. INFLIXIMAB [Suspect]
     Active Substance: INFLIXIMAB
  2190. INFLIXIMAB [Suspect]
     Active Substance: INFLIXIMAB
  2191. INFLIXIMAB [Suspect]
     Active Substance: INFLIXIMAB
  2192. INFLIXIMAB [Suspect]
     Active Substance: INFLIXIMAB
  2193. INFLIXIMAB [Suspect]
     Active Substance: INFLIXIMAB
  2194. INFLIXIMAB [Suspect]
     Active Substance: INFLIXIMAB
  2195. INFLIXIMAB [Suspect]
     Active Substance: INFLIXIMAB
  2196. INFLIXIMAB [Suspect]
     Active Substance: INFLIXIMAB
  2197. INFLIXIMAB [Suspect]
     Active Substance: INFLIXIMAB
  2198. INFLIXIMAB [Suspect]
     Active Substance: INFLIXIMAB
  2199. INFLIXIMAB [Suspect]
     Active Substance: INFLIXIMAB
  2200. INFLIXIMAB [Suspect]
     Active Substance: INFLIXIMAB
  2201. INFLIXIMAB [Suspect]
     Active Substance: INFLIXIMAB
  2202. INFLIXIMAB [Suspect]
     Active Substance: INFLIXIMAB
  2203. INFLIXIMAB [Suspect]
     Active Substance: INFLIXIMAB
  2204. INFLIXIMAB [Suspect]
     Active Substance: INFLIXIMAB
  2205. INFLIXIMAB [Suspect]
     Active Substance: INFLIXIMAB
  2206. INFLIXIMAB [Suspect]
     Active Substance: INFLIXIMAB
  2207. INFLIXIMAB [Suspect]
     Active Substance: INFLIXIMAB
  2208. INFLIXIMAB [Suspect]
     Active Substance: INFLIXIMAB
  2209. INFLIXIMAB [Suspect]
     Active Substance: INFLIXIMAB
  2210. INFLIXIMAB [Suspect]
     Active Substance: INFLIXIMAB
  2211. INFLIXIMAB [Suspect]
     Active Substance: INFLIXIMAB
  2212. INFLIXIMAB [Suspect]
     Active Substance: INFLIXIMAB
  2213. INFLIXIMAB [Suspect]
     Active Substance: INFLIXIMAB
  2214. INFLIXIMAB [Suspect]
     Active Substance: INFLIXIMAB
  2215. INFLIXIMAB [Suspect]
     Active Substance: INFLIXIMAB
  2216. INFLIXIMAB [Suspect]
     Active Substance: INFLIXIMAB
  2217. INFLIXIMAB [Suspect]
     Active Substance: INFLIXIMAB
  2218. INFLIXIMAB [Suspect]
     Active Substance: INFLIXIMAB
  2219. INFLIXIMAB [Suspect]
     Active Substance: INFLIXIMAB
  2220. INFLIXIMAB [Suspect]
     Active Substance: INFLIXIMAB
  2221. INFLIXIMAB [Suspect]
     Active Substance: INFLIXIMAB
  2222. INFLIXIMAB [Suspect]
     Active Substance: INFLIXIMAB
  2223. INFLIXIMAB [Suspect]
     Active Substance: INFLIXIMAB
  2224. INFLIXIMAB [Suspect]
     Active Substance: INFLIXIMAB
  2225. INFLIXIMAB [Suspect]
     Active Substance: INFLIXIMAB
  2226. INFLIXIMAB [Suspect]
     Active Substance: INFLIXIMAB
  2227. INFLIXIMAB [Suspect]
     Active Substance: INFLIXIMAB
     Indication: Colitis
     Dates: start: 20200407, end: 20230501
  2228. INFLIXIMAB [Suspect]
     Active Substance: INFLIXIMAB
     Indication: Colitis
     Dates: start: 20200407, end: 20230501
  2229. INFLIXIMAB [Suspect]
     Active Substance: INFLIXIMAB
     Indication: Colitis ulcerative
  2230. METHOTREXATE SODIUM [Suspect]
     Active Substance: METHOTREXATE SODIUM
     Indication: Colitis
     Route: 065
  2231. METHOTREXATE SODIUM [Suspect]
     Active Substance: METHOTREXATE SODIUM
     Indication: Colitis
     Route: 065
  2232. METHOTREXATE SODIUM [Suspect]
     Active Substance: METHOTREXATE SODIUM
     Route: 065
  2233. METHOTREXATE SODIUM [Suspect]
     Active Substance: METHOTREXATE SODIUM
     Route: 065
  2234. METHOTREXATE SODIUM [Suspect]
     Active Substance: METHOTREXATE SODIUM
     Route: 065
  2235. METHOTREXATE SODIUM [Suspect]
     Active Substance: METHOTREXATE SODIUM
     Route: 065
  2236. METHOTREXATE SODIUM [Suspect]
     Active Substance: METHOTREXATE SODIUM
     Route: 065
  2237. METHOTREXATE SODIUM [Suspect]
     Active Substance: METHOTREXATE SODIUM
     Route: 065
  2238. METHOTREXATE SODIUM [Suspect]
     Active Substance: METHOTREXATE SODIUM
     Route: 065
  2239. METHOTREXATE SODIUM [Suspect]
     Active Substance: METHOTREXATE SODIUM
     Route: 065
  2240. METHOTREXATE SODIUM [Suspect]
     Active Substance: METHOTREXATE SODIUM
     Route: 065
  2241. METHOTREXATE SODIUM [Suspect]
     Active Substance: METHOTREXATE SODIUM
     Route: 065
  2242. METHOTREXATE SODIUM [Suspect]
     Active Substance: METHOTREXATE SODIUM
     Route: 065
  2243. METHOTREXATE SODIUM [Suspect]
     Active Substance: METHOTREXATE SODIUM
     Route: 065
  2244. METHOTREXATE SODIUM [Suspect]
     Active Substance: METHOTREXATE SODIUM
     Route: 065
  2245. METHOTREXATE SODIUM [Suspect]
     Active Substance: METHOTREXATE SODIUM
     Route: 065
  2246. METHOTREXATE SODIUM [Suspect]
     Active Substance: METHOTREXATE SODIUM
     Route: 065
  2247. METHOTREXATE SODIUM [Suspect]
     Active Substance: METHOTREXATE SODIUM
     Route: 065
  2248. METHOTREXATE SODIUM [Suspect]
     Active Substance: METHOTREXATE SODIUM
     Route: 065
  2249. METHOTREXATE SODIUM [Suspect]
     Active Substance: METHOTREXATE SODIUM
     Route: 065
  2250. METHOTREXATE SODIUM [Suspect]
     Active Substance: METHOTREXATE SODIUM
     Route: 065
  2251. METHOTREXATE SODIUM [Suspect]
     Active Substance: METHOTREXATE SODIUM
     Route: 065
  2252. METHOTREXATE SODIUM [Suspect]
     Active Substance: METHOTREXATE SODIUM
     Route: 065
  2253. METHOTREXATE SODIUM [Suspect]
     Active Substance: METHOTREXATE SODIUM
     Route: 065
  2254. METHOTREXATE SODIUM [Suspect]
     Active Substance: METHOTREXATE SODIUM
     Route: 065
  2255. METHOTREXATE SODIUM [Suspect]
     Active Substance: METHOTREXATE SODIUM
     Route: 065
  2256. METHOTREXATE SODIUM [Suspect]
     Active Substance: METHOTREXATE SODIUM
     Route: 065
  2257. METHOTREXATE SODIUM [Suspect]
     Active Substance: METHOTREXATE SODIUM
     Route: 065
  2258. METHOTREXATE SODIUM [Suspect]
     Active Substance: METHOTREXATE SODIUM
     Route: 065
  2259. METHOTREXATE SODIUM [Suspect]
     Active Substance: METHOTREXATE SODIUM
     Route: 065
  2260. METHOTREXATE SODIUM [Suspect]
     Active Substance: METHOTREXATE SODIUM
     Route: 065
  2261. METHOTREXATE SODIUM [Suspect]
     Active Substance: METHOTREXATE SODIUM
     Route: 065
  2262. METHOTREXATE SODIUM [Suspect]
     Active Substance: METHOTREXATE SODIUM
     Route: 065
  2263. METHOTREXATE SODIUM [Suspect]
     Active Substance: METHOTREXATE SODIUM
     Route: 065
  2264. METHOTREXATE SODIUM [Suspect]
     Active Substance: METHOTREXATE SODIUM
     Route: 065
  2265. METHOTREXATE SODIUM [Suspect]
     Active Substance: METHOTREXATE SODIUM
     Route: 065
  2266. METHOTREXATE SODIUM [Suspect]
     Active Substance: METHOTREXATE SODIUM
     Route: 065
  2267. METHOTREXATE SODIUM [Suspect]
     Active Substance: METHOTREXATE SODIUM
     Route: 065
  2268. METHOTREXATE SODIUM [Suspect]
     Active Substance: METHOTREXATE SODIUM
     Route: 065
  2269. METHOTREXATE SODIUM [Suspect]
     Active Substance: METHOTREXATE SODIUM
     Route: 065
  2270. METHOTREXATE SODIUM [Suspect]
     Active Substance: METHOTREXATE SODIUM
     Route: 065
  2271. METHOTREXATE SODIUM [Suspect]
     Active Substance: METHOTREXATE SODIUM
     Route: 065
  2272. METHOTREXATE SODIUM [Suspect]
     Active Substance: METHOTREXATE SODIUM
     Route: 065
  2273. METHOTREXATE SODIUM [Suspect]
     Active Substance: METHOTREXATE SODIUM
     Route: 065
  2274. METHOTREXATE SODIUM [Suspect]
     Active Substance: METHOTREXATE SODIUM
     Route: 065
  2275. METHOTREXATE SODIUM [Suspect]
     Active Substance: METHOTREXATE SODIUM
     Route: 065
  2276. METHOTREXATE SODIUM [Suspect]
     Active Substance: METHOTREXATE SODIUM
     Route: 065
  2277. METHOTREXATE SODIUM [Suspect]
     Active Substance: METHOTREXATE SODIUM
     Route: 065
  2278. METHOTREXATE SODIUM [Suspect]
     Active Substance: METHOTREXATE SODIUM
  2279. METHOTREXATE SODIUM [Suspect]
     Active Substance: METHOTREXATE SODIUM
  2280. METHOTREXATE SODIUM [Suspect]
     Active Substance: METHOTREXATE SODIUM
     Indication: Colitis
  2281. METHOTREXATE SODIUM [Suspect]
     Active Substance: METHOTREXATE SODIUM
     Indication: Colitis
  2282. METHOTREXATE SODIUM [Suspect]
     Active Substance: METHOTREXATE SODIUM
  2283. METHOTREXATE SODIUM [Suspect]
     Active Substance: METHOTREXATE SODIUM
  2284. METHOTREXATE SODIUM [Suspect]
     Active Substance: METHOTREXATE SODIUM
  2285. METHOTREXATE SODIUM [Suspect]
     Active Substance: METHOTREXATE SODIUM
  2286. METHOTREXATE [Concomitant]
     Active Substance: METHOTREXATE
     Indication: Colitis
     Route: 065
  2287. METHOTREXATE [Concomitant]
     Active Substance: METHOTREXATE
     Indication: Colitis
     Route: 065
  2288. METHOTREXATE [Concomitant]
     Active Substance: METHOTREXATE
     Route: 065
  2289. METHOTREXATE [Concomitant]
     Active Substance: METHOTREXATE
     Route: 065
  2290. METHOTREXATE [Concomitant]
     Active Substance: METHOTREXATE
     Route: 065
  2291. METHOTREXATE [Concomitant]
     Active Substance: METHOTREXATE
  2292. METHOTREXATE [Concomitant]
     Active Substance: METHOTREXATE
  2293. METHOTREXATE [Concomitant]
     Active Substance: METHOTREXATE
     Route: 065
  2294. METHOTREXATE [Concomitant]
     Active Substance: METHOTREXATE
     Route: 065
  2295. METHOTREXATE [Concomitant]
     Active Substance: METHOTREXATE
     Route: 065
  2296. METHOTREXATE [Concomitant]
     Active Substance: METHOTREXATE
     Route: 065
  2297. METHOTREXATE [Concomitant]
     Active Substance: METHOTREXATE
     Route: 065
  2298. METHOTREXATE [Concomitant]
     Active Substance: METHOTREXATE
     Route: 065
  2299. METHOTREXATE [Concomitant]
     Active Substance: METHOTREXATE
     Route: 065
  2300. METHOTREXATE [Concomitant]
     Active Substance: METHOTREXATE
     Route: 065
  2301. METHOTREXATE [Concomitant]
     Active Substance: METHOTREXATE
     Route: 065
  2302. METHOTREXATE [Concomitant]
     Active Substance: METHOTREXATE
     Route: 065
  2303. METHOTREXATE [Concomitant]
     Active Substance: METHOTREXATE
     Route: 065
  2304. METHOTREXATE [Concomitant]
     Active Substance: METHOTREXATE
     Route: 065
  2305. METHOTREXATE [Concomitant]
     Active Substance: METHOTREXATE
     Route: 065
  2306. METHOTREXATE [Concomitant]
     Active Substance: METHOTREXATE
     Route: 065
  2307. METHOTREXATE [Concomitant]
     Active Substance: METHOTREXATE
     Route: 065
  2308. METHOTREXATE [Concomitant]
     Active Substance: METHOTREXATE
     Route: 065
  2309. METHOTREXATE [Concomitant]
     Active Substance: METHOTREXATE
     Route: 065
  2310. METHOTREXATE [Concomitant]
     Active Substance: METHOTREXATE
     Route: 065
  2311. METHOTREXATE [Concomitant]
     Active Substance: METHOTREXATE
     Route: 065
  2312. METHOTREXATE [Concomitant]
     Active Substance: METHOTREXATE
     Route: 065
  2313. METHOTREXATE [Concomitant]
     Active Substance: METHOTREXATE
     Route: 065
  2314. METHOTREXATE [Concomitant]
     Active Substance: METHOTREXATE
     Route: 065
  2315. METHOTREXATE [Concomitant]
     Active Substance: METHOTREXATE
     Route: 065
  2316. METHOTREXATE [Concomitant]
     Active Substance: METHOTREXATE
     Route: 065
  2317. METHOTREXATE [Concomitant]
     Active Substance: METHOTREXATE
     Route: 065
  2318. METHOTREXATE [Concomitant]
     Active Substance: METHOTREXATE
     Route: 065
  2319. METHOTREXATE [Concomitant]
     Active Substance: METHOTREXATE
  2320. METHOTREXATE [Concomitant]
     Active Substance: METHOTREXATE
     Indication: Colitis
  2321. METHOTREXATE [Concomitant]
     Active Substance: METHOTREXATE
     Indication: Colitis

REACTIONS (8)
  - Arthritis bacterial [Recovering/Resolving]
  - Streptococcal sepsis [Recovering/Resolving]
  - Sepsis [Recovering/Resolving]
  - Streptococcal infection [Recovering/Resolving]
  - Arthralgia [Recovering/Resolving]
  - Product use in unapproved indication [Unknown]
  - Overdose [Unknown]
  - Off label use [Unknown]

NARRATIVE: CASE EVENT DATE: 20230501
